FAERS Safety Report 23639682 (Version 48)
Quarter: 2025Q3

REPORT INFORMATION
  Report Type: Spontaneous
  Country: GB (occurrence: GB)
  Receive Date: 20240316
  Receipt Date: 20250821
  Transmission Date: 20251020
  Serious: Yes (Death, Other)
  Sender: CELLTRION
  Company Number: GB-CELLTRION INC.-2021GB006804

PATIENT

DRUGS (2594)
  1. RITUXIMAB [Suspect]
     Active Substance: RITUXIMAB
     Indication: Diffuse large B-cell lymphoma
     Route: 042
     Dates: start: 20201124
  2. RITUXIMAB [Suspect]
     Active Substance: RITUXIMAB
     Route: 042
  3. RITUXIMAB [Suspect]
     Active Substance: RITUXIMAB
     Route: 042
  4. RITUXIMAB [Suspect]
     Active Substance: RITUXIMAB
     Route: 065
  5. RITUXIMAB [Suspect]
     Active Substance: RITUXIMAB
     Route: 065
  6. RITUXIMAB [Suspect]
     Active Substance: RITUXIMAB
     Route: 042
     Dates: start: 20210105, end: 20210216
  7. RITUXIMAB [Suspect]
     Active Substance: RITUXIMAB
     Route: 042
     Dates: start: 20210216, end: 20210216
  8. RITUXIMAB [Suspect]
     Active Substance: RITUXIMAB
     Route: 042
     Dates: start: 20201221, end: 20201221
  9. RITUXIMAB [Suspect]
     Active Substance: RITUXIMAB
     Route: 065
  10. RITUXIMAB [Suspect]
     Active Substance: RITUXIMAB
     Route: 065
  11. RITUXIMAB [Suspect]
     Active Substance: RITUXIMAB
     Route: 042
     Dates: start: 20201215, end: 20201215
  12. RITUXIMAB [Suspect]
     Active Substance: RITUXIMAB
     Route: 042
     Dates: start: 20210105, end: 20210105
  13. RITUXIMAB [Suspect]
     Active Substance: RITUXIMAB
     Route: 042
     Dates: start: 20210126
  14. RITUXIMAB [Suspect]
     Active Substance: RITUXIMAB
     Route: 042
     Dates: start: 20210216
  15. RITUXIMAB [Suspect]
     Active Substance: RITUXIMAB
     Route: 042
     Dates: start: 20210309, end: 20210309
  16. RITUXIMAB [Suspect]
     Active Substance: RITUXIMAB
     Dosage: 3 ML, TIW; ADDITIONAL INFO: ROUTE:UNKNOWN ROUTE:UNKNOWN ROUTE:UNKNOWN ROUTE:UNKNOWN ROUTE:UNKNOWN RO
     Route: 065
     Dates: start: 20210216, end: 20210216
  17. RITUXIMAB [Suspect]
     Active Substance: RITUXIMAB
     Dosage: 3 ML, TIW / 3 MILLILITER, 3XW (3 ML, TIW)/9 ML, 1 WK 3 MILLILITER, 3XW (3 ML, TIW)
     Route: 065
     Dates: start: 20210216, end: 20210216
  18. RITUXIMAB [Suspect]
     Active Substance: RITUXIMAB
     Dosage: 3 ML, TIW
     Route: 065
     Dates: start: 20210216, end: 20210216
  19. RITUXIMAB [Suspect]
     Active Substance: RITUXIMAB
     Dosage: 3 ML, TIW / 3 MILLILITER, 3XW (3 ML, TIW)
     Route: 065
     Dates: start: 20210216, end: 20210216
  20. RITUXIMAB [Suspect]
     Active Substance: RITUXIMAB
     Dosage: 3 ML, TIW
     Route: 065
     Dates: start: 20210216, end: 20210216
  21. RITUXIMAB [Suspect]
     Active Substance: RITUXIMAB
     Route: 065
  22. RITUXIMAB [Suspect]
     Active Substance: RITUXIMAB
     Route: 065
  23. RITUXIMAB [Suspect]
     Active Substance: RITUXIMAB
     Route: 050
     Dates: start: 20201124
  24. RITUXIMAB [Suspect]
     Active Substance: RITUXIMAB
     Route: 065
  25. RITUXIMAB [Suspect]
     Active Substance: RITUXIMAB
     Route: 065
  26. RITUXIMAB [Suspect]
     Active Substance: RITUXIMAB
     Dosage: 3 ML, TIW (DOSAGE TEXT: 3 ML, TIW, TIME INTERVAL: 0.33 WK) / 9 ML, 1 WK 3 MILLILITER, 3XW (3 ML, TIW
     Route: 065
     Dates: start: 20201221, end: 20201221
  27. RITUXIMAB [Suspect]
     Active Substance: RITUXIMAB
     Dosage: 3 ML, TIW (DOSAGE TEXT: 3 ML, TIW, TIME INTERVAL: 0.33 WK); ADDITIONAL INFO: ROUTE:UNKNOWN ROUTE:UNK
     Route: 065
     Dates: start: 20201221, end: 20201221
  28. RITUXIMAB [Suspect]
     Active Substance: RITUXIMAB
     Dosage: 3 ML, TIW (DOSAGE TEXT: 3 ML, TIW, TIME INTERVAL: 0.33 WK)
     Route: 065
     Dates: start: 20201221, end: 20201221
  29. RITUXIMAB [Suspect]
     Active Substance: RITUXIMAB
     Dosage: 3 ML, TIW (DOSAGE TEXT: 3 ML, TIW, TIME INTERVAL: 0.33 WK)
     Route: 065
     Dates: start: 20201221, end: 20201221
  30. RITUXIMAB [Suspect]
     Active Substance: RITUXIMAB
     Dosage: 3 ML, TIW (DOSAGE TEXT: 3 ML, TIW, TIME INTERVAL: 0.33 WK)
     Route: 065
     Dates: start: 20201221, end: 20201221
  31. RITUXIMAB [Suspect]
     Active Substance: RITUXIMAB
     Route: 065
  32. RITUXIMAB [Suspect]
     Active Substance: RITUXIMAB
     Dosage: 600 MG, TIW (TIME INTERVAL: 0.33 WEEK, ADDITIONAL INFO: ROUTE:) / 600 MILLIGRAM, 3XW (600 MG, TIW)
     Route: 065
     Dates: start: 20210105, end: 20210216
  33. RITUXIMAB [Suspect]
     Active Substance: RITUXIMAB
     Dosage: 600 MG, TIW (TIME INTERVAL: 0.33 WEEK, ADDITIONAL INFO: ROUTE:); ADDITIONAL INFO: ROUTE:UNKNOWN ROUT
     Route: 042
     Dates: start: 20210105, end: 20210216
  34. RITUXIMAB [Suspect]
     Active Substance: RITUXIMAB
     Dosage: 600 MG, TIW (TIME INTERVAL: 0.33 WEEK, ADDITIONAL INFO: ROUTE:)
     Route: 065
     Dates: start: 20210105, end: 20210216
  35. RITUXIMAB [Suspect]
     Active Substance: RITUXIMAB
     Dosage: 600 MG, TIW (TIME INTERVAL: 0.33 WEEK, ADDITIONAL INFO: ROUTE:)
     Route: 065
     Dates: start: 20210105, end: 20210216
  36. RITUXIMAB [Suspect]
     Active Substance: RITUXIMAB
     Dosage: 600 MG, TIW (TIME INTERVAL: 0.33 WEEK, ADDITIONAL INFO: ROUTE:)
     Route: 042
     Dates: start: 20210105, end: 20210216
  37. RITUXIMAB [Suspect]
     Active Substance: RITUXIMAB
     Route: 065
     Dates: start: 20201221, end: 20201221
  38. RITUXIMAB [Suspect]
     Active Substance: RITUXIMAB
     Route: 065
  39. RITUXIMAB [Suspect]
     Active Substance: RITUXIMAB
     Route: 065
  40. RITUXIMAB [Suspect]
     Active Substance: RITUXIMAB
     Route: 065
  41. RITUXIMAB [Suspect]
     Active Substance: RITUXIMAB
     Route: 042
     Dates: start: 20201124
  42. RITUXIMAB [Suspect]
     Active Substance: RITUXIMAB
     Route: 042
     Dates: start: 20201124
  43. RITUXIMAB [Suspect]
     Active Substance: RITUXIMAB
     Route: 042
     Dates: start: 20201124
  44. RITUXIMAB [Suspect]
     Active Substance: RITUXIMAB
     Route: 042
     Dates: start: 20201124
  45. RITUXIMAB [Suspect]
     Active Substance: RITUXIMAB
     Route: 042
     Dates: start: 20201124
  46. RITUXIMAB [Suspect]
     Active Substance: RITUXIMAB
     Route: 050
     Dates: start: 20201221, end: 20201221
  47. RITUXIMAB [Suspect]
     Active Substance: RITUXIMAB
     Route: 050
     Dates: start: 20201221, end: 20201221
  48. RITUXIMAB [Suspect]
     Active Substance: RITUXIMAB
     Route: 050
     Dates: start: 20201221, end: 20201221
  49. RITUXIMAB [Suspect]
     Active Substance: RITUXIMAB
     Route: 050
     Dates: start: 20201221, end: 20201221
  50. RITUXIMAB [Suspect]
     Active Substance: RITUXIMAB
     Route: 050
     Dates: start: 20201221, end: 20201221
  51. RITUXIMAB [Suspect]
     Active Substance: RITUXIMAB
     Indication: Diffuse large B-cell lymphoma
     Route: 050
     Dates: start: 20210105, end: 20210216
  52. RITUXIMAB [Suspect]
     Active Substance: RITUXIMAB
     Route: 050
     Dates: start: 20210105, end: 20210216
  53. RITUXIMAB [Suspect]
     Active Substance: RITUXIMAB
     Route: 050
     Dates: start: 20210105, end: 20210216
  54. RITUXIMAB [Suspect]
     Active Substance: RITUXIMAB
     Route: 050
     Dates: start: 20210105, end: 20210216
  55. RITUXIMAB [Suspect]
     Active Substance: RITUXIMAB
     Route: 050
     Dates: start: 20210105, end: 20210216
  56. RITUXIMAB [Suspect]
     Active Substance: RITUXIMAB
     Route: 050
     Dates: start: 20210216, end: 20210216
  57. RITUXIMAB [Suspect]
     Active Substance: RITUXIMAB
     Route: 050
     Dates: start: 20210216, end: 20210216
  58. RITUXIMAB [Suspect]
     Active Substance: RITUXIMAB
     Route: 050
     Dates: start: 20210216, end: 20210216
  59. RITUXIMAB [Suspect]
     Active Substance: RITUXIMAB
     Route: 050
     Dates: start: 20210216, end: 20210216
  60. RITUXIMAB [Suspect]
     Active Substance: RITUXIMAB
     Route: 050
     Dates: start: 20210216, end: 20210216
  61. RITUXIMAB [Suspect]
     Active Substance: RITUXIMAB
     Route: 042
     Dates: start: 20201221
  62. RITUXIMAB [Suspect]
     Active Substance: RITUXIMAB
     Dates: start: 20201124
  63. RITUXIMAB [Suspect]
     Active Substance: RITUXIMAB
     Route: 065
     Dates: start: 20201124
  64. RITUXIMAB [Suspect]
     Active Substance: RITUXIMAB
     Dates: start: 20201124
  65. RITUXIMAB [Suspect]
     Active Substance: RITUXIMAB
     Route: 065
     Dates: start: 20201124
  66. RITUXIMAB [Suspect]
     Active Substance: RITUXIMAB
     Route: 050
     Dates: end: 20201221
  67. RITUXIMAB [Suspect]
     Active Substance: RITUXIMAB
     Route: 042
     Dates: start: 20210216, end: 20210216
  68. RITUXIMAB [Suspect]
     Active Substance: RITUXIMAB
     Route: 042
     Dates: start: 20210105, end: 20210216
  69. RITUXIMAB [Suspect]
     Active Substance: RITUXIMAB
     Route: 042
  70. RITUXIMAB [Suspect]
     Active Substance: RITUXIMAB
     Dates: start: 20210126
  71. RITUXIMAB [Suspect]
     Active Substance: RITUXIMAB
  72. RITUXIMAB [Suspect]
     Active Substance: RITUXIMAB
     Dosage: 3 MILLILITER, 3XW/9 ML, 1 WK, 3 MILLILITER, 3XW
     Route: 065
     Dates: start: 20210216, end: 20210216
  73. RITUXIMAB [Suspect]
     Active Substance: RITUXIMAB
     Route: 042
     Dates: start: 20210216
  74. RITUXIMAB [Suspect]
     Active Substance: RITUXIMAB
     Route: 065
  75. RITUXIMAB [Suspect]
     Active Substance: RITUXIMAB
  76. RITUXIMAB [Suspect]
     Active Substance: RITUXIMAB
  77. RITUXIMAB [Suspect]
     Active Substance: RITUXIMAB
  78. RITUXIMAB [Suspect]
     Active Substance: RITUXIMAB
  79. RITUXIMAB [Suspect]
     Active Substance: RITUXIMAB
     Dates: start: 20201222
  80. RITUXIMAB [Suspect]
     Active Substance: RITUXIMAB
     Route: 065
     Dates: start: 20201215
  81. RITUXIMAB [Suspect]
     Active Substance: RITUXIMAB
     Route: 065
     Dates: start: 20210302
  82. RITUXIMAB [Suspect]
     Active Substance: RITUXIMAB
     Route: 065
     Dates: start: 20210209
  83. RITUXIMAB [Suspect]
     Active Substance: RITUXIMAB
     Dates: start: 20210216, end: 20210216
  84. RITUXIMAB [Suspect]
     Active Substance: RITUXIMAB
     Dosage: 100 MG
     Dates: start: 20201124, end: 20210216
  85. RITUXIMAB [Suspect]
     Active Substance: RITUXIMAB
     Dates: start: 20201221, end: 20201221
  86. RITUXIMAB [Suspect]
     Active Substance: RITUXIMAB
     Dates: start: 20210105, end: 20210216
  87. RITUXIMAB [Suspect]
     Active Substance: RITUXIMAB
     Dates: start: 20210216
  88. RITUXIMAB [Suspect]
     Active Substance: RITUXIMAB
     Dosage: 3 MILLILITER, 3XW
     Dates: start: 20210216, end: 20210216
  89. RITUXIMAB [Suspect]
     Active Substance: RITUXIMAB
     Dosage: 9 MILLIGRAM/SQ. METER (9 MG/M2, TOTAL VOLUME PRIOR AE 560 MLDATE OF MOST RECENT DOSE/9 MG/M2, TOTAL
     Route: 065
     Dates: start: 20201124
  90. RITUXIMAB [Suspect]
     Active Substance: RITUXIMAB
     Dates: start: 20210216
  91. RITUXIMAB [Suspect]
     Active Substance: RITUXIMAB
     Dosage: 3 MILLILITER, 3XW (3 ML, TIW)/9 ML 1 WK, 3 MILLILITER, 3XW
     Route: 065
     Dates: start: 20210216, end: 20210216
  92. RITUXIMAB [Suspect]
     Active Substance: RITUXIMAB
     Dosage: 9 MILLIGRAM/SQ. METER (9 MG/M2, TOTAL VOLUME PRIOR AE 560 MLDATE OF MOST RECENT DOSE PRIOR TO FIRST
     Route: 065
     Dates: start: 20201124
  93. RITUXIMAB [Suspect]
     Active Substance: RITUXIMAB
  94. RITUXIMAB [Suspect]
     Active Substance: RITUXIMAB
  95. RITUXIMAB [Suspect]
     Active Substance: RITUXIMAB
     Route: 065
  96. RITUXIMAB [Suspect]
     Active Substance: RITUXIMAB
  97. RITUXIMAB [Suspect]
     Active Substance: RITUXIMAB
  98. RITUXIMAB [Suspect]
     Active Substance: RITUXIMAB
  99. RITUXIMAB [Suspect]
     Active Substance: RITUXIMAB
  100. RITUXIMAB [Suspect]
     Active Substance: RITUXIMAB
     Dosage: 3 ML, TIW
     Route: 065
     Dates: start: 20201221, end: 20201221
  101. RITUXIMAB [Suspect]
     Active Substance: RITUXIMAB
     Indication: Diffuse large B-cell lymphoma
     Dosage: 600 MG/M2, 3/WEEK (9 MG/M2, TOTAL VOLUME PRIOR AE 560 MLDATE OF MOST RECENT DOSE PRIOR TO FIRST EPIS
     Dates: start: 20201124
  102. RITUXIMAB [Suspect]
     Active Substance: RITUXIMAB
     Dates: start: 20210216, end: 20210216
  103. RITUXIMAB [Suspect]
     Active Substance: RITUXIMAB
     Dosage: 9 ML, 1/WEEK (100 MG)
     Dates: start: 20201124, end: 20210216
  104. RITUXIMAB [Suspect]
     Active Substance: RITUXIMAB
     Dosage: 1800 MG, 1/WEEK (DOSAGE TEXT: 100 MG)
     Dates: start: 20201221, end: 20201221
  105. RITUXIMAB [Suspect]
     Active Substance: RITUXIMAB
     Dates: start: 20210105, end: 20210216
  106. RITUXIMAB [Suspect]
     Active Substance: RITUXIMAB
     Route: 050
     Dates: start: 20210105, end: 20210216
  107. RITUXIMAB [Suspect]
     Active Substance: RITUXIMAB
     Route: 050
     Dates: start: 20201221, end: 20201221
  108. RITUXIMAB [Suspect]
     Active Substance: RITUXIMAB
     Route: 050
  109. RITUXIMAB [Suspect]
     Active Substance: RITUXIMAB
     Route: 050
  110. RITUXIMAB [Suspect]
     Active Substance: RITUXIMAB
     Route: 050
     Dates: start: 20210216, end: 20210216
  111. RITUXIMAB [Suspect]
     Active Substance: RITUXIMAB
     Route: 050
  112. RITUXIMAB [Suspect]
     Active Substance: RITUXIMAB
     Route: 050
  113. RITUXIMAB [Suspect]
     Active Substance: RITUXIMAB
     Route: 050
     Dates: start: 20201124
  114. RITUXIMAB [Suspect]
     Active Substance: RITUXIMAB
     Route: 050
     Dates: start: 20201124
  115. RITUXIMAB [Suspect]
     Active Substance: RITUXIMAB
     Route: 050
     Dates: start: 20210105, end: 20210216
  116. RITUXIMAB [Suspect]
     Active Substance: RITUXIMAB
     Route: 050
     Dates: start: 20201221, end: 20201221
  117. RITUXIMAB [Suspect]
     Active Substance: RITUXIMAB
     Route: 050
     Dates: start: 20210216, end: 20210216
  118. RITUXIMAB [Suspect]
     Active Substance: RITUXIMAB
     Route: 050
     Dates: start: 20210216, end: 20210216
  119. RITUXIMAB [Suspect]
     Active Substance: RITUXIMAB
     Route: 050
     Dates: start: 20201221, end: 20201221
  120. RITUXIMAB [Suspect]
     Active Substance: RITUXIMAB
     Route: 050
     Dates: start: 20210105, end: 20210216
  121. RITUXIMAB [Suspect]
     Active Substance: RITUXIMAB
     Route: 050
     Dates: start: 20210216, end: 20210216
  122. RITUXIMAB [Suspect]
     Active Substance: RITUXIMAB
     Route: 050
     Dates: start: 20210216, end: 20210216
  123. RITUXIMAB [Suspect]
     Active Substance: RITUXIMAB
     Route: 050
     Dates: start: 20210105, end: 20210216
  124. RITUXIMAB [Suspect]
     Active Substance: RITUXIMAB
     Route: 050
     Dates: start: 20201124
  125. RITUXIMAB [Suspect]
     Active Substance: RITUXIMAB
     Route: 050
     Dates: start: 20201221, end: 20201221
  126. RITUXIMAB [Suspect]
     Active Substance: RITUXIMAB
     Route: 050
     Dates: start: 20210105, end: 20210216
  127. RITUXIMAB [Suspect]
     Active Substance: RITUXIMAB
     Route: 050
  128. RITUXIMAB [Suspect]
     Active Substance: RITUXIMAB
     Route: 050
     Dates: start: 20201124
  129. RITUXIMAB [Suspect]
     Active Substance: RITUXIMAB
     Route: 050
     Dates: start: 20201124
  130. RITUXIMAB [Suspect]
     Active Substance: RITUXIMAB
     Route: 050
     Dates: start: 20201221, end: 20201221
  131. RITUXIMAB [Suspect]
     Active Substance: RITUXIMAB
     Route: 050
     Dates: start: 20210105, end: 20210216
  132. RITUXIMAB [Suspect]
     Active Substance: RITUXIMAB
     Dosage: 3ML, TIW/9 ML, 3 MILLILITER, 3XW
     Route: 065
     Dates: start: 20201221, end: 20201221
  133. RITUXIMAB [Suspect]
     Active Substance: RITUXIMAB
     Dosage: 3ML, TIW
     Route: 065
     Dates: start: 20201221, end: 20201221
  134. RITUXIMAB [Suspect]
     Active Substance: RITUXIMAB
     Dosage: 600 MG, TIW
     Route: 065
     Dates: start: 20210105, end: 20210216
  135. RITUXIMAB [Suspect]
     Active Substance: RITUXIMAB
     Dosage: 600 MG, TIW
     Route: 065
     Dates: start: 20210105, end: 20210216
  136. RITUXIMAB [Suspect]
     Active Substance: RITUXIMAB
     Dosage: 600 MG, TIW
     Route: 065
     Dates: start: 20210105, end: 20210216
  137. RITUXIMAB [Suspect]
     Active Substance: RITUXIMAB
     Dosage: 600 MG, TIW
     Route: 065
     Dates: start: 20210105, end: 20210216
  138. RITUXIMAB [Suspect]
     Active Substance: RITUXIMAB
     Dosage: 600 MG, TIW
     Route: 065
     Dates: start: 20210105, end: 20210216
  139. RITUXIMAB [Suspect]
     Active Substance: RITUXIMAB
     Dosage: 3 ML, TIW
     Route: 065
     Dates: start: 20210216, end: 20210216
  140. RITUXIMAB [Suspect]
     Active Substance: RITUXIMAB
     Dosage: 3 ML, TIW
     Route: 065
     Dates: start: 20210216, end: 20210216
  141. RITUXIMAB [Suspect]
     Active Substance: RITUXIMAB
     Dosage: 3 ML, TIW
     Route: 065
     Dates: start: 20210216, end: 20210216
  142. RITUXIMAB [Suspect]
     Active Substance: RITUXIMAB
     Dosage: 3 ML, TIW
     Route: 065
     Dates: start: 20210216, end: 20210216
  143. RITUXIMAB [Suspect]
     Active Substance: RITUXIMAB
     Dosage: 3 ML, TIW
     Route: 065
     Dates: start: 20210216, end: 20210216
  144. RITUXIMAB [Suspect]
     Active Substance: RITUXIMAB
     Dosage: 9 MILLIGRAM/SQ. METER (9 MG/M2, TOTAL VOLUME PRIOR AE 560 MLDATE OF MOST RECENT DOSE PRIOR TO FIRST
     Route: 065
     Dates: start: 20201124
  145. RITUXIMAB [Suspect]
     Active Substance: RITUXIMAB
     Dosage: TOTAL VOLUME PRIOR AE 560 MLDATE OF MOST RECENT DOSE PRIOR TO FIRST EPISODE OF NEUTROPENIA
     Dates: start: 20201124
  146. RITUXIMAB [Suspect]
     Active Substance: RITUXIMAB
     Dosage: TOTAL VOLUME PRIOR AE 560 MLDATE OF MOST RECENT DOSE PRIOR TO FIRST EPISODE OF NEUTROPENIA
     Dates: start: 20201124
  147. RITUXIMAB [Suspect]
     Active Substance: RITUXIMAB
     Dosage: TOTAL VOLUME PRIOR AE 560 MLDATE OF MOST RECENT DOSE PRIOR TO FIRST EPISODE OF NEUTROPENIA
     Dates: start: 20201124
  148. RITUXIMAB [Suspect]
     Active Substance: RITUXIMAB
     Dosage: TOTAL VOLUME PRIOR AE 560 MLDATE OF MOST RECENT DOSE PRIOR TO FIRST EPISODE OF NEUTROPENIA
     Dates: start: 20201124
  149. RITUXIMAB [Suspect]
     Active Substance: RITUXIMAB
     Route: 065
     Dates: start: 20210216, end: 20210216
  150. RITUXIMAB [Suspect]
     Active Substance: RITUXIMAB
     Route: 042
     Dates: end: 20210216
  151. RITUXIMAB [Suspect]
     Active Substance: RITUXIMAB
     Indication: Diffuse large B-cell lymphoma
     Route: 042
     Dates: start: 20210105, end: 20210216
  152. RITUXIMAB [Suspect]
     Active Substance: RITUXIMAB
     Route: 065
     Dates: start: 20201221, end: 20201221
  153. RITUXIMAB [Suspect]
     Active Substance: RITUXIMAB
     Route: 065
     Dates: start: 20210216, end: 20210216
  154. RITUXIMAB [Suspect]
     Active Substance: RITUXIMAB
     Route: 065
     Dates: start: 20210216, end: 20210216
  155. RITUXIMAB [Suspect]
     Active Substance: RITUXIMAB
     Route: 065
     Dates: start: 20201221, end: 20201221
  156. RITUXIMAB [Suspect]
     Active Substance: RITUXIMAB
     Route: 065
     Dates: start: 20201124
  157. RITUXIMAB [Suspect]
     Active Substance: RITUXIMAB
     Route: 065
  158. RITUXIMAB [Suspect]
     Active Substance: RITUXIMAB
     Route: 042
     Dates: start: 20201124
  159. RITUXIMAB [Suspect]
     Active Substance: RITUXIMAB
     Route: 065
     Dates: start: 20201221, end: 20201221
  160. RITUXIMAB [Suspect]
     Active Substance: RITUXIMAB
     Route: 042
     Dates: start: 20210105, end: 20210216
  161. RITUXIMAB [Suspect]
     Active Substance: RITUXIMAB
     Route: 065
     Dates: start: 20201221
  162. RITUXIMAB [Suspect]
     Active Substance: RITUXIMAB
     Route: 042
     Dates: start: 20201124
  163. RITUXIMAB [Suspect]
     Active Substance: RITUXIMAB
     Route: 065
     Dates: start: 20201124
  164. RITUXIMAB [Suspect]
     Active Substance: RITUXIMAB
     Route: 042
     Dates: start: 20210216, end: 20210216
  165. RITUXIMAB [Suspect]
     Active Substance: RITUXIMAB
     Route: 065
     Dates: start: 20201124
  166. RITUXIMAB [Suspect]
     Active Substance: RITUXIMAB
     Route: 042
     Dates: start: 20210216
  167. RITUXIMAB [Suspect]
     Active Substance: RITUXIMAB
     Route: 042
     Dates: start: 20201124
  168. RITUXIMAB [Suspect]
     Active Substance: RITUXIMAB
     Route: 042
     Dates: start: 20210105, end: 20210216
  169. RITUXIMAB [Suspect]
     Active Substance: RITUXIMAB
     Route: 065
     Dates: start: 20201124
  170. RITUXIMAB [Suspect]
     Active Substance: RITUXIMAB
     Route: 065
     Dates: start: 20210209
  171. RITUXIMAB [Suspect]
     Active Substance: RITUXIMAB
     Route: 042
     Dates: start: 20210105, end: 20210216
  172. RITUXIMAB [Suspect]
     Active Substance: RITUXIMAB
     Route: 065
     Dates: start: 20201124
  173. RITUXIMAB [Suspect]
     Active Substance: RITUXIMAB
     Route: 065
     Dates: start: 20210302
  174. RITUXIMAB [Suspect]
     Active Substance: RITUXIMAB
     Route: 065
     Dates: start: 20201221, end: 20201221
  175. RITUXIMAB [Suspect]
     Active Substance: RITUXIMAB
     Route: 042
     Dates: start: 20210105, end: 20210216
  176. RITUXIMAB [Suspect]
     Active Substance: RITUXIMAB
     Route: 065
     Dates: start: 20201124
  177. RITUXIMAB [Suspect]
     Active Substance: RITUXIMAB
     Route: 065
     Dates: start: 20201124
  178. RITUXIMAB [Suspect]
     Active Substance: RITUXIMAB
     Route: 042
     Dates: start: 20210216, end: 20210216
  179. RITUXIMAB [Suspect]
     Active Substance: RITUXIMAB
     Route: 065
     Dates: start: 20201222
  180. RITUXIMAB [Suspect]
     Active Substance: RITUXIMAB
     Route: 065
     Dates: start: 20210126
  181. RITUXIMAB [Suspect]
     Active Substance: RITUXIMAB
     Route: 065
     Dates: start: 20201215
  182. RITUXIMAB [Suspect]
     Active Substance: RITUXIMAB
     Route: 042
     Dates: start: 20210216
  183. RITUXIMAB [Suspect]
     Active Substance: RITUXIMAB
     Route: 065
     Dates: start: 20201124
  184. RITUXIMAB [Suspect]
     Active Substance: RITUXIMAB
     Route: 065
     Dates: start: 20201124
  185. RITUXIMAB [Suspect]
     Active Substance: RITUXIMAB
     Route: 065
  186. RITUXIMAB [Suspect]
     Active Substance: RITUXIMAB
     Route: 065
     Dates: start: 20201124
  187. RITUXIMAB [Suspect]
     Active Substance: RITUXIMAB
     Route: 065
     Dates: start: 20201124
  188. RITUXIMAB [Suspect]
     Active Substance: RITUXIMAB
     Route: 065
     Dates: start: 20210105, end: 20210216
  189. RITUXIMAB [Suspect]
     Active Substance: RITUXIMAB
     Route: 065
  190. RITUXIMAB [Suspect]
     Active Substance: RITUXIMAB
     Route: 065
     Dates: start: 20201124
  191. RITUXIMAB [Suspect]
     Active Substance: RITUXIMAB
     Route: 065
     Dates: start: 20201124
  192. RITUXIMAB [Suspect]
     Active Substance: RITUXIMAB
     Route: 065
     Dates: start: 20201221
  193. RITUXIMAB [Suspect]
     Active Substance: RITUXIMAB
     Route: 065
  194. RITUXIMAB [Suspect]
     Active Substance: RITUXIMAB
     Route: 065
     Dates: start: 20201221, end: 20201221
  195. RITUXIMAB [Suspect]
     Active Substance: RITUXIMAB
     Route: 065
     Dates: start: 20210216, end: 20210216
  196. RITUXIMAB [Suspect]
     Active Substance: RITUXIMAB
     Route: 065
     Dates: start: 20201221, end: 20201221
  197. RITUXIMAB [Suspect]
     Active Substance: RITUXIMAB
     Route: 065
     Dates: start: 20210105, end: 20210216
  198. RITUXIMAB [Suspect]
     Active Substance: RITUXIMAB
     Route: 065
  199. RITUXIMAB [Suspect]
     Active Substance: RITUXIMAB
     Route: 065
  200. RITUXIMAB [Suspect]
     Active Substance: RITUXIMAB
     Route: 065
     Dates: start: 20201124
  201. RITUXIMAB [Suspect]
     Active Substance: RITUXIMAB
     Indication: Diffuse large B-cell lymphoma
     Route: 065
     Dates: start: 20210216, end: 20210216
  202. RITUXIMAB [Suspect]
     Active Substance: RITUXIMAB
     Route: 042
     Dates: start: 20201124
  203. RITUXIMAB [Suspect]
     Active Substance: RITUXIMAB
     Route: 042
     Dates: start: 20210105, end: 20210216
  204. RITUXIMAB [Suspect]
     Active Substance: RITUXIMAB
     Route: 065
     Dates: start: 20201221, end: 20201221
  205. RITUXIMAB [Suspect]
     Active Substance: RITUXIMAB
     Route: 065
     Dates: start: 20210216, end: 20210216
  206. RITUXIMAB [Suspect]
     Active Substance: RITUXIMAB
     Route: 065
     Dates: start: 20210105, end: 20210216
  207. RITUXIMAB [Suspect]
     Active Substance: RITUXIMAB
     Route: 065
     Dates: start: 20201221, end: 20201221
  208. RITUXIMAB [Suspect]
     Active Substance: RITUXIMAB
     Route: 065
     Dates: start: 20210216, end: 20210216
  209. RITUXIMAB [Suspect]
     Active Substance: RITUXIMAB
     Route: 065
     Dates: start: 20210216, end: 20210216
  210. RITUXIMAB [Suspect]
     Active Substance: RITUXIMAB
     Route: 065
     Dates: start: 20201221, end: 20201221
  211. RITUXIMAB [Suspect]
     Active Substance: RITUXIMAB
     Route: 042
     Dates: start: 20201126
  212. RITUXIMAB [Suspect]
     Active Substance: RITUXIMAB
     Route: 065
     Dates: start: 20210105, end: 20210216
  213. RITUXIMAB [Suspect]
     Active Substance: RITUXIMAB
     Route: 065
     Dates: start: 20210216
  214. RITUXIMAB [Suspect]
     Active Substance: RITUXIMAB
     Dates: start: 20210216
  215. RITUXIMAB [Suspect]
     Active Substance: RITUXIMAB
     Route: 065
     Dates: start: 20210216, end: 20210216
  216. RITUXIMAB [Suspect]
     Active Substance: RITUXIMAB
     Route: 065
     Dates: start: 20201221, end: 20201221
  217. RITUXIMAB [Suspect]
     Active Substance: RITUXIMAB
     Route: 065
     Dates: start: 20210216, end: 20210216
  218. RITUXIMAB [Suspect]
     Active Substance: RITUXIMAB
     Route: 065
     Dates: start: 20210216, end: 20210216
  219. RITUXIMAB [Suspect]
     Active Substance: RITUXIMAB
     Route: 065
     Dates: start: 20201221, end: 20201221
  220. RITUXIMAB [Suspect]
     Active Substance: RITUXIMAB
     Route: 042
     Dates: start: 20201126, end: 20201126
  221. RITUXIMAB [Suspect]
     Active Substance: RITUXIMAB
     Dates: start: 20210126
  222. RITUXIMAB [Suspect]
     Active Substance: RITUXIMAB
     Dosage: 600 MG, TIW
     Route: 042
     Dates: start: 20210105
  223. RITUXIMAB [Suspect]
     Active Substance: RITUXIMAB
     Dates: start: 20210105, end: 20210216
  224. RITUXIMAB [Suspect]
     Active Substance: RITUXIMAB
     Route: 065
  225. BENDAMUSTINE [Suspect]
     Active Substance: BENDAMUSTINE
     Indication: Prophylaxis
     Route: 065
  226. BENDAMUSTINE [Suspect]
     Active Substance: BENDAMUSTINE
     Route: 065
  227. BENDAMUSTINE [Suspect]
     Active Substance: BENDAMUSTINE
  228. BENDAMUSTINE [Suspect]
     Active Substance: BENDAMUSTINE
  229. BENDAMUSTINE [Suspect]
     Active Substance: BENDAMUSTINE
  230. BENDAMUSTINE [Suspect]
     Active Substance: BENDAMUSTINE
  231. BENDAMUSTINE [Suspect]
     Active Substance: BENDAMUSTINE
  232. BENDAMUSTINE [Suspect]
     Active Substance: BENDAMUSTINE
  233. BENDAMUSTINE [Suspect]
     Active Substance: BENDAMUSTINE
  234. BENDAMUSTINE [Suspect]
     Active Substance: BENDAMUSTINE
  235. BENDAMUSTINE [Suspect]
     Active Substance: BENDAMUSTINE
  236. BENDAMUSTINE [Suspect]
     Active Substance: BENDAMUSTINE
     Indication: Product used for unknown indication
  237. BENDAMUSTINE [Suspect]
     Active Substance: BENDAMUSTINE
  238. BENDAMUSTINE [Suspect]
     Active Substance: BENDAMUSTINE
  239. BENDAMUSTINE [Suspect]
     Active Substance: BENDAMUSTINE
  240. BENDAMUSTINE [Suspect]
     Active Substance: BENDAMUSTINE
  241. BENDAMUSTINE [Suspect]
     Active Substance: BENDAMUSTINE
     Indication: Prophylaxis
     Route: 050
  242. BENDAMUSTINE [Suspect]
     Active Substance: BENDAMUSTINE
     Route: 050
  243. BENDAMUSTINE [Suspect]
     Active Substance: BENDAMUSTINE
     Route: 065
  244. BENDAMUSTINE [Suspect]
     Active Substance: BENDAMUSTINE
     Route: 065
  245. BENDAMUSTINE [Suspect]
     Active Substance: BENDAMUSTINE
     Route: 065
  246. BENDAMUSTINE [Suspect]
     Active Substance: BENDAMUSTINE
     Route: 065
  247. BENDAMUSTINE [Suspect]
     Active Substance: BENDAMUSTINE
     Route: 065
  248. BENDAMUSTINE [Suspect]
     Active Substance: BENDAMUSTINE
     Route: 065
  249. BENDAMUSTINE [Suspect]
     Active Substance: BENDAMUSTINE
     Route: 065
  250. BENDAMUSTINE [Suspect]
     Active Substance: BENDAMUSTINE
     Route: 065
  251. BENDAMUSTINE [Suspect]
     Active Substance: BENDAMUSTINE
     Route: 065
  252. BENDAMUSTINE [Suspect]
     Active Substance: BENDAMUSTINE
     Route: 065
  253. BENDAMUSTINE [Suspect]
     Active Substance: BENDAMUSTINE
     Route: 065
  254. BENDAMUSTINE [Suspect]
     Active Substance: BENDAMUSTINE
     Route: 065
  255. BENDAMUSTINE [Suspect]
     Active Substance: BENDAMUSTINE
     Route: 065
  256. BENDAMUSTINE [Suspect]
     Active Substance: BENDAMUSTINE
     Route: 065
  257. BENDAMUSTINE [Suspect]
     Active Substance: BENDAMUSTINE
     Route: 065
  258. BENDAMUSTINE [Suspect]
     Active Substance: BENDAMUSTINE
     Route: 065
  259. BENDAMUSTINE [Suspect]
     Active Substance: BENDAMUSTINE
     Route: 065
  260. BENDAMUSTINE HYDROCHLORIDE [Suspect]
     Active Substance: BENDAMUSTINE HYDROCHLORIDE
     Indication: Prophylaxis
  261. BENDAMUSTINE HYDROCHLORIDE [Suspect]
     Active Substance: BENDAMUSTINE HYDROCHLORIDE
     Route: 065
  262. BENDAMUSTINE HYDROCHLORIDE [Suspect]
     Active Substance: BENDAMUSTINE HYDROCHLORIDE
     Route: 065
  263. BENDAMUSTINE HYDROCHLORIDE [Suspect]
     Active Substance: BENDAMUSTINE HYDROCHLORIDE
     Route: 065
  264. BENDAMUSTINE HYDROCHLORIDE [Suspect]
     Active Substance: BENDAMUSTINE HYDROCHLORIDE
     Route: 065
  265. BENDAMUSTINE HYDROCHLORIDE [Suspect]
     Active Substance: BENDAMUSTINE HYDROCHLORIDE
     Route: 065
  266. BENDAMUSTINE HYDROCHLORIDE [Suspect]
     Active Substance: BENDAMUSTINE HYDROCHLORIDE
     Route: 065
  267. BENDAMUSTINE HYDROCHLORIDE [Suspect]
     Active Substance: BENDAMUSTINE HYDROCHLORIDE
     Route: 065
  268. BENDAMUSTINE HYDROCHLORIDE [Suspect]
     Active Substance: BENDAMUSTINE HYDROCHLORIDE
     Route: 065
  269. BENDAMUSTINE HYDROCHLORIDE [Suspect]
     Active Substance: BENDAMUSTINE HYDROCHLORIDE
     Route: 065
  270. BENDAMUSTINE HYDROCHLORIDE [Suspect]
     Active Substance: BENDAMUSTINE HYDROCHLORIDE
     Route: 065
  271. DOXORUBICIN HYDROCHLORIDE [Suspect]
     Active Substance: DOXORUBICIN HYDROCHLORIDE
     Indication: Diffuse large B-cell lymphoma
     Dosage: 50 MILLIGRAM/SQ. METER, 3XW (50 MG/M2, TIW (DATE OF MOST RECENT DOSE PRIOR TO FIRST EPISODE OF NEUTR
     Route: 042
     Dates: start: 20201124
  272. DOXORUBICIN HYDROCHLORIDE [Suspect]
     Active Substance: DOXORUBICIN HYDROCHLORIDE
     Dates: start: 20201124
  273. DOXORUBICIN HYDROCHLORIDE [Suspect]
     Active Substance: DOXORUBICIN HYDROCHLORIDE
     Dates: start: 20201124
  274. DOXORUBICIN HYDROCHLORIDE [Suspect]
     Active Substance: DOXORUBICIN HYDROCHLORIDE
     Route: 065
     Dates: start: 20201124
  275. DOXORUBICIN HYDROCHLORIDE [Suspect]
     Active Substance: DOXORUBICIN HYDROCHLORIDE
     Dates: start: 20201124
  276. DOXORUBICIN HYDROCHLORIDE [Suspect]
     Active Substance: DOXORUBICIN HYDROCHLORIDE
     Route: 065
     Dates: start: 20201124
  277. DOXORUBICIN HYDROCHLORIDE [Suspect]
     Active Substance: DOXORUBICIN HYDROCHLORIDE
     Route: 065
     Dates: start: 20201124
  278. DOXORUBICIN HYDROCHLORIDE [Suspect]
     Active Substance: DOXORUBICIN HYDROCHLORIDE
     Route: 065
     Dates: start: 20201124
  279. DOXORUBICIN HYDROCHLORIDE [Suspect]
     Active Substance: DOXORUBICIN HYDROCHLORIDE
  280. DOXORUBICIN HYDROCHLORIDE [Suspect]
     Active Substance: DOXORUBICIN HYDROCHLORIDE
     Dates: start: 20201124
  281. DOXORUBICIN HYDROCHLORIDE [Suspect]
     Active Substance: DOXORUBICIN HYDROCHLORIDE
     Dates: start: 20201124
  282. DOXORUBICIN HYDROCHLORIDE [Suspect]
     Active Substance: DOXORUBICIN HYDROCHLORIDE
     Route: 065
     Dates: start: 20201124
  283. CYCLOPHOSPHAMIDE [Suspect]
     Active Substance: CYCLOPHOSPHAMIDE
     Indication: Diffuse large B-cell lymphoma
     Dosage: 3780 MG/M2 EVERY 3 WEEKS/TOTAL VOLUME PRIOR AE 313 ML/DATE OF MOST RECENT DOSE PRIOR TO FIRST EPISOD
     Route: 042
     Dates: start: 20201124
  284. CYCLOPHOSPHAMIDE [Suspect]
     Active Substance: CYCLOPHOSPHAMIDE
     Route: 042
  285. CYCLOPHOSPHAMIDE [Suspect]
     Active Substance: CYCLOPHOSPHAMIDE
     Route: 042
  286. CYCLOPHOSPHAMIDE [Suspect]
     Active Substance: CYCLOPHOSPHAMIDE
     Route: 042
  287. CYCLOPHOSPHAMIDE [Suspect]
     Active Substance: CYCLOPHOSPHAMIDE
     Route: 042
  288. CYCLOPHOSPHAMIDE [Suspect]
     Active Substance: CYCLOPHOSPHAMIDE
     Route: 050
  289. CYCLOPHOSPHAMIDE [Suspect]
     Active Substance: CYCLOPHOSPHAMIDE
     Route: 042
     Dates: start: 20201215, end: 20201215
  290. CYCLOPHOSPHAMIDE [Suspect]
     Active Substance: CYCLOPHOSPHAMIDE
     Route: 042
     Dates: start: 20210105, end: 20210105
  291. CYCLOPHOSPHAMIDE [Suspect]
     Active Substance: CYCLOPHOSPHAMIDE
     Route: 042
     Dates: start: 20210126, end: 20210126
  292. CYCLOPHOSPHAMIDE [Suspect]
     Active Substance: CYCLOPHOSPHAMIDE
     Route: 042
     Dates: start: 20210216
  293. CYCLOPHOSPHAMIDE [Suspect]
     Active Substance: CYCLOPHOSPHAMIDE
     Route: 042
     Dates: start: 20210309, end: 20210309
  294. CYCLOPHOSPHAMIDE [Suspect]
     Active Substance: CYCLOPHOSPHAMIDE
     Route: 065
  295. CYCLOPHOSPHAMIDE [Suspect]
     Active Substance: CYCLOPHOSPHAMIDE
     Route: 042
  296. CYCLOPHOSPHAMIDE [Suspect]
     Active Substance: CYCLOPHOSPHAMIDE
     Route: 042
  297. CYCLOPHOSPHAMIDE [Suspect]
     Active Substance: CYCLOPHOSPHAMIDE
     Route: 042
  298. CYCLOPHOSPHAMIDE [Suspect]
     Active Substance: CYCLOPHOSPHAMIDE
     Dosage: 3780 MG/M2 EVERY 3 WEEKS/TOTAL VOLUME PRIOR AE 313 ML/DATE OF MOST RECENT DOSE PRIOR TO FIRST EPISOD
     Route: 042
     Dates: start: 20201124
  299. CYCLOPHOSPHAMIDE [Suspect]
     Active Substance: CYCLOPHOSPHAMIDE
     Dosage: 3780 MG/M2 EVERY 3 WEEKS/TOTAL VOLUME PRIOR AE 313 ML/DATE OF MOST RECENT DOSE PRIOR TO FIRST EPISOD
     Route: 042
     Dates: start: 20201124
  300. CYCLOPHOSPHAMIDE [Suspect]
     Active Substance: CYCLOPHOSPHAMIDE
     Route: 042
     Dates: start: 20201124
  301. CYCLOPHOSPHAMIDE [Suspect]
     Active Substance: CYCLOPHOSPHAMIDE
     Route: 042
     Dates: start: 20201124
  302. CYCLOPHOSPHAMIDE [Suspect]
     Active Substance: CYCLOPHOSPHAMIDE
     Route: 042
     Dates: start: 20201124
  303. CYCLOPHOSPHAMIDE [Suspect]
     Active Substance: CYCLOPHOSPHAMIDE
     Route: 042
  304. CYCLOPHOSPHAMIDE [Suspect]
     Active Substance: CYCLOPHOSPHAMIDE
     Route: 042
  305. CYCLOPHOSPHAMIDE [Suspect]
     Active Substance: CYCLOPHOSPHAMIDE
     Route: 042
  306. CYCLOPHOSPHAMIDE [Suspect]
     Active Substance: CYCLOPHOSPHAMIDE
     Route: 042
  307. CYCLOPHOSPHAMIDE [Suspect]
     Active Substance: CYCLOPHOSPHAMIDE
     Route: 042
  308. CYCLOPHOSPHAMIDE [Suspect]
     Active Substance: CYCLOPHOSPHAMIDE
     Route: 042
  309. CYCLOPHOSPHAMIDE [Suspect]
     Active Substance: CYCLOPHOSPHAMIDE
     Route: 042
     Dates: start: 20201124
  310. CYCLOPHOSPHAMIDE [Suspect]
     Active Substance: CYCLOPHOSPHAMIDE
     Route: 042
     Dates: start: 20201124
  311. CYCLOPHOSPHAMIDE [Suspect]
     Active Substance: CYCLOPHOSPHAMIDE
     Route: 042
  312. CYCLOPHOSPHAMIDE [Suspect]
     Active Substance: CYCLOPHOSPHAMIDE
     Route: 065
     Dates: start: 20201124
  313. CYCLOPHOSPHAMIDE [Suspect]
     Active Substance: CYCLOPHOSPHAMIDE
     Route: 065
  314. CYCLOPHOSPHAMIDE [Suspect]
     Active Substance: CYCLOPHOSPHAMIDE
     Route: 065
  315. CYCLOPHOSPHAMIDE [Suspect]
     Active Substance: CYCLOPHOSPHAMIDE
     Route: 065
  316. CYCLOPHOSPHAMIDE [Suspect]
     Active Substance: CYCLOPHOSPHAMIDE
     Route: 042
  317. CYCLOPHOSPHAMIDE [Suspect]
     Active Substance: CYCLOPHOSPHAMIDE
     Route: 042
  318. CYCLOPHOSPHAMIDE [Suspect]
     Active Substance: CYCLOPHOSPHAMIDE
     Dosage: 1260 MILLIGRAM/SQ. METER, 3XW (TOTAL VOLUME PRIOR AE 313 MLDATE OF MOST RECENT DOSE PRIOR TO FIRST
     Route: 042
  319. CYCLOPHOSPHAMIDE [Suspect]
     Active Substance: CYCLOPHOSPHAMIDE
     Route: 042
     Dates: start: 20201124
  320. CYCLOPHOSPHAMIDE [Suspect]
     Active Substance: CYCLOPHOSPHAMIDE
     Route: 050
     Dates: start: 20201124
  321. CYCLOPHOSPHAMIDE [Suspect]
     Active Substance: CYCLOPHOSPHAMIDE
     Route: 065
  322. CYCLOPHOSPHAMIDE [Suspect]
     Active Substance: CYCLOPHOSPHAMIDE
  323. CYCLOPHOSPHAMIDE [Suspect]
     Active Substance: CYCLOPHOSPHAMIDE
     Dosage: 3780 MG/KG, 1/WEEK
     Dates: start: 20201124
  324. CYCLOPHOSPHAMIDE [Suspect]
     Active Substance: CYCLOPHOSPHAMIDE
     Route: 042
  325. CYCLOPHOSPHAMIDE [Suspect]
     Active Substance: CYCLOPHOSPHAMIDE
     Route: 042
  326. CYCLOPHOSPHAMIDE [Suspect]
     Active Substance: CYCLOPHOSPHAMIDE
     Route: 042
  327. CYCLOPHOSPHAMIDE [Suspect]
     Active Substance: CYCLOPHOSPHAMIDE
     Dosage: 1260 MILLIGRAM/SQ. METER, 3XW (TOTAL VOLUME PRIOR AE 313 MLDATE OF MOST RECENT DOSE PRIOR TO FIRST
     Route: 042
  328. CYCLOPHOSPHAMIDE [Suspect]
     Active Substance: CYCLOPHOSPHAMIDE
     Route: 042
     Dates: start: 20201124
  329. CYCLOPHOSPHAMIDE [Suspect]
     Active Substance: CYCLOPHOSPHAMIDE
  330. CYCLOPHOSPHAMIDE [Suspect]
     Active Substance: CYCLOPHOSPHAMIDE
  331. CYCLOPHOSPHAMIDE [Suspect]
     Active Substance: CYCLOPHOSPHAMIDE
     Route: 042
     Dates: start: 20201124
  332. CYCLOPHOSPHAMIDE [Suspect]
     Active Substance: CYCLOPHOSPHAMIDE
     Route: 065
  333. CYCLOPHOSPHAMIDE [Suspect]
     Active Substance: CYCLOPHOSPHAMIDE
     Indication: Diffuse large B-cell lymphoma
     Route: 042
     Dates: start: 20201124
  334. CYCLOPHOSPHAMIDE [Suspect]
     Active Substance: CYCLOPHOSPHAMIDE
     Route: 042
  335. CYCLOPHOSPHAMIDE [Suspect]
     Active Substance: CYCLOPHOSPHAMIDE
     Route: 042
  336. CYCLOPHOSPHAMIDE [Suspect]
     Active Substance: CYCLOPHOSPHAMIDE
     Route: 042
     Dates: start: 20201124
  337. CYCLOPHOSPHAMIDE [Suspect]
     Active Substance: CYCLOPHOSPHAMIDE
     Route: 042
     Dates: start: 20201124
  338. CYCLOPHOSPHAMIDE [Suspect]
     Active Substance: CYCLOPHOSPHAMIDE
     Route: 050
     Dates: start: 20201124
  339. CYCLOPHOSPHAMIDE [Suspect]
     Active Substance: CYCLOPHOSPHAMIDE
     Route: 042
  340. CYCLOPHOSPHAMIDE [Suspect]
     Active Substance: CYCLOPHOSPHAMIDE
     Route: 065
     Dates: start: 20201124
  341. CYCLOPHOSPHAMIDE [Suspect]
     Active Substance: CYCLOPHOSPHAMIDE
     Route: 042
  342. CYCLOPHOSPHAMIDE [Suspect]
     Active Substance: CYCLOPHOSPHAMIDE
     Route: 042
  343. CYCLOPHOSPHAMIDE [Suspect]
     Active Substance: CYCLOPHOSPHAMIDE
     Route: 065
  344. CYCLOPHOSPHAMIDE [Suspect]
     Active Substance: CYCLOPHOSPHAMIDE
     Route: 065
  345. CYCLOPHOSPHAMIDE [Suspect]
     Active Substance: CYCLOPHOSPHAMIDE
     Route: 065
  346. CYCLOPHOSPHAMIDE [Suspect]
     Active Substance: CYCLOPHOSPHAMIDE
     Route: 065
  347. CYCLOPHOSPHAMIDE [Suspect]
     Active Substance: CYCLOPHOSPHAMIDE
     Route: 065
  348. CYCLOPHOSPHAMIDE [Suspect]
     Active Substance: CYCLOPHOSPHAMIDE
     Route: 065
  349. CYCLOPHOSPHAMIDE [Suspect]
     Active Substance: CYCLOPHOSPHAMIDE
     Route: 042
     Dates: start: 20201124
  350. CYCLOPHOSPHAMIDE [Suspect]
     Active Substance: CYCLOPHOSPHAMIDE
     Route: 065
  351. CYCLOPHOSPHAMIDE [Suspect]
     Active Substance: CYCLOPHOSPHAMIDE
     Route: 065
  352. CYCLOPHOSPHAMIDE [Suspect]
     Active Substance: CYCLOPHOSPHAMIDE
     Route: 065
  353. CYCLOPHOSPHAMIDE [Suspect]
     Active Substance: CYCLOPHOSPHAMIDE
     Route: 065
  354. CYCLOPHOSPHAMIDE [Suspect]
     Active Substance: CYCLOPHOSPHAMIDE
     Route: 065
  355. CYCLOPHOSPHAMIDE [Suspect]
     Active Substance: CYCLOPHOSPHAMIDE
     Route: 065
  356. CYCLOPHOSPHAMIDE [Suspect]
     Active Substance: CYCLOPHOSPHAMIDE
     Route: 042
     Dates: start: 20201124
  357. CYCLOPHOSPHAMIDE [Suspect]
     Active Substance: CYCLOPHOSPHAMIDE
     Route: 042
     Dates: start: 20201124
  358. CYCLOPHOSPHAMIDE [Suspect]
     Active Substance: CYCLOPHOSPHAMIDE
     Route: 042
     Dates: start: 20201124
  359. CYCLOPHOSPHAMIDE [Suspect]
     Active Substance: CYCLOPHOSPHAMIDE
     Route: 042
  360. CYCLOPHOSPHAMIDE [Suspect]
     Active Substance: CYCLOPHOSPHAMIDE
     Route: 042
  361. CYCLOPHOSPHAMIDE [Suspect]
     Active Substance: CYCLOPHOSPHAMIDE
     Route: 042
  362. CYCLOPHOSPHAMIDE [Suspect]
     Active Substance: CYCLOPHOSPHAMIDE
     Indication: Diffuse large B-cell lymphoma
     Route: 042
     Dates: start: 20201124
  363. DOXORUBICIN [Suspect]
     Active Substance: DOXORUBICIN
     Indication: Diffuse large B-cell lymphoma
     Route: 042
     Dates: start: 20201124
  364. DOXORUBICIN [Suspect]
     Active Substance: DOXORUBICIN
     Route: 042
     Dates: start: 20201124
  365. DOXORUBICIN [Suspect]
     Active Substance: DOXORUBICIN
     Route: 042
  366. DOXORUBICIN [Suspect]
     Active Substance: DOXORUBICIN
  367. DOXORUBICIN [Suspect]
     Active Substance: DOXORUBICIN
     Route: 042
  368. DOXORUBICIN [Suspect]
     Active Substance: DOXORUBICIN
     Route: 042
     Dates: start: 20201215, end: 20201215
  369. DOXORUBICIN [Suspect]
     Active Substance: DOXORUBICIN
     Route: 042
     Dates: start: 20210105, end: 20210105
  370. DOXORUBICIN [Suspect]
     Active Substance: DOXORUBICIN
     Route: 042
     Dates: start: 20210126, end: 20210126
  371. DOXORUBICIN [Suspect]
     Active Substance: DOXORUBICIN
     Route: 042
     Dates: start: 20210216
  372. DOXORUBICIN [Suspect]
     Active Substance: DOXORUBICIN
     Route: 042
     Dates: start: 20210309, end: 20210309
  373. DOXORUBICIN [Suspect]
     Active Substance: DOXORUBICIN
     Route: 050
     Dates: start: 20201124
  374. DOXORUBICIN [Suspect]
     Active Substance: DOXORUBICIN
     Route: 050
  375. DOXORUBICIN [Suspect]
     Active Substance: DOXORUBICIN
     Route: 065
  376. DOXORUBICIN [Suspect]
     Active Substance: DOXORUBICIN
     Route: 042
  377. DOXORUBICIN [Suspect]
     Active Substance: DOXORUBICIN
     Route: 050
     Dates: start: 20201124
  378. DOXORUBICIN [Suspect]
     Active Substance: DOXORUBICIN
     Route: 050
     Dates: start: 20201124
  379. DOXORUBICIN [Suspect]
     Active Substance: DOXORUBICIN
     Route: 050
     Dates: start: 20201124
  380. DOXORUBICIN [Suspect]
     Active Substance: DOXORUBICIN
     Route: 042
  381. DOXORUBICIN [Suspect]
     Active Substance: DOXORUBICIN
     Route: 042
  382. DOXORUBICIN [Suspect]
     Active Substance: DOXORUBICIN
     Route: 050
     Dates: start: 20201124
  383. DOXORUBICIN [Suspect]
     Active Substance: DOXORUBICIN
     Dates: start: 20201124
  384. DOXORUBICIN [Suspect]
     Active Substance: DOXORUBICIN
     Route: 042
     Dates: start: 20201124
  385. DOXORUBICIN [Suspect]
     Active Substance: DOXORUBICIN
     Route: 042
     Dates: start: 20201124
  386. DOXORUBICIN [Suspect]
     Active Substance: DOXORUBICIN
     Route: 042
     Dates: start: 20201124
  387. DOXORUBICIN [Suspect]
     Active Substance: DOXORUBICIN
     Route: 042
  388. DOXORUBICIN [Suspect]
     Active Substance: DOXORUBICIN
     Route: 042
  389. DOXORUBICIN [Suspect]
     Active Substance: DOXORUBICIN
     Route: 042
  390. DOXORUBICIN [Suspect]
     Active Substance: DOXORUBICIN
     Route: 042
  391. DOXORUBICIN [Suspect]
     Active Substance: DOXORUBICIN
     Route: 042
  392. DOXORUBICIN [Suspect]
     Active Substance: DOXORUBICIN
     Route: 042
  393. DOXORUBICIN [Suspect]
     Active Substance: DOXORUBICIN
     Route: 042
  394. DOXORUBICIN [Suspect]
     Active Substance: DOXORUBICIN
     Route: 042
  395. DOXORUBICIN [Suspect]
     Active Substance: DOXORUBICIN
     Route: 042
  396. DOXORUBICIN [Suspect]
     Active Substance: DOXORUBICIN
     Dosage: 150 MG/M2, ONE A WEEK, 50 MG/M2, TIW (DATE OF MOST RECENT DOSE PRIOR TO FIRST EPISODE OF
     Route: 042
     Dates: start: 20201124
  397. DOXORUBICIN [Suspect]
     Active Substance: DOXORUBICIN
     Route: 065
     Dates: start: 20201124
  398. DOXORUBICIN [Suspect]
     Active Substance: DOXORUBICIN
     Route: 042
  399. DOXORUBICIN [Suspect]
     Active Substance: DOXORUBICIN
     Route: 042
  400. DOXORUBICIN [Suspect]
     Active Substance: DOXORUBICIN
     Indication: Diffuse large B-cell lymphoma
     Route: 065
     Dates: start: 20201124
  401. DOXORUBICIN [Suspect]
     Active Substance: DOXORUBICIN
     Route: 042
  402. DOXORUBICIN [Suspect]
     Active Substance: DOXORUBICIN
     Dosage: 80 MG/M2, 3/WEEK (DOSAGE TEXT: 150 MG/M2, ONE A WEEK, 50 MG/M2, TIW (DATE OF MOST RECENT DOSE PRIOR
     Route: 042
     Dates: start: 20201124
  403. DOXORUBICIN [Suspect]
     Active Substance: DOXORUBICIN
     Route: 042
     Dates: start: 20201124
  404. DOXORUBICIN [Suspect]
     Active Substance: DOXORUBICIN
  405. DOXORUBICIN [Suspect]
     Active Substance: DOXORUBICIN
     Dosage: 80 MILLIGRAM/SQ. METER (ON DAY 1 OF EACH 21-DAY CYCLEDATE OF MOST RECENT DOSE PRIOR TO FIRST
     Route: 042
     Dates: start: 20201124
  406. DOXORUBICIN [Suspect]
     Active Substance: DOXORUBICIN
     Dosage: 80 MILLIGRAM/SQ. METER (ON DAY 1 OF EACH 21-DAY CYCLEDATE OF MOST RECENT DOSE PRIOR TO FIRST
     Route: 042
     Dates: start: 20201124
  407. DOXORUBICIN [Suspect]
     Active Substance: DOXORUBICIN
     Route: 042
  408. DOXORUBICIN [Suspect]
     Active Substance: DOXORUBICIN
     Route: 042
  409. DOXORUBICIN [Suspect]
     Active Substance: DOXORUBICIN
     Route: 042
  410. DOXORUBICIN [Suspect]
     Active Substance: DOXORUBICIN
     Route: 042
  411. DOXORUBICIN [Suspect]
     Active Substance: DOXORUBICIN
     Route: 042
  412. DOXORUBICIN [Suspect]
     Active Substance: DOXORUBICIN
     Route: 042
  413. DOXORUBICIN [Suspect]
     Active Substance: DOXORUBICIN
     Route: 065
  414. DOXORUBICIN [Suspect]
     Active Substance: DOXORUBICIN
     Dosage: 80 MG/M2, 3/WEEK (DOSE TEXT: 150 MG/M2, ONE A WEEK, 50 MG/M2, TIW (DATE OF MOST RECENT DOSE PRIOR TO
     Dates: start: 20201124
  415. DOXORUBICIN [Suspect]
     Active Substance: DOXORUBICIN
     Route: 042
  416. DOXORUBICIN [Suspect]
     Active Substance: DOXORUBICIN
     Route: 042
  417. DOXORUBICIN [Suspect]
     Active Substance: DOXORUBICIN
     Route: 042
  418. DOXORUBICIN [Suspect]
     Active Substance: DOXORUBICIN
     Route: 042
  419. DOXORUBICIN [Suspect]
     Active Substance: DOXORUBICIN
     Route: 042
  420. DOXORUBICIN [Suspect]
     Active Substance: DOXORUBICIN
     Indication: Diffuse large B-cell lymphoma
     Route: 065
  421. DOXORUBICIN [Suspect]
     Active Substance: DOXORUBICIN
     Route: 050
     Dates: start: 20201124
  422. DOXORUBICIN [Suspect]
     Active Substance: DOXORUBICIN
     Route: 065
  423. DOXORUBICIN [Suspect]
     Active Substance: DOXORUBICIN
     Route: 050
     Dates: start: 20201124
  424. DOXORUBICIN [Suspect]
     Active Substance: DOXORUBICIN
     Route: 050
     Dates: start: 20201124
  425. DOXORUBICIN [Suspect]
     Active Substance: DOXORUBICIN
     Route: 065
  426. DOXORUBICIN [Suspect]
     Active Substance: DOXORUBICIN
  427. DOXORUBICIN [Suspect]
     Active Substance: DOXORUBICIN
  428. DOXORUBICIN [Suspect]
     Active Substance: DOXORUBICIN
  429. DOXORUBICIN [Suspect]
     Active Substance: DOXORUBICIN
     Indication: Diffuse large B-cell lymphoma
     Route: 042
     Dates: start: 20201124
  430. DOXORUBICIN [Suspect]
     Active Substance: DOXORUBICIN
     Route: 042
     Dates: start: 20201124
  431. DOXORUBICIN [Suspect]
     Active Substance: DOXORUBICIN
     Route: 042
  432. DOXORUBICIN [Suspect]
     Active Substance: DOXORUBICIN
     Route: 042
  433. DOXORUBICIN [Suspect]
     Active Substance: DOXORUBICIN
     Route: 042
  434. DOXORUBICIN [Suspect]
     Active Substance: DOXORUBICIN
     Route: 042
     Dates: start: 20201124
  435. DOXORUBICIN [Suspect]
     Active Substance: DOXORUBICIN
     Route: 042
  436. DOXORUBICIN [Suspect]
     Active Substance: DOXORUBICIN
     Route: 065
     Dates: start: 20201124
  437. DOXORUBICIN [Suspect]
     Active Substance: DOXORUBICIN
     Route: 042
  438. DOXORUBICIN [Suspect]
     Active Substance: DOXORUBICIN
     Route: 042
  439. DOXORUBICIN [Suspect]
     Active Substance: DOXORUBICIN
     Route: 042
  440. DOXORUBICIN [Suspect]
     Active Substance: DOXORUBICIN
     Route: 042
     Dates: start: 20201124
  441. DOXORUBICIN [Suspect]
     Active Substance: DOXORUBICIN
     Route: 042
  442. DOXORUBICIN [Suspect]
     Active Substance: DOXORUBICIN
     Route: 042
  443. DOXORUBICIN [Suspect]
     Active Substance: DOXORUBICIN
     Route: 042
  444. DOXORUBICIN [Suspect]
     Active Substance: DOXORUBICIN
  445. DOXORUBICIN [Suspect]
     Active Substance: DOXORUBICIN
     Route: 042
  446. DOXORUBICIN [Suspect]
     Active Substance: DOXORUBICIN
     Route: 042
  447. DOXORUBICIN [Suspect]
     Active Substance: DOXORUBICIN
     Route: 042
  448. DOXORUBICIN [Suspect]
     Active Substance: DOXORUBICIN
     Route: 042
     Dates: start: 20201124
  449. DOXORUBICIN [Suspect]
     Active Substance: DOXORUBICIN
     Route: 042
  450. DOXORUBICIN [Suspect]
     Active Substance: DOXORUBICIN
     Route: 042
     Dates: start: 20201124
  451. DOXORUBICIN [Suspect]
     Active Substance: DOXORUBICIN
     Route: 042
  452. DOXORUBICIN [Suspect]
     Active Substance: DOXORUBICIN
     Route: 042
  453. DOXORUBICIN [Suspect]
     Active Substance: DOXORUBICIN
     Route: 042
  454. DOXORUBICIN [Suspect]
     Active Substance: DOXORUBICIN
     Route: 042
  455. DOXORUBICIN [Suspect]
     Active Substance: DOXORUBICIN
     Route: 042
  456. DOXORUBICIN [Suspect]
     Active Substance: DOXORUBICIN
     Route: 042
     Dates: start: 20201124
  457. DOXORUBICIN [Suspect]
     Active Substance: DOXORUBICIN
     Route: 042
  458. DOXORUBICIN [Suspect]
     Active Substance: DOXORUBICIN
     Route: 042
  459. DOXORUBICIN [Suspect]
     Active Substance: DOXORUBICIN
     Route: 065
  460. DOXORUBICIN [Suspect]
     Active Substance: DOXORUBICIN
     Route: 042
     Dates: start: 20201124
  461. DOXORUBICIN [Suspect]
     Active Substance: DOXORUBICIN
     Route: 065
  462. DOXORUBICIN [Suspect]
     Active Substance: DOXORUBICIN
     Route: 065
  463. DOXORUBICIN HYDROCHLORIDE [Suspect]
     Active Substance: DOXORUBICIN HYDROCHLORIDE
     Indication: Diffuse large B-cell lymphoma
     Route: 042
  464. DOXORUBICIN HYDROCHLORIDE [Suspect]
     Active Substance: DOXORUBICIN HYDROCHLORIDE
     Route: 042
  465. DOXORUBICIN HYDROCHLORIDE [Suspect]
     Active Substance: DOXORUBICIN HYDROCHLORIDE
     Route: 042
  466. DOXORUBICIN HYDROCHLORIDE [Suspect]
     Active Substance: DOXORUBICIN HYDROCHLORIDE
     Route: 042
  467. DOXORUBICIN HYDROCHLORIDE [Suspect]
     Active Substance: DOXORUBICIN HYDROCHLORIDE
     Route: 042
  468. DOXORUBICIN HYDROCHLORIDE [Suspect]
     Active Substance: DOXORUBICIN HYDROCHLORIDE
     Route: 042
  469. DOXORUBICIN HYDROCHLORIDE [Suspect]
     Active Substance: DOXORUBICIN HYDROCHLORIDE
     Route: 042
  470. DOXORUBICIN HYDROCHLORIDE [Suspect]
     Active Substance: DOXORUBICIN HYDROCHLORIDE
     Route: 042
  471. DOXORUBICIN HYDROCHLORIDE [Suspect]
     Active Substance: DOXORUBICIN HYDROCHLORIDE
     Route: 042
  472. DOXORUBICIN HYDROCHLORIDE [Suspect]
     Active Substance: DOXORUBICIN HYDROCHLORIDE
     Route: 042
  473. DOXORUBICIN HYDROCHLORIDE [Suspect]
     Active Substance: DOXORUBICIN HYDROCHLORIDE
     Route: 042
  474. DOXORUBICIN HYDROCHLORIDE [Suspect]
     Active Substance: DOXORUBICIN HYDROCHLORIDE
     Route: 042
  475. DOXORUBICIN HYDROCHLORIDE [Suspect]
     Active Substance: DOXORUBICIN HYDROCHLORIDE
     Route: 042
  476. DOXORUBICIN HYDROCHLORIDE [Suspect]
     Active Substance: DOXORUBICIN HYDROCHLORIDE
     Route: 042
     Dates: start: 20201124
  477. DOXORUBICIN HYDROCHLORIDE [Suspect]
     Active Substance: DOXORUBICIN HYDROCHLORIDE
     Route: 042
  478. DOXORUBICIN HYDROCHLORIDE [Suspect]
     Active Substance: DOXORUBICIN HYDROCHLORIDE
     Route: 042
  479. DOXORUBICIN HYDROCHLORIDE [Suspect]
     Active Substance: DOXORUBICIN HYDROCHLORIDE
     Route: 042
  480. DOXORUBICIN HYDROCHLORIDE [Suspect]
     Active Substance: DOXORUBICIN HYDROCHLORIDE
     Route: 042
  481. DOXORUBICIN HYDROCHLORIDE [Suspect]
     Active Substance: DOXORUBICIN HYDROCHLORIDE
     Route: 042
  482. DOXORUBICIN HYDROCHLORIDE [Suspect]
     Active Substance: DOXORUBICIN HYDROCHLORIDE
     Route: 042
     Dates: start: 20201124
  483. DOXORUBICIN HYDROCHLORIDE [Suspect]
     Active Substance: DOXORUBICIN HYDROCHLORIDE
     Route: 042
  484. DOXORUBICIN HYDROCHLORIDE [Suspect]
     Active Substance: DOXORUBICIN HYDROCHLORIDE
     Route: 042
  485. DOXORUBICIN HYDROCHLORIDE [Suspect]
     Active Substance: DOXORUBICIN HYDROCHLORIDE
     Route: 042
  486. DOXORUBICIN HYDROCHLORIDE [Suspect]
     Active Substance: DOXORUBICIN HYDROCHLORIDE
     Route: 042
  487. DOXORUBICIN HYDROCHLORIDE [Suspect]
     Active Substance: DOXORUBICIN HYDROCHLORIDE
     Route: 042
  488. DOXORUBICIN HYDROCHLORIDE [Suspect]
     Active Substance: DOXORUBICIN HYDROCHLORIDE
     Route: 042
     Dates: start: 20201124
  489. DOXORUBICIN HYDROCHLORIDE [Suspect]
     Active Substance: DOXORUBICIN HYDROCHLORIDE
     Route: 042
  490. DOXORUBICIN HYDROCHLORIDE [Suspect]
     Active Substance: DOXORUBICIN HYDROCHLORIDE
     Route: 042
  491. DOXORUBICIN HYDROCHLORIDE [Suspect]
     Active Substance: DOXORUBICIN HYDROCHLORIDE
     Route: 042
  492. DOXORUBICIN HYDROCHLORIDE [Suspect]
     Active Substance: DOXORUBICIN HYDROCHLORIDE
     Route: 042
     Dates: start: 20201124
  493. DOXORUBICIN HYDROCHLORIDE [Suspect]
     Active Substance: DOXORUBICIN HYDROCHLORIDE
     Route: 042
  494. DOXORUBICIN HYDROCHLORIDE [Suspect]
     Active Substance: DOXORUBICIN HYDROCHLORIDE
     Route: 042
  495. DOXORUBICIN HYDROCHLORIDE [Suspect]
     Active Substance: DOXORUBICIN HYDROCHLORIDE
     Route: 042
  496. DOXORUBICIN HYDROCHLORIDE [Suspect]
     Active Substance: DOXORUBICIN HYDROCHLORIDE
     Route: 042
  497. DOXORUBICIN HYDROCHLORIDE [Suspect]
     Active Substance: DOXORUBICIN HYDROCHLORIDE
     Route: 042
  498. DOXORUBICIN HYDROCHLORIDE [Suspect]
     Active Substance: DOXORUBICIN HYDROCHLORIDE
     Route: 042
     Dates: start: 20201124
  499. DOXORUBICIN HYDROCHLORIDE [Suspect]
     Active Substance: DOXORUBICIN HYDROCHLORIDE
     Route: 042
     Dates: start: 20201124
  500. GLOFITAMAB [Suspect]
     Active Substance: GLOFITAMAB
     Indication: Diffuse large B-cell lymphoma
     Route: 065
     Dates: start: 20201222
  501. GLOFITAMAB [Suspect]
     Active Substance: GLOFITAMAB
     Route: 065
     Dates: start: 20201222
  502. GLOFITAMAB [Suspect]
     Active Substance: GLOFITAMAB
     Route: 065
     Dates: start: 20201222
  503. GLOFITAMAB [Suspect]
     Active Substance: GLOFITAMAB
     Dosage: 2.5 MG EVERY 3 WEEKS
     Route: 042
  504. GLOFITAMAB [Suspect]
     Active Substance: GLOFITAMAB
     Route: 042
  505. GLOFITAMAB [Suspect]
     Active Substance: GLOFITAMAB
     Route: 042
  506. GLOFITAMAB [Suspect]
     Active Substance: GLOFITAMAB
     Route: 065
  507. GLOFITAMAB [Suspect]
     Active Substance: GLOFITAMAB
     Dates: start: 20201230, end: 20201230
  508. GLOFITAMAB [Suspect]
     Active Substance: GLOFITAMAB
     Dates: start: 20210119, end: 20210119
  509. GLOFITAMAB [Suspect]
     Active Substance: GLOFITAMAB
     Dates: start: 20210209, end: 20210209
  510. GLOFITAMAB [Suspect]
     Active Substance: GLOFITAMAB
     Dates: start: 20210302, end: 20210302
  511. GLOFITAMAB [Suspect]
     Active Substance: GLOFITAMAB
     Route: 042
     Dates: start: 20210309
  512. GLOFITAMAB [Suspect]
     Active Substance: GLOFITAMAB
     Route: 042
     Dates: start: 20210323, end: 20210323
  513. GLOFITAMAB [Suspect]
     Active Substance: GLOFITAMAB
     Route: 065
  514. GLOFITAMAB [Suspect]
     Active Substance: GLOFITAMAB
     Route: 065
  515. GLOFITAMAB [Suspect]
     Active Substance: GLOFITAMAB
     Route: 050
     Dates: start: 20201222
  516. GLOFITAMAB [Suspect]
     Active Substance: GLOFITAMAB
     Route: 050
     Dates: start: 20201222
  517. GLOFITAMAB [Suspect]
     Active Substance: GLOFITAMAB
     Route: 050
     Dates: start: 20201222
  518. GLOFITAMAB [Suspect]
     Active Substance: GLOFITAMAB
     Route: 065
  519. GLOFITAMAB [Suspect]
     Active Substance: GLOFITAMAB
     Route: 065
  520. GLOFITAMAB [Suspect]
     Active Substance: GLOFITAMAB
     Route: 042
  521. GLOFITAMAB [Suspect]
     Active Substance: GLOFITAMAB
     Dates: start: 20201222
  522. GLOFITAMAB [Suspect]
     Active Substance: GLOFITAMAB
     Route: 042
  523. GLOFITAMAB [Suspect]
     Active Substance: GLOFITAMAB
     Route: 050
  524. GLOFITAMAB [Suspect]
     Active Substance: GLOFITAMAB
     Route: 042
  525. GLOFITAMAB [Suspect]
     Active Substance: GLOFITAMAB
     Route: 042
  526. GLOFITAMAB [Suspect]
     Active Substance: GLOFITAMAB
     Route: 050
  527. GLOFITAMAB [Suspect]
     Active Substance: GLOFITAMAB
     Route: 050
  528. GLOFITAMAB [Suspect]
     Active Substance: GLOFITAMAB
     Route: 042
  529. GLOFITAMAB [Suspect]
     Active Substance: GLOFITAMAB
     Dosage: 2.5 MILLIGRAM, Q3W (THE MOST RECENT DOSE OF RO7082859 (10 MG) WAS ADMINISTERED ON 30/DEC/2020
     Route: 042
     Dates: start: 20201222
  530. GLOFITAMAB [Suspect]
     Active Substance: GLOFITAMAB
  531. GLOFITAMAB [Suspect]
     Active Substance: GLOFITAMAB
     Route: 042
  532. GLOFITAMAB [Suspect]
     Active Substance: GLOFITAMAB
  533. GLOFITAMAB [Suspect]
     Active Substance: GLOFITAMAB
     Route: 042
  534. GLOFITAMAB [Suspect]
     Active Substance: GLOFITAMAB
     Route: 042
     Dates: start: 20201222
  535. GLOFITAMAB [Suspect]
     Active Substance: GLOFITAMAB
  536. GLOFITAMAB [Suspect]
     Active Substance: GLOFITAMAB
     Route: 042
  537. GLOFITAMAB [Suspect]
     Active Substance: GLOFITAMAB
     Route: 042
  538. GLOFITAMAB [Suspect]
     Active Substance: GLOFITAMAB
  539. GLOFITAMAB [Suspect]
     Active Substance: GLOFITAMAB
  540. GLOFITAMAB [Suspect]
     Active Substance: GLOFITAMAB
  541. GLOFITAMAB [Suspect]
     Active Substance: GLOFITAMAB
  542. GLOFITAMAB [Suspect]
     Active Substance: GLOFITAMAB
  543. GLOFITAMAB [Suspect]
     Active Substance: GLOFITAMAB
  544. GLOFITAMAB [Suspect]
     Active Substance: GLOFITAMAB
     Dosage: 2.5 MG/M2, 3/WEEK
     Route: 042
  545. GLOFITAMAB [Suspect]
     Active Substance: GLOFITAMAB
     Dosage: 2.5 MG/M2, 3/WEEK
  546. GLOFITAMAB [Suspect]
     Active Substance: GLOFITAMAB
     Dosage: 2.5 MG/M2, 2/WEEK
  547. GLOFITAMAB [Suspect]
     Active Substance: GLOFITAMAB
  548. GLOFITAMAB [Suspect]
     Active Substance: GLOFITAMAB
  549. GLOFITAMAB [Suspect]
     Active Substance: GLOFITAMAB
     Indication: Diffuse large B-cell lymphoma
     Route: 050
     Dates: start: 20201222
  550. GLOFITAMAB [Suspect]
     Active Substance: GLOFITAMAB
     Route: 050
  551. GLOFITAMAB [Suspect]
     Active Substance: GLOFITAMAB
     Route: 065
     Dates: start: 20201222
  552. GLOFITAMAB [Suspect]
     Active Substance: GLOFITAMAB
     Route: 042
  553. GLOFITAMAB [Suspect]
     Active Substance: GLOFITAMAB
     Route: 042
  554. GLOFITAMAB [Suspect]
     Active Substance: GLOFITAMAB
     Route: 065
     Dates: start: 20201222
  555. GLOFITAMAB [Suspect]
     Active Substance: GLOFITAMAB
     Route: 042
  556. GLOFITAMAB [Suspect]
     Active Substance: GLOFITAMAB
     Route: 042
  557. GLOFITAMAB [Suspect]
     Active Substance: GLOFITAMAB
     Dosage: 2.5 MG (MG) 2 WK, 2.5 MILLIGRAM, Q3W (THE MOST RECENT DOSE OF RO7082859 (10 MG) WAS ADMINISTERED ON
     Route: 042
     Dates: start: 20201222
  558. GLOFITAMAB [Suspect]
     Active Substance: GLOFITAMAB
     Route: 042
  559. GLOFITAMAB [Suspect]
     Active Substance: GLOFITAMAB
     Route: 065
  560. GLOFITAMAB [Suspect]
     Active Substance: GLOFITAMAB
     Route: 065
  561. GLOFITAMAB [Suspect]
     Active Substance: GLOFITAMAB
     Route: 042
  562. GLOFITAMAB [Suspect]
     Active Substance: GLOFITAMAB
     Route: 065
  563. GLOFITAMAB [Suspect]
     Active Substance: GLOFITAMAB
     Route: 065
     Dates: start: 20201222
  564. GLOFITAMAB [Suspect]
     Active Substance: GLOFITAMAB
     Route: 065
  565. GLOFITAMAB [Suspect]
     Active Substance: GLOFITAMAB
     Route: 065
     Dates: start: 20201222
  566. GLOFITAMAB [Suspect]
     Active Substance: GLOFITAMAB
     Route: 065
  567. GLOFITAMAB [Suspect]
     Active Substance: GLOFITAMAB
     Route: 065
     Dates: start: 20201222
  568. GLOFITAMAB [Suspect]
     Active Substance: GLOFITAMAB
     Route: 065
  569. GLOFITAMAB [Suspect]
     Active Substance: GLOFITAMAB
     Route: 065
  570. GLOFITAMAB [Suspect]
     Active Substance: GLOFITAMAB
     Route: 065
  571. GLOFITAMAB [Suspect]
     Active Substance: GLOFITAMAB
     Route: 042
  572. GLOFITAMAB [Suspect]
     Active Substance: GLOFITAMAB
     Route: 065
  573. GLOFITAMAB [Suspect]
     Active Substance: GLOFITAMAB
     Route: 065
     Dates: start: 20201222
  574. GLOFITAMAB [Suspect]
     Active Substance: GLOFITAMAB
     Route: 042
  575. GLOFITAMAB [Suspect]
     Active Substance: GLOFITAMAB
     Route: 065
  576. GLOFITAMAB [Suspect]
     Active Substance: GLOFITAMAB
     Route: 065
  577. GLOFITAMAB [Suspect]
     Active Substance: GLOFITAMAB
     Route: 065
  578. GLOFITAMAB [Suspect]
     Active Substance: GLOFITAMAB
     Route: 065
  579. GLOFITAMAB [Suspect]
     Active Substance: GLOFITAMAB
     Route: 065
  580. GLOFITAMAB [Suspect]
     Active Substance: GLOFITAMAB
     Route: 065
  581. GLOFITAMAB [Suspect]
     Active Substance: GLOFITAMAB
     Route: 065
  582. GLOFITAMAB [Suspect]
     Active Substance: GLOFITAMAB
     Route: 065
  583. GLOFITAMAB [Suspect]
     Active Substance: GLOFITAMAB
     Route: 065
  584. GLOFITAMAB [Suspect]
     Active Substance: GLOFITAMAB
     Route: 065
  585. GLOFITAMAB [Suspect]
     Active Substance: GLOFITAMAB
     Route: 065
  586. GLOFITAMAB [Suspect]
     Active Substance: GLOFITAMAB
     Route: 042
  587. GLOFITAMAB [Suspect]
     Active Substance: GLOFITAMAB
     Dosage: 2.5 MG, 3 TIMES A WEEK
     Route: 065
  588. GLOFITAMAB [Suspect]
     Active Substance: GLOFITAMAB
     Route: 065
  589. GLOFITAMAB [Suspect]
     Active Substance: GLOFITAMAB
     Route: 065
  590. GLOFITAMAB [Suspect]
     Active Substance: GLOFITAMAB
     Route: 065
  591. GLOFITAMAB [Suspect]
     Active Substance: GLOFITAMAB
     Route: 065
  592. GLOFITAMAB [Suspect]
     Active Substance: GLOFITAMAB
     Route: 065
  593. GLOFITAMAB [Suspect]
     Active Substance: GLOFITAMAB
     Route: 065
  594. GLOFITAMAB [Suspect]
     Active Substance: GLOFITAMAB
     Route: 065
  595. GLOFITAMAB [Suspect]
     Active Substance: GLOFITAMAB
     Route: 065
  596. GLOFITAMAB [Suspect]
     Active Substance: GLOFITAMAB
     Route: 065
  597. GLOFITAMAB [Suspect]
     Active Substance: GLOFITAMAB
     Route: 065
  598. GLOFITAMAB [Suspect]
     Active Substance: GLOFITAMAB
     Route: 065
  599. GLOFITAMAB [Suspect]
     Active Substance: GLOFITAMAB
     Indication: Diffuse large B-cell lymphoma
     Route: 065
  600. GLOFITAMAB [Suspect]
     Active Substance: GLOFITAMAB
  601. GLOFITAMAB [Suspect]
     Active Substance: GLOFITAMAB
     Dosage: 2.5 MG/M2, Q2WEEKS
  602. GLOFITAMAB [Suspect]
     Active Substance: GLOFITAMAB
     Route: 065
     Dates: start: 20201222
  603. GLOFITAMAB [Suspect]
     Active Substance: GLOFITAMAB
  604. GLOFITAMAB [Suspect]
     Active Substance: GLOFITAMAB
  605. GLOFITAMAB [Suspect]
     Active Substance: GLOFITAMAB
  606. GLOFITAMAB [Suspect]
     Active Substance: GLOFITAMAB
  607. GLOFITAMAB [Suspect]
     Active Substance: GLOFITAMAB
     Route: 042
  608. GLOFITAMAB [Suspect]
     Active Substance: GLOFITAMAB
     Dates: start: 20201222
  609. GLOFITAMAB [Suspect]
     Active Substance: GLOFITAMAB
     Dates: start: 20201222
  610. GLOFITAMAB [Suspect]
     Active Substance: GLOFITAMAB
     Dates: start: 20201222
  611. GLOFITAMAB [Suspect]
     Active Substance: GLOFITAMAB
     Dosage: 2.5 MG EVERY 3 WEEKS
  612. GLOFITAMAB [Suspect]
     Active Substance: GLOFITAMAB
     Dates: start: 20201222
  613. GLOFITAMAB [Suspect]
     Active Substance: GLOFITAMAB
     Dates: start: 20201222
  614. GLOFITAMAB [Suspect]
     Active Substance: GLOFITAMAB
  615. GLOFITAMAB [Suspect]
     Active Substance: GLOFITAMAB
     Dates: start: 20201230, end: 20201230
  616. GLOFITAMAB [Suspect]
     Active Substance: GLOFITAMAB
     Dates: start: 20210119, end: 20210119
  617. GLOFITAMAB [Suspect]
     Active Substance: GLOFITAMAB
     Dates: start: 20210209, end: 20210209
  618. GLOFITAMAB [Suspect]
     Active Substance: GLOFITAMAB
     Dates: start: 20210302, end: 20210302
  619. GLOFITAMAB [Suspect]
     Active Substance: GLOFITAMAB
     Dates: start: 20210309
  620. GLOFITAMAB [Suspect]
     Active Substance: GLOFITAMAB
     Dates: start: 20210323, end: 20210323
  621. GLOFITAMAB [Suspect]
     Active Substance: GLOFITAMAB
  622. GLOFITAMAB [Suspect]
     Active Substance: GLOFITAMAB
  623. GLOFITAMAB [Suspect]
     Active Substance: GLOFITAMAB
     Dates: start: 20201222
  624. GLOFITAMAB [Suspect]
     Active Substance: GLOFITAMAB
     Dosage: 2.5 MILLIGRAM, Q3W (THE MOST RECENT DOSE OF RO7082859 (10 MG) WAS ADMINISTERED ON 30/DEC/2020
     Dates: start: 20201222
  625. GLOFITAMAB [Suspect]
     Active Substance: GLOFITAMAB
  626. GLOFITAMAB [Suspect]
     Active Substance: GLOFITAMAB
  627. GLOFITAMAB [Suspect]
     Active Substance: GLOFITAMAB
  628. GLOFITAMAB [Suspect]
     Active Substance: GLOFITAMAB
     Dates: start: 20201222
  629. GLOFITAMAB [Suspect]
     Active Substance: GLOFITAMAB
     Dosage: 2.5 MG/M2, Q2WEEKS
  630. GLOFITAMAB [Suspect]
     Active Substance: GLOFITAMAB
  631. GLOFITAMAB [Suspect]
     Active Substance: GLOFITAMAB
     Route: 065
  632. GLOFITAMAB [Suspect]
     Active Substance: GLOFITAMAB
     Dosage: 2.5 MG/M2, 3/WEEK
  633. GLOFITAMAB [Suspect]
     Active Substance: GLOFITAMAB
     Dosage: 2.5 MG/M2, 2/WEEK
  634. GLOFITAMAB [Suspect]
     Active Substance: GLOFITAMAB
     Route: 065
  635. GLOFITAMAB [Suspect]
     Active Substance: GLOFITAMAB
  636. VALGANCICLOVIR [Suspect]
     Active Substance: VALGANCICLOVIR
     Indication: Cytomegalovirus viraemia
     Route: 065
     Dates: start: 20210426, end: 20210513
  637. VALGANCICLOVIR [Suspect]
     Active Substance: VALGANCICLOVIR
     Route: 065
     Dates: start: 20210426, end: 20210513
  638. VALGANCICLOVIR [Suspect]
     Active Substance: VALGANCICLOVIR
     Dates: start: 20210426, end: 20210513
  639. VALGANCICLOVIR [Suspect]
     Active Substance: VALGANCICLOVIR
     Dates: start: 20210426, end: 20210513
  640. VALGANCICLOVIR [Suspect]
     Active Substance: VALGANCICLOVIR
     Dates: start: 20210426, end: 20210513
  641. VALGANCICLOVIR [Suspect]
     Active Substance: VALGANCICLOVIR
     Route: 065
     Dates: start: 20210426, end: 20210513
  642. VALGANCICLOVIR [Suspect]
     Active Substance: VALGANCICLOVIR
     Dates: end: 20210513
  643. VALGANCICLOVIR [Suspect]
     Active Substance: VALGANCICLOVIR
     Dates: start: 20210513
  644. VALGANCICLOVIR [Suspect]
     Active Substance: VALGANCICLOVIR
     Dates: start: 20210513
  645. VALGANCICLOVIR [Suspect]
     Active Substance: VALGANCICLOVIR
     Indication: Product used for unknown indication
     Dates: end: 20210518
  646. VALGANCICLOVIR [Suspect]
     Active Substance: VALGANCICLOVIR
     Dates: end: 20210518
  647. VALGANCICLOVIR [Suspect]
     Active Substance: VALGANCICLOVIR
     Route: 065
     Dates: start: 20210426, end: 20210513
  648. VALGANCICLOVIR [Suspect]
     Active Substance: VALGANCICLOVIR
     Indication: Cytomegalovirus viraemia
     Route: 050
     Dates: start: 20210426, end: 20210513
  649. VALGANCICLOVIR [Suspect]
     Active Substance: VALGANCICLOVIR
     Route: 065
     Dates: start: 20210426, end: 20210513
  650. VALGANCICLOVIR [Suspect]
     Active Substance: VALGANCICLOVIR
     Route: 065
     Dates: start: 20210513
  651. VALGANCICLOVIR [Suspect]
     Active Substance: VALGANCICLOVIR
     Route: 065
     Dates: start: 20210513
  652. VALGANCICLOVIR [Suspect]
     Active Substance: VALGANCICLOVIR
     Route: 065
     Dates: start: 20210513
  653. VALGANCICLOVIR [Suspect]
     Active Substance: VALGANCICLOVIR
     Route: 065
     Dates: start: 20210426, end: 20210513
  654. VALGANCICLOVIR [Suspect]
     Active Substance: VALGANCICLOVIR
     Dates: end: 20210518
  655. VALGANCICLOVIR [Suspect]
     Active Substance: VALGANCICLOVIR
     Dates: start: 20210426, end: 20210513
  656. VALGANCICLOVIR [Suspect]
     Active Substance: VALGANCICLOVIR
     Dates: start: 20210426, end: 20210513
  657. VALGANCICLOVIR [Suspect]
     Active Substance: VALGANCICLOVIR
     Dates: start: 20210426, end: 20210513
  658. VALGANCICLOVIR [Suspect]
     Active Substance: VALGANCICLOVIR
     Dates: end: 20210518
  659. VALGANCICLOVIR [Suspect]
     Active Substance: VALGANCICLOVIR
     Dates: start: 20210426, end: 20210513
  660. VALGANCICLOVIR [Suspect]
     Active Substance: VALGANCICLOVIR
     Dates: start: 20210426, end: 20210513
  661. VALGANCICLOVIR [Suspect]
     Active Substance: VALGANCICLOVIR
     Route: 065
     Dates: end: 20210513
  662. VALGANCICLOVIR [Suspect]
     Active Substance: VALGANCICLOVIR
     Route: 065
     Dates: start: 20210518
  663. VALGANCICLOVIR [Suspect]
     Active Substance: VALGANCICLOVIR
     Route: 065
     Dates: start: 20210426, end: 20210513
  664. VALGANCICLOVIR [Suspect]
     Active Substance: VALGANCICLOVIR
     Route: 065
     Dates: start: 20210426, end: 20210513
  665. VALGANCICLOVIR [Suspect]
     Active Substance: VALGANCICLOVIR
     Route: 065
     Dates: start: 20210426, end: 20210513
  666. VALGANCICLOVIR [Suspect]
     Active Substance: VALGANCICLOVIR
     Route: 065
     Dates: end: 20210513
  667. VALGANCICLOVIR [Suspect]
     Active Substance: VALGANCICLOVIR
     Route: 065
     Dates: end: 20210513
  668. VALGANCICLOVIR [Suspect]
     Active Substance: VALGANCICLOVIR
     Route: 065
     Dates: start: 20210426, end: 20210513
  669. VALGANCICLOVIR [Suspect]
     Active Substance: VALGANCICLOVIR
     Route: 065
     Dates: end: 20210513
  670. VALGANCICLOVIR [Suspect]
     Active Substance: VALGANCICLOVIR
     Route: 065
     Dates: end: 20210513
  671. VALGANCICLOVIR [Suspect]
     Active Substance: VALGANCICLOVIR
     Route: 065
     Dates: start: 20210518
  672. VALGANCICLOVIR [Suspect]
     Active Substance: VALGANCICLOVIR
     Route: 065
     Dates: start: 20210426, end: 20210513
  673. VALGANCICLOVIR [Suspect]
     Active Substance: VALGANCICLOVIR
     Route: 065
     Dates: start: 20210426, end: 20210513
  674. VINCRISTINE [Suspect]
     Active Substance: VINCRISTINE
     Indication: Diffuse large B-cell lymphoma
     Route: 042
     Dates: start: 20201124
  675. VINCRISTINE [Suspect]
     Active Substance: VINCRISTINE
     Route: 065
  676. VINCRISTINE [Suspect]
     Active Substance: VINCRISTINE
     Route: 065
  677. VINCRISTINE [Suspect]
     Active Substance: VINCRISTINE
     Route: 042
  678. VINCRISTINE [Suspect]
     Active Substance: VINCRISTINE
     Route: 065
  679. VINCRISTINE [Suspect]
     Active Substance: VINCRISTINE
     Route: 042
     Dates: start: 20201215, end: 20201215
  680. VINCRISTINE [Suspect]
     Active Substance: VINCRISTINE
     Route: 042
     Dates: start: 20210105, end: 20210105
  681. VINCRISTINE [Suspect]
     Active Substance: VINCRISTINE
     Route: 042
     Dates: start: 20210126, end: 20210126
  682. VINCRISTINE [Suspect]
     Active Substance: VINCRISTINE
     Route: 042
     Dates: start: 20210216
  683. VINCRISTINE [Suspect]
     Active Substance: VINCRISTINE
     Route: 042
     Dates: start: 20210309, end: 20210309
  684. VINCRISTINE [Suspect]
     Active Substance: VINCRISTINE
     Route: 065
  685. VINCRISTINE [Suspect]
     Active Substance: VINCRISTINE
     Route: 065
  686. VINCRISTINE [Suspect]
     Active Substance: VINCRISTINE
     Route: 065
  687. VINCRISTINE [Suspect]
     Active Substance: VINCRISTINE
     Route: 065
  688. VINCRISTINE [Suspect]
     Active Substance: VINCRISTINE
     Route: 065
  689. VINCRISTINE [Suspect]
     Active Substance: VINCRISTINE
     Dosage: TOTAL VOLUME: 50 ML, DATE OF MOST RECENT DOSE PRIOR TO FIRST EPISODE OF NEUTROPENIA 24/NOV/2020, S..
     Route: 065
     Dates: start: 20201124
  690. VINCRISTINE [Suspect]
     Active Substance: VINCRISTINE
     Dosage: TOTAL VOLUME: 50 MLDATE OF MOST RECENT DOSE PRIOR TO FIRST EPISODE OF NEUTROPENIA 24/NOV/2020, S...
     Route: 065
     Dates: start: 20201124
  691. VINCRISTINE [Suspect]
     Active Substance: VINCRISTINE
     Dosage: TOTAL VOLUME: 50 MLDATE OF MOST RECENT DOSE PRIOR TO FIRST EPISODE OF NEUTROPENIA 24/NOV/2020, S...
     Route: 065
     Dates: start: 20201124
  692. VINCRISTINE [Suspect]
     Active Substance: VINCRISTINE
     Route: 050
  693. VINCRISTINE [Suspect]
     Active Substance: VINCRISTINE
     Route: 042
     Dates: start: 20201124
  694. VINCRISTINE [Suspect]
     Active Substance: VINCRISTINE
     Route: 042
  695. VINCRISTINE [Suspect]
     Active Substance: VINCRISTINE
     Route: 042
  696. VINCRISTINE [Suspect]
     Active Substance: VINCRISTINE
     Route: 042
  697. VINCRISTINE [Suspect]
     Active Substance: VINCRISTINE
     Indication: Diffuse large B-cell lymphoma
     Route: 065
  698. VINCRISTINE [Suspect]
     Active Substance: VINCRISTINE
     Route: 065
  699. VINCRISTINE [Suspect]
     Active Substance: VINCRISTINE
     Route: 065
  700. VINCRISTINE [Suspect]
     Active Substance: VINCRISTINE
     Route: 065
     Dates: start: 20201124
  701. VINCRISTINE [Suspect]
     Active Substance: VINCRISTINE
     Route: 065
     Dates: start: 20201124
  702. VINCRISTINE [Suspect]
     Active Substance: VINCRISTINE
     Route: 065
  703. VINCRISTINE [Suspect]
     Active Substance: VINCRISTINE
     Route: 065
  704. VINCRISTINE [Suspect]
     Active Substance: VINCRISTINE
     Route: 042
     Dates: start: 20201124
  705. VINCRISTINE [Suspect]
     Active Substance: VINCRISTINE
     Route: 042
     Dates: start: 20201124
  706. VINCRISTINE [Suspect]
     Active Substance: VINCRISTINE
     Route: 042
     Dates: start: 20201124
  707. VINCRISTINE [Suspect]
     Active Substance: VINCRISTINE
     Route: 050
     Dates: start: 20201124
  708. VINCRISTINE [Suspect]
     Active Substance: VINCRISTINE
     Route: 065
     Dates: start: 20201124
  709. VINCRISTINE [Suspect]
     Active Substance: VINCRISTINE
     Route: 042
  710. VINCRISTINE [Suspect]
     Active Substance: VINCRISTINE
     Route: 065
  711. VINCRISTINE [Suspect]
     Active Substance: VINCRISTINE
     Route: 050
     Dates: start: 20201124
  712. VINCRISTINE [Suspect]
     Active Substance: VINCRISTINE
     Route: 050
     Dates: start: 20201124
  713. VINCRISTINE [Suspect]
     Active Substance: VINCRISTINE
     Dosage: 6 MG/M2, 1 WK, 2 MILLIGRAM/SQ. METER, 3XW (TOTAL VOLUME: 50 MLDATE OF MOST RECENT DOSE PRIOR TO FIRS
     Route: 042
     Dates: start: 20201124
  714. VINCRISTINE [Suspect]
     Active Substance: VINCRISTINE
     Dosage: 6 MG/M2, 1 WK, 2 MILLIGRAM/SQ. METER, 3XW (TOTAL VOLUME: 50 MLDATE OF MOST RECENT DOSE PRIOR TO FIRS
     Route: 042
     Dates: start: 20201124
  715. VINCRISTINE [Suspect]
     Active Substance: VINCRISTINE
     Route: 042
     Dates: start: 20201124
  716. VINCRISTINE [Suspect]
     Active Substance: VINCRISTINE
     Route: 065
  717. VINCRISTINE [Suspect]
     Active Substance: VINCRISTINE
     Route: 065
     Dates: start: 20201121
  718. VINCRISTINE [Suspect]
     Active Substance: VINCRISTINE
     Route: 065
     Dates: start: 20201121
  719. VINCRISTINE [Suspect]
     Active Substance: VINCRISTINE
  720. VINCRISTINE [Suspect]
     Active Substance: VINCRISTINE
     Route: 042
     Dates: start: 20201124
  721. VINCRISTINE [Suspect]
     Active Substance: VINCRISTINE
     Route: 042
     Dates: start: 20201124
  722. VINCRISTINE [Suspect]
     Active Substance: VINCRISTINE
  723. VINCRISTINE [Suspect]
     Active Substance: VINCRISTINE
     Route: 065
     Dates: start: 20201124
  724. VINCRISTINE [Suspect]
     Active Substance: VINCRISTINE
     Route: 065
     Dates: start: 20201124
  725. VINCRISTINE [Suspect]
     Active Substance: VINCRISTINE
  726. VINCRISTINE [Suspect]
     Active Substance: VINCRISTINE
     Route: 042
     Dates: start: 20201124
  727. VINCRISTINE [Suspect]
     Active Substance: VINCRISTINE
     Route: 042
     Dates: start: 20201124
  728. VINCRISTINE [Suspect]
     Active Substance: VINCRISTINE
     Route: 042
     Dates: start: 20201124
  729. VINCRISTINE [Suspect]
     Active Substance: VINCRISTINE
     Route: 042
  730. VINCRISTINE [Suspect]
     Active Substance: VINCRISTINE
     Dates: start: 20201124
  731. VINCRISTINE [Suspect]
     Active Substance: VINCRISTINE
  732. VINCRISTINE [Suspect]
     Active Substance: VINCRISTINE
     Route: 042
     Dates: start: 20201124
  733. VINCRISTINE [Suspect]
     Active Substance: VINCRISTINE
     Route: 042
     Dates: start: 20201124
  734. VINCRISTINE [Suspect]
     Active Substance: VINCRISTINE
     Dates: start: 20201124
  735. VINCRISTINE [Suspect]
     Active Substance: VINCRISTINE
     Dates: start: 20201124
  736. VINCRISTINE [Suspect]
     Active Substance: VINCRISTINE
     Dosage: 27MG/M2, 1 WK, 9 MILLIGRAM/SQ. METER, 3XW (9 MG/M2, THREE TIMES IN WEEK, TOTAL VOLUME: 50 ML DATE OF
     Route: 042
     Dates: start: 20201124
  737. VINCRISTINE [Suspect]
     Active Substance: VINCRISTINE
     Route: 065
     Dates: start: 20201124
  738. VINCRISTINE [Suspect]
     Active Substance: VINCRISTINE
     Dates: start: 20201124
  739. VINCRISTINE [Suspect]
     Active Substance: VINCRISTINE
     Route: 042
     Dates: start: 20201121
  740. VINCRISTINE [Suspect]
     Active Substance: VINCRISTINE
     Dates: start: 20201124
  741. VINCRISTINE [Suspect]
     Active Substance: VINCRISTINE
     Dates: start: 20201124
  742. VINCRISTINE [Suspect]
     Active Substance: VINCRISTINE
     Dates: start: 20201124
  743. VINCRISTINE [Suspect]
     Active Substance: VINCRISTINE
     Dates: start: 20201124
  744. VINCRISTINE [Suspect]
     Active Substance: VINCRISTINE
     Route: 042
     Dates: start: 20201121
  745. VINCRISTINE [Suspect]
     Active Substance: VINCRISTINE
     Dates: start: 20201124
  746. VINCRISTINE [Suspect]
     Active Substance: VINCRISTINE
     Dates: start: 20201124
  747. VINCRISTINE [Suspect]
     Active Substance: VINCRISTINE
     Indication: Diffuse large B-cell lymphoma
     Dates: start: 20201124
  748. VINCRISTINE [Suspect]
     Active Substance: VINCRISTINE
     Route: 042
     Dates: start: 20201124
  749. VINCRISTINE [Suspect]
     Active Substance: VINCRISTINE
     Dosage: 2 MG/M2, 3/WEEK
     Route: 042
     Dates: start: 20201124
  750. VINCRISTINE [Suspect]
     Active Substance: VINCRISTINE
     Dates: start: 20201124
  751. VINCRISTINE [Suspect]
     Active Substance: VINCRISTINE
  752. VINCRISTINE [Suspect]
     Active Substance: VINCRISTINE
  753. VINCRISTINE [Suspect]
     Active Substance: VINCRISTINE
     Route: 042
  754. VINCRISTINE [Suspect]
     Active Substance: VINCRISTINE
  755. VINCRISTINE [Suspect]
     Active Substance: VINCRISTINE
  756. VINCRISTINE [Suspect]
     Active Substance: VINCRISTINE
  757. VINCRISTINE [Suspect]
     Active Substance: VINCRISTINE
  758. VINCRISTINE [Suspect]
     Active Substance: VINCRISTINE
  759. VINCRISTINE [Suspect]
     Active Substance: VINCRISTINE
  760. VINCRISTINE [Suspect]
     Active Substance: VINCRISTINE
     Dosage: 9 MG/M2, THREE TIMES IN WEEK, TOTAL VOLUME: 50 ML DATE OF MOST RECENT DOSE PRIOR TO FIRST
     Route: 042
     Dates: start: 20201121
  761. VINCRISTINE [Suspect]
     Active Substance: VINCRISTINE
     Dosage: 9 MG/M2, THREE TIMES IN WEEK, TOTAL VOLUME: 50 ML DATE OF MOST RECENT DOSE PRIOR TO FIRST
     Route: 042
  762. VINCRISTINE [Suspect]
     Active Substance: VINCRISTINE
     Dosage: 6MG/M2 1 PER WEEK (DOSAGE TEXT: 9 MG/M2, THREE TIMES IN WEEK, TOTAL VOLUME: 50 ML DATE OF MOST RECEN
     Dates: start: 20201121
  763. VINCRISTINE [Suspect]
     Active Substance: VINCRISTINE
     Dosage: 2 MG/M2, 3/WEEK (DOSAGE TEXT: 9 MG/M2, THREE TIMES IN WEEK, 2 MILLIGRAM/SQ. METER, TOTAL VOLUME: 50
     Dates: start: 20201124
  764. VINCRISTINE [Suspect]
     Active Substance: VINCRISTINE
     Route: 050
  765. VINCRISTINE [Suspect]
     Active Substance: VINCRISTINE
     Dosage: 27 MG/M2, 1/WEEK (DOSAGE TEXT: 9 MG/M2, THREE TIMES IN WEEK, TOTAL VOLUME: 50 ML DATE OF MOST RECENT
  766. VINCRISTINE [Suspect]
     Active Substance: VINCRISTINE
  767. VINCRISTINE [Suspect]
     Active Substance: VINCRISTINE
     Route: 050
     Dates: start: 20201124
  768. VINCRISTINE [Suspect]
     Active Substance: VINCRISTINE
     Route: 050
     Dates: start: 20201124
  769. VINCRISTINE [Suspect]
     Active Substance: VINCRISTINE
     Route: 050
  770. VINCRISTINE [Suspect]
     Active Substance: VINCRISTINE
     Route: 050
  771. VINCRISTINE [Suspect]
     Active Substance: VINCRISTINE
     Route: 050
     Dates: start: 20201124
  772. VINCRISTINE [Suspect]
     Active Substance: VINCRISTINE
     Route: 065
     Dates: start: 20201124
  773. VINCRISTINE [Suspect]
     Active Substance: VINCRISTINE
     Route: 065
  774. VINCRISTINE [Suspect]
     Active Substance: VINCRISTINE
     Route: 065
  775. VINCRISTINE [Suspect]
     Active Substance: VINCRISTINE
     Route: 065
  776. VINCRISTINE [Suspect]
     Active Substance: VINCRISTINE
     Route: 065
  777. VINCRISTINE [Suspect]
     Active Substance: VINCRISTINE
     Route: 065
  778. VINCRISTINE [Suspect]
     Active Substance: VINCRISTINE
     Route: 065
  779. VINCRISTINE [Suspect]
     Active Substance: VINCRISTINE
     Route: 065
  780. VINCRISTINE [Suspect]
     Active Substance: VINCRISTINE
     Route: 065
  781. VINCRISTINE [Suspect]
     Active Substance: VINCRISTINE
     Route: 065
     Dates: start: 20201121
  782. VINCRISTINE [Suspect]
     Active Substance: VINCRISTINE
     Route: 065
  783. VINCRISTINE [Suspect]
     Active Substance: VINCRISTINE
     Route: 065
  784. VINCRISTINE [Suspect]
     Active Substance: VINCRISTINE
     Route: 065
  785. VINCRISTINE [Suspect]
     Active Substance: VINCRISTINE
     Route: 065
  786. VINCRISTINE [Suspect]
     Active Substance: VINCRISTINE
     Route: 065
  787. VINCRISTINE [Suspect]
     Active Substance: VINCRISTINE
     Route: 065
  788. VINCRISTINE [Suspect]
     Active Substance: VINCRISTINE
     Route: 065
  789. VINCRISTINE [Suspect]
     Active Substance: VINCRISTINE
     Route: 065
  790. VINCRISTINE [Suspect]
     Active Substance: VINCRISTINE
     Route: 065
  791. VINCRISTINE [Suspect]
     Active Substance: VINCRISTINE
     Route: 065
  792. VINCRISTINE [Suspect]
     Active Substance: VINCRISTINE
     Route: 065
  793. VINCRISTINE [Suspect]
     Active Substance: VINCRISTINE
     Route: 065
  794. VINCRISTINE [Suspect]
     Active Substance: VINCRISTINE
     Route: 065
  795. VINCRISTINE [Suspect]
     Active Substance: VINCRISTINE
     Route: 042
     Dates: start: 20201124
  796. VINCRISTINE [Suspect]
     Active Substance: VINCRISTINE
     Route: 042
     Dates: start: 20201124
  797. VINCRISTINE [Suspect]
     Active Substance: VINCRISTINE
     Indication: Diffuse large B-cell lymphoma
     Route: 042
     Dates: start: 20201124
  798. VINCRISTINE [Suspect]
     Active Substance: VINCRISTINE
     Route: 065
     Dates: start: 2020
  799. VINCRISTINE [Suspect]
     Active Substance: VINCRISTINE
     Indication: Diffuse large B-cell lymphoma
     Route: 042
     Dates: start: 20201124
  800. VINCRISTINE [Suspect]
     Active Substance: VINCRISTINE
  801. VINCRISTINE [Suspect]
     Active Substance: VINCRISTINE
  802. VINCRISTINE [Suspect]
     Active Substance: VINCRISTINE
  803. VINCRISTINE [Suspect]
     Active Substance: VINCRISTINE
  804. VINCRISTINE [Suspect]
     Active Substance: VINCRISTINE
  805. VINCRISTINE [Suspect]
     Active Substance: VINCRISTINE
  806. VINCRISTINE [Suspect]
     Active Substance: VINCRISTINE
  807. VINCRISTINE [Suspect]
     Active Substance: VINCRISTINE
  808. VINCRISTINE [Suspect]
     Active Substance: VINCRISTINE
  809. VINCRISTINE [Suspect]
     Active Substance: VINCRISTINE
  810. VINCRISTINE [Suspect]
     Active Substance: VINCRISTINE
  811. VINCRISTINE [Suspect]
     Active Substance: VINCRISTINE
  812. VINCRISTINE [Suspect]
     Active Substance: VINCRISTINE
  813. VINCRISTINE [Suspect]
     Active Substance: VINCRISTINE
  814. VINCRISTINE [Suspect]
     Active Substance: VINCRISTINE
     Dates: start: 20201124
  815. VINCRISTINE [Suspect]
     Active Substance: VINCRISTINE
  816. VINCRISTINE [Suspect]
     Active Substance: VINCRISTINE
  817. VINCRISTINE [Suspect]
     Active Substance: VINCRISTINE
     Dates: start: 20201124
  818. VINCRISTINE [Suspect]
     Active Substance: VINCRISTINE
     Route: 042
     Dates: start: 20201124
  819. VINCRISTINE [Suspect]
     Active Substance: VINCRISTINE
     Dates: start: 20201124
  820. VINCRISTINE [Suspect]
     Active Substance: VINCRISTINE
  821. VINCRISTINE [Suspect]
     Active Substance: VINCRISTINE
  822. VINCRISTINE [Suspect]
     Active Substance: VINCRISTINE
     Route: 042
     Dates: start: 20201124
  823. VINCRISTINE [Suspect]
     Active Substance: VINCRISTINE
  824. VINCRISTINE [Suspect]
     Active Substance: VINCRISTINE
     Route: 042
     Dates: start: 20201124
  825. VINCRISTINE [Suspect]
     Active Substance: VINCRISTINE
  826. VINCRISTINE [Suspect]
     Active Substance: VINCRISTINE
     Route: 042
     Dates: start: 20201124
  827. VINCRISTINE [Suspect]
     Active Substance: VINCRISTINE
  828. VINCRISTINE [Suspect]
     Active Substance: VINCRISTINE
  829. VINCRISTINE [Suspect]
     Active Substance: VINCRISTINE
  830. VINCRISTINE [Suspect]
     Active Substance: VINCRISTINE
  831. VINCRISTINE [Suspect]
     Active Substance: VINCRISTINE
  832. VINCRISTINE [Suspect]
     Active Substance: VINCRISTINE
  833. VINCRISTINE [Suspect]
     Active Substance: VINCRISTINE
  834. VINCRISTINE [Suspect]
     Active Substance: VINCRISTINE
  835. VINCRISTINE [Suspect]
     Active Substance: VINCRISTINE
  836. VINCRISTINE [Suspect]
     Active Substance: VINCRISTINE
  837. VINCRISTINE [Suspect]
     Active Substance: VINCRISTINE
     Dates: start: 20201124
  838. VINCRISTINE [Suspect]
     Active Substance: VINCRISTINE
  839. VINCRISTINE [Suspect]
     Active Substance: VINCRISTINE
  840. VINCRISTINE [Suspect]
     Active Substance: VINCRISTINE
  841. VINCRISTINE [Suspect]
     Active Substance: VINCRISTINE
  842. VINCRISTINE [Suspect]
     Active Substance: VINCRISTINE
  843. VINCRISTINE [Suspect]
     Active Substance: VINCRISTINE
  844. VINCRISTINE [Suspect]
     Active Substance: VINCRISTINE
  845. VINCRISTINE [Suspect]
     Active Substance: VINCRISTINE
  846. VINCRISTINE [Suspect]
     Active Substance: VINCRISTINE
  847. VINCRISTINE [Suspect]
     Active Substance: VINCRISTINE
  848. VINCRISTINE [Suspect]
     Active Substance: VINCRISTINE
     Dosage: 9 MILLIGRAM/SQ. METER, 3XW (9 MG/M2, THREE TIMES IN WEEK, TOTAL VOLUME: 50 ML DATE OF MOST
     Route: 042
     Dates: start: 20201124
  849. VINCRISTINE [Suspect]
     Active Substance: VINCRISTINE
     Indication: Diffuse large B-cell lymphoma
     Dates: start: 20201124
  850. VINCRISTINE [Suspect]
     Active Substance: VINCRISTINE
     Dates: start: 20201124
  851. VINCRISTINE [Suspect]
     Active Substance: VINCRISTINE
     Route: 042
     Dates: start: 20201121
  852. VINCRISTINE [Suspect]
     Active Substance: VINCRISTINE
     Route: 042
     Dates: start: 20201124
  853. VINCRISTINE [Suspect]
     Active Substance: VINCRISTINE
     Route: 042
     Dates: start: 20201124
  854. VINCRISTINE [Suspect]
     Active Substance: VINCRISTINE
     Route: 042
     Dates: start: 20201124
  855. VINCRISTINE [Suspect]
     Active Substance: VINCRISTINE
     Route: 042
     Dates: start: 20201124
  856. VINCRISTINE [Suspect]
     Active Substance: VINCRISTINE
     Route: 042
     Dates: start: 20201121
  857. VINCRISTINE [Suspect]
     Active Substance: VINCRISTINE
     Route: 042
     Dates: start: 20201124
  858. VINCRISTINE [Suspect]
     Active Substance: VINCRISTINE
     Route: 042
     Dates: start: 20201124
  859. VINCRISTINE [Suspect]
     Active Substance: VINCRISTINE
     Route: 042
     Dates: start: 20201124
  860. VINCRISTINE [Suspect]
     Active Substance: VINCRISTINE
     Route: 042
     Dates: start: 20201124
  861. VINCRISTINE [Suspect]
     Active Substance: VINCRISTINE
     Route: 042
     Dates: start: 20201124
  862. VINCRISTINE [Suspect]
     Active Substance: VINCRISTINE
     Route: 042
     Dates: start: 20201124
  863. VINCRISTINE [Suspect]
     Active Substance: VINCRISTINE
     Dates: start: 20201121
  864. VINCRISTINE [Suspect]
     Active Substance: VINCRISTINE
     Dates: start: 20201121
  865. VINCRISTINE [Suspect]
     Active Substance: VINCRISTINE
     Route: 042
     Dates: start: 20201124
  866. VINCRISTINE [Suspect]
     Active Substance: VINCRISTINE
     Route: 042
     Dates: start: 20201124
  867. VINCRISTINE [Suspect]
     Active Substance: VINCRISTINE
     Route: 042
     Dates: start: 20201124
  868. VINCRISTINE [Suspect]
     Active Substance: VINCRISTINE
     Route: 042
     Dates: start: 20201124
  869. VINCRISTINE [Suspect]
     Active Substance: VINCRISTINE
     Route: 042
     Dates: start: 20201124
  870. VINCRISTINE [Suspect]
     Active Substance: VINCRISTINE
     Route: 042
     Dates: start: 20201121
  871. VINCRISTINE [Suspect]
     Active Substance: VINCRISTINE
     Route: 042
     Dates: start: 20201124
  872. VINCRISTINE [Suspect]
     Active Substance: VINCRISTINE
     Route: 042
     Dates: start: 20201124
  873. VINCRISTINE [Suspect]
     Active Substance: VINCRISTINE
     Route: 042
     Dates: start: 20201124
  874. VINCRISTINE [Suspect]
     Active Substance: VINCRISTINE
     Route: 042
     Dates: start: 20201124
  875. VINCRISTINE [Suspect]
     Active Substance: VINCRISTINE
     Route: 042
     Dates: start: 20201124
  876. VINCRISTINE [Suspect]
     Active Substance: VINCRISTINE
     Route: 042
     Dates: start: 20201124
  877. VINCRISTINE [Suspect]
     Active Substance: VINCRISTINE
     Route: 042
     Dates: start: 20201124
  878. VINCRISTINE [Suspect]
     Active Substance: VINCRISTINE
     Route: 042
     Dates: start: 20201124
  879. VINCRISTINE [Suspect]
     Active Substance: VINCRISTINE
     Route: 042
     Dates: start: 20201124
  880. VINCRISTINE [Suspect]
     Active Substance: VINCRISTINE
  881. VINCRISTINE [Suspect]
     Active Substance: VINCRISTINE
  882. VINCRISTINE [Suspect]
     Active Substance: VINCRISTINE
  883. VINCRISTINE [Suspect]
     Active Substance: VINCRISTINE
  884. VINCRISTINE [Suspect]
     Active Substance: VINCRISTINE
     Dates: start: 20201215, end: 20201215
  885. VINCRISTINE [Suspect]
     Active Substance: VINCRISTINE
     Dates: start: 20210105, end: 20210105
  886. VINCRISTINE [Suspect]
     Active Substance: VINCRISTINE
     Dates: start: 20210126, end: 20210126
  887. VINCRISTINE [Suspect]
     Active Substance: VINCRISTINE
     Dates: start: 20210216
  888. VINCRISTINE [Suspect]
     Active Substance: VINCRISTINE
     Dates: start: 20210309, end: 20210309
  889. VINCRISTINE [Suspect]
     Active Substance: VINCRISTINE
  890. VINCRISTINE [Suspect]
     Active Substance: VINCRISTINE
  891. VINCRISTINE [Suspect]
     Active Substance: VINCRISTINE
     Dates: start: 20201124
  892. VINCRISTINE [Suspect]
     Active Substance: VINCRISTINE
  893. VINCRISTINE [Suspect]
     Active Substance: VINCRISTINE
  894. VINCRISTINE [Suspect]
     Active Substance: VINCRISTINE
  895. VINCRISTINE [Suspect]
     Active Substance: VINCRISTINE
  896. PREDNISOLONE [Suspect]
     Active Substance: PREDNISOLONE
     Indication: Diffuse large B-cell lymphoma
     Route: 048
     Dates: start: 20201124
  897. PREDNISOLONE [Suspect]
     Active Substance: PREDNISOLONE
     Route: 048
     Dates: start: 20201128
  898. PREDNISOLONE [Suspect]
     Active Substance: PREDNISOLONE
     Route: 048
     Dates: start: 20201215
  899. PREDNISOLONE [Suspect]
     Active Substance: PREDNISOLONE
     Route: 048
     Dates: start: 20210109
  900. PREDNISOLONE [Suspect]
     Active Substance: PREDNISOLONE
     Route: 048
     Dates: start: 20210218, end: 20210218
  901. PREDNISOLONE [Suspect]
     Active Substance: PREDNISOLONE
     Dates: start: 20210220
  902. PREDNISOLONE [Suspect]
     Active Substance: PREDNISOLONE
     Route: 048
     Dates: start: 20210309
  903. PREDNISOLONE [Suspect]
     Active Substance: PREDNISOLONE
     Route: 048
     Dates: start: 20201118, end: 20201122
  904. PREDNISOLONE [Suspect]
     Active Substance: PREDNISOLONE
     Route: 048
     Dates: start: 20201124
  905. PREDNISOLONE [Suspect]
     Active Substance: PREDNISOLONE
     Route: 065
     Dates: start: 20201124
  906. PREDNISOLONE [Suspect]
     Active Substance: PREDNISOLONE
     Route: 065
  907. PREDNISOLONE [Suspect]
     Active Substance: PREDNISOLONE
     Route: 065
  908. PREDNISOLONE [Suspect]
     Active Substance: PREDNISOLONE
     Route: 065
     Dates: start: 20201118, end: 20201122
  909. PREDNISOLONE [Suspect]
     Active Substance: PREDNISOLONE
     Route: 048
     Dates: start: 20201124
  910. PREDNISOLONE [Suspect]
     Active Substance: PREDNISOLONE
     Route: 048
     Dates: start: 20201124
  911. PREDNISOLONE [Suspect]
     Active Substance: PREDNISOLONE
     Route: 065
     Dates: start: 20201118, end: 20201122
  912. PREDNISOLONE [Suspect]
     Active Substance: PREDNISOLONE
     Route: 048
     Dates: start: 20201124
  913. PREDNISOLONE [Suspect]
     Active Substance: PREDNISOLONE
     Route: 048
     Dates: start: 20201124
  914. PREDNISOLONE [Suspect]
     Active Substance: PREDNISOLONE
     Dates: start: 20201118, end: 20201122
  915. PREDNISOLONE [Suspect]
     Active Substance: PREDNISOLONE
     Dates: start: 20201118, end: 20201122
  916. PREDNISOLONE [Suspect]
     Active Substance: PREDNISOLONE
  917. PREDNISOLONE [Suspect]
     Active Substance: PREDNISOLONE
  918. PREDNISOLONE [Suspect]
     Active Substance: PREDNISOLONE
  919. PREDNISOLONE [Suspect]
     Active Substance: PREDNISOLONE
  920. PREDNISOLONE [Suspect]
     Active Substance: PREDNISOLONE
     Dates: start: 20201118, end: 20201122
  921. PREDNISOLONE [Suspect]
     Active Substance: PREDNISOLONE
     Dates: start: 20201124
  922. PREDNISOLONE [Suspect]
     Active Substance: PREDNISOLONE
     Route: 048
     Dates: start: 20201118, end: 20201122
  923. PREDNISOLONE [Suspect]
     Active Substance: PREDNISOLONE
     Route: 048
     Dates: start: 20201118, end: 20201122
  924. PREDNISOLONE [Suspect]
     Active Substance: PREDNISOLONE
     Route: 048
     Dates: end: 20201122
  925. PREDNISOLONE [Suspect]
     Active Substance: PREDNISOLONE
     Route: 048
     Dates: start: 20201118, end: 20201122
  926. PREDNISOLONE [Suspect]
     Active Substance: PREDNISOLONE
     Route: 048
     Dates: start: 20201118, end: 20201122
  927. PREDNISOLONE [Suspect]
     Active Substance: PREDNISOLONE
     Route: 048
     Dates: start: 20201118, end: 20201122
  928. PREDNISOLONE [Suspect]
     Active Substance: PREDNISOLONE
     Route: 048
     Dates: start: 20201118, end: 20201122
  929. PREDNISOLONE [Suspect]
     Active Substance: PREDNISOLONE
     Dates: start: 20201124
  930. PREDNISOLONE [Suspect]
     Active Substance: PREDNISOLONE
     Dates: start: 20201124
  931. PREDNISOLONE [Suspect]
     Active Substance: PREDNISOLONE
     Dates: start: 20201124
  932. PREDNISOLONE [Suspect]
     Active Substance: PREDNISOLONE
     Dates: start: 20201124
  933. PREDNISOLONE [Suspect]
     Active Substance: PREDNISOLONE
     Route: 048
     Dates: start: 20201124
  934. PREDNISOLONE [Suspect]
     Active Substance: PREDNISOLONE
     Route: 048
     Dates: start: 20201124
  935. PREDNISOLONE [Suspect]
     Active Substance: PREDNISOLONE
     Route: 048
     Dates: start: 20201124
  936. PREDNISOLONE [Suspect]
     Active Substance: PREDNISOLONE
     Route: 048
  937. PREDNISOLONE [Suspect]
     Active Substance: PREDNISOLONE
     Route: 048
     Dates: start: 20201122
  938. PREDNISOLONE [Suspect]
     Active Substance: PREDNISOLONE
     Dates: start: 20201124
  939. PREDNISOLONE [Suspect]
     Active Substance: PREDNISOLONE
     Route: 048
     Dates: start: 20201124
  940. PREDNISOLONE [Suspect]
     Active Substance: PREDNISOLONE
     Route: 048
     Dates: start: 20201118, end: 20201122
  941. PREDNISOLONE [Suspect]
     Active Substance: PREDNISOLONE
     Dates: start: 20201118, end: 20201122
  942. PREDNISOLONE [Suspect]
     Active Substance: PREDNISOLONE
     Dates: start: 20201124
  943. PREDNISOLONE [Suspect]
     Active Substance: PREDNISOLONE
     Dates: start: 20201124
  944. PREDNISOLONE [Suspect]
     Active Substance: PREDNISOLONE
     Dates: start: 20201124
  945. PREDNISOLONE [Suspect]
     Active Substance: PREDNISOLONE
     Indication: Diffuse large B-cell lymphoma
     Route: 048
     Dates: start: 20201118, end: 20201122
  946. PREDNISOLONE [Suspect]
     Active Substance: PREDNISOLONE
     Route: 048
     Dates: start: 20201118, end: 20201122
  947. PREDNISOLONE [Suspect]
     Active Substance: PREDNISOLONE
     Route: 050
     Dates: start: 20201124
  948. PREDNISOLONE [Suspect]
     Active Substance: PREDNISOLONE
     Route: 050
     Dates: start: 20201118, end: 20201122
  949. PREDNISOLONE [Suspect]
     Active Substance: PREDNISOLONE
     Dates: start: 20201118, end: 20201122
  950. PREDNISOLONE [Suspect]
     Active Substance: PREDNISOLONE
  951. PREDNISOLONE [Suspect]
     Active Substance: PREDNISOLONE
     Indication: Product used for unknown indication
     Dates: start: 20201124
  952. PREDNISOLONE [Suspect]
     Active Substance: PREDNISOLONE
     Route: 048
     Dates: start: 20201118, end: 20201122
  953. PREDNISOLONE [Suspect]
     Active Substance: PREDNISOLONE
     Route: 065
  954. PREDNISOLONE [Suspect]
     Active Substance: PREDNISOLONE
     Indication: Diffuse large B-cell lymphoma
     Route: 048
     Dates: start: 20201118, end: 20201122
  955. PREDNISOLONE [Suspect]
     Active Substance: PREDNISOLONE
     Route: 048
     Dates: start: 20201124
  956. PREDNISOLONE [Suspect]
     Active Substance: PREDNISOLONE
     Dates: start: 20201124
  957. PREDNISOLONE [Suspect]
     Active Substance: PREDNISOLONE
     Route: 065
     Dates: start: 20201124
  958. PREDNISOLONE [Suspect]
     Active Substance: PREDNISOLONE
  959. PREDNISOLONE [Suspect]
     Active Substance: PREDNISOLONE
  960. PREDNISOLONE [Suspect]
     Active Substance: PREDNISOLONE
     Indication: Diffuse large B-cell lymphoma
     Route: 050
     Dates: start: 20201118, end: 20201122
  961. PREDNISOLONE [Suspect]
     Active Substance: PREDNISOLONE
     Indication: Product used for unknown indication
     Route: 065
  962. PREDNISOLONE [Suspect]
     Active Substance: PREDNISOLONE
     Route: 050
     Dates: start: 20201124
  963. PREDNISOLONE [Suspect]
     Active Substance: PREDNISOLONE
     Route: 050
     Dates: start: 20201124
  964. PREDNISOLONE [Suspect]
     Active Substance: PREDNISOLONE
     Route: 048
     Dates: start: 20201118, end: 20201122
  965. PREDNISOLONE [Suspect]
     Active Substance: PREDNISOLONE
     Route: 065
     Dates: start: 20201124
  966. PREDNISOLONE [Suspect]
     Active Substance: PREDNISOLONE
     Route: 065
     Dates: start: 20201124
  967. PREDNISOLONE [Suspect]
     Active Substance: PREDNISOLONE
     Route: 065
  968. PREDNISOLONE [Suspect]
     Active Substance: PREDNISOLONE
     Route: 065
  969. PREDNISOLONE [Suspect]
     Active Substance: PREDNISOLONE
     Route: 065
  970. PREDNISOLONE [Suspect]
     Active Substance: PREDNISOLONE
     Route: 065
     Dates: start: 20201124
  971. PREDNISOLONE [Suspect]
     Active Substance: PREDNISOLONE
     Route: 048
     Dates: start: 20201124
  972. PREDNISOLONE [Suspect]
     Active Substance: PREDNISOLONE
     Route: 048
     Dates: start: 20201118, end: 20201122
  973. PREDNISOLONE [Suspect]
     Active Substance: PREDNISOLONE
     Route: 065
     Dates: start: 20201118, end: 20201122
  974. PREDNISOLONE [Suspect]
     Active Substance: PREDNISOLONE
     Route: 065
     Dates: start: 20201124
  975. PREDNISOLONE [Suspect]
     Active Substance: PREDNISOLONE
     Route: 048
     Dates: start: 20201124
  976. PREDNISOLONE [Suspect]
     Active Substance: PREDNISOLONE
     Route: 048
     Dates: start: 20201124
  977. PREDNISOLONE [Suspect]
     Active Substance: PREDNISOLONE
     Route: 048
     Dates: start: 20201118, end: 20201122
  978. PREDNISOLONE [Suspect]
     Active Substance: PREDNISOLONE
     Indication: Diffuse large B-cell lymphoma
     Route: 065
     Dates: start: 20201124
  979. PREDNISOLONE [Suspect]
     Active Substance: PREDNISOLONE
     Indication: Product used for unknown indication
     Route: 050
     Dates: start: 20201124
  980. PREDNISOLONE [Suspect]
     Active Substance: PREDNISOLONE
     Route: 050
     Dates: start: 20201118, end: 20201122
  981. PREDNISOLONE [Suspect]
     Active Substance: PREDNISOLONE
     Route: 065
     Dates: start: 20201124
  982. PREDNISOLONE [Suspect]
     Active Substance: PREDNISOLONE
     Route: 048
     Dates: start: 20201124
  983. PREDNISOLONE [Suspect]
     Active Substance: PREDNISOLONE
     Route: 065
     Dates: start: 20201124
  984. PREDNISOLONE [Suspect]
     Active Substance: PREDNISOLONE
     Route: 048
     Dates: start: 20201118, end: 20201122
  985. PREDNISOLONE [Suspect]
     Active Substance: PREDNISOLONE
     Route: 048
     Dates: start: 20201124
  986. PREDNISOLONE [Suspect]
     Active Substance: PREDNISOLONE
     Route: 048
     Dates: start: 20201118, end: 20201122
  987. PREDNISOLONE [Suspect]
     Active Substance: PREDNISOLONE
     Route: 048
     Dates: start: 20201118, end: 20201122
  988. PREDNISOLONE [Suspect]
     Active Substance: PREDNISOLONE
     Route: 048
     Dates: start: 20201118, end: 20201122
  989. PREDNISOLONE [Suspect]
     Active Substance: PREDNISOLONE
     Route: 048
     Dates: start: 20201118, end: 20201122
  990. PREDNISOLONE [Suspect]
     Active Substance: PREDNISOLONE
     Route: 048
     Dates: start: 20201118, end: 20201122
  991. PREDNISOLONE [Suspect]
     Active Substance: PREDNISOLONE
     Route: 048
     Dates: start: 20201124
  992. PREDNISOLONE [Suspect]
     Active Substance: PREDNISOLONE
     Route: 065
     Dates: start: 20201118, end: 20201122
  993. PREDNISOLONE [Suspect]
     Active Substance: PREDNISOLONE
     Route: 065
  994. PREDNISOLONE [Concomitant]
     Active Substance: PREDNISOLONE
     Indication: Diffuse large B-cell lymphoma
     Route: 048
     Dates: start: 20201118, end: 20201122
  995. PREDNISOLONE [Concomitant]
     Active Substance: PREDNISOLONE
     Route: 050
     Dates: start: 20201118, end: 20201122
  996. PREDNISOLONE [Concomitant]
     Active Substance: PREDNISOLONE
     Route: 065
     Dates: start: 20201124
  997. PREDNISOLONE [Concomitant]
     Active Substance: PREDNISOLONE
     Route: 065
     Dates: start: 20201118, end: 20201122
  998. PREDNISOLONE [Concomitant]
     Active Substance: PREDNISOLONE
     Route: 065
  999. PREDNISOLONE [Concomitant]
     Active Substance: PREDNISOLONE
     Route: 065
  1000. PREDNISOLONE [Concomitant]
     Active Substance: PREDNISOLONE
     Indication: Diffuse large B-cell lymphoma
     Dates: start: 20201118, end: 20201122
  1001. PREDNISOLONE [Concomitant]
     Active Substance: PREDNISOLONE
     Route: 048
     Dates: start: 20201124
  1002. PREDNISOLONE [Concomitant]
     Active Substance: PREDNISOLONE
     Route: 048
     Dates: start: 20201124
  1003. PREDNISOLONE [Concomitant]
     Active Substance: PREDNISOLONE
     Dates: start: 20201124
  1004. PREDNISOLONE [Concomitant]
     Active Substance: PREDNISOLONE
  1005. PREDNISOLONE [Concomitant]
     Active Substance: PREDNISOLONE
     Dates: start: 20201118, end: 20201122
  1006. PREDNISOLONE [Concomitant]
     Active Substance: PREDNISOLONE
  1007. PREDNISOLONE [Concomitant]
     Active Substance: PREDNISOLONE
  1008. ALLOPURINOL [Concomitant]
     Active Substance: ALLOPURINOL
     Indication: Prophylaxis
     Route: 065
     Dates: start: 20201118
  1009. ALLOPURINOL [Concomitant]
     Active Substance: ALLOPURINOL
     Dates: start: 20201118
  1010. ALLOPURINOL [Concomitant]
     Active Substance: ALLOPURINOL
     Dates: start: 20201118
  1011. ALLOPURINOL [Concomitant]
     Active Substance: ALLOPURINOL
     Dates: start: 20201118
  1012. ALLOPURINOL [Concomitant]
     Active Substance: ALLOPURINOL
     Dates: start: 20201118
  1013. ALLOPURINOL [Concomitant]
     Active Substance: ALLOPURINOL
     Dates: start: 20201118
  1014. ALLOPURINOL [Concomitant]
     Active Substance: ALLOPURINOL
     Dates: start: 20201118
  1015. ALLOPURINOL [Concomitant]
     Active Substance: ALLOPURINOL
     Dates: start: 20201118
  1016. ALLOPURINOL [Concomitant]
     Active Substance: ALLOPURINOL
     Dates: start: 20201118
  1017. ALLOPURINOL [Concomitant]
     Active Substance: ALLOPURINOL
     Dates: start: 20201118
  1018. ALLOPURINOL [Concomitant]
     Active Substance: ALLOPURINOL
     Dates: start: 20201118
  1019. ALLOPURINOL [Concomitant]
     Active Substance: ALLOPURINOL
     Dates: start: 20201118
  1020. ALLOPURINOL [Concomitant]
     Active Substance: ALLOPURINOL
     Dates: start: 20201118
  1021. ALLOPURINOL [Concomitant]
     Active Substance: ALLOPURINOL
     Indication: Prophylaxis
     Route: 050
     Dates: start: 20201118
  1022. ALLOPURINOL [Concomitant]
     Active Substance: ALLOPURINOL
     Route: 065
     Dates: start: 20201118
  1023. ALLOPURINOL [Concomitant]
     Active Substance: ALLOPURINOL
     Route: 065
     Dates: start: 20201118
  1024. ALLOPURINOL [Concomitant]
     Active Substance: ALLOPURINOL
     Route: 065
     Dates: start: 20201118
  1025. ALLOPURINOL [Concomitant]
     Active Substance: ALLOPURINOL
     Route: 065
     Dates: start: 20201118
  1026. ALLOPURINOL [Concomitant]
     Active Substance: ALLOPURINOL
     Route: 065
     Dates: start: 20201118
  1027. ALLOPURINOL [Concomitant]
     Active Substance: ALLOPURINOL
     Route: 065
     Dates: start: 20201118
  1028. ALLOPURINOL [Concomitant]
     Active Substance: ALLOPURINOL
     Route: 065
     Dates: start: 20201118
  1029. ALLOPURINOL [Concomitant]
     Active Substance: ALLOPURINOL
     Route: 065
     Dates: start: 20201118
  1030. ALLOPURINOL [Concomitant]
     Active Substance: ALLOPURINOL
     Route: 065
     Dates: start: 20201118
  1031. ALLOPURINOL [Concomitant]
     Active Substance: ALLOPURINOL
     Route: 065
     Dates: start: 20201118
  1032. ALLOPURINOL [Concomitant]
     Active Substance: ALLOPURINOL
     Route: 065
     Dates: start: 20201118
  1033. ALLOPURINOL [Concomitant]
     Active Substance: ALLOPURINOL
     Route: 065
     Dates: start: 20201118
  1034. ALLOPURINOL [Concomitant]
     Active Substance: ALLOPURINOL
     Route: 065
     Dates: start: 20201118
  1035. ALLOPURINOL [Concomitant]
     Active Substance: ALLOPURINOL
     Route: 065
     Dates: start: 20201118
  1036. ALLOPURINOL [Concomitant]
     Active Substance: ALLOPURINOL
     Route: 065
     Dates: start: 20201118
  1037. ALLOPURINOL [Concomitant]
     Active Substance: ALLOPURINOL
     Route: 065
     Dates: start: 20201118
  1038. ALLOPURINOL [Concomitant]
     Active Substance: ALLOPURINOL
     Route: 065
     Dates: start: 20201118
  1039. CHLORPHENIRAMINE MALEATE [Concomitant]
     Active Substance: CHLORPHENIRAMINE MALEATE
     Indication: Prophylaxis
     Dosage: 10 MG EVRY 3 WEEKS / DOSE LAST STUDY DRUG ADMIN PRIOR AE 1260 MG START AD END DATE OF MOST RECENT DO
     Route: 065
     Dates: start: 20201124, end: 20201124
  1040. CHLORPHENIRAMINE MALEATE [Concomitant]
     Active Substance: CHLORPHENIRAMINE MALEATE
     Indication: Rash maculo-papular
     Route: 042
     Dates: start: 20201215, end: 20201215
  1041. CHLORPHENIRAMINE MALEATE [Concomitant]
     Active Substance: CHLORPHENIRAMINE MALEATE
     Route: 042
     Dates: start: 20210126, end: 20210126
  1042. CHLORPHENIRAMINE MALEATE [Concomitant]
     Active Substance: CHLORPHENIRAMINE MALEATE
     Route: 042
     Dates: start: 20210302, end: 20210302
  1043. CHLORPHENIRAMINE MALEATE [Concomitant]
     Active Substance: CHLORPHENIRAMINE MALEATE
     Route: 042
     Dates: start: 20210323, end: 20210323
  1044. CHLORPHENIRAMINE MALEATE [Concomitant]
     Active Substance: CHLORPHENIRAMINE MALEATE
     Route: 042
     Dates: start: 20210216, end: 20210216
  1045. CHLORPHENIRAMINE MALEATE [Concomitant]
     Active Substance: CHLORPHENIRAMINE MALEATE
     Route: 042
     Dates: start: 20210119, end: 20210119
  1046. CHLORPHENIRAMINE MALEATE [Concomitant]
     Active Substance: CHLORPHENIRAMINE MALEATE
     Route: 042
     Dates: start: 20210309, end: 20210309
  1047. CHLORPHENIRAMINE MALEATE [Concomitant]
     Active Substance: CHLORPHENIRAMINE MALEATE
     Route: 042
     Dates: start: 20210209, end: 20210209
  1048. CHLORPHENIRAMINE MALEATE [Concomitant]
     Active Substance: CHLORPHENIRAMINE MALEATE
     Route: 065
     Dates: start: 20201217
  1049. CHLORPHENIRAMINE MALEATE [Concomitant]
     Active Substance: CHLORPHENIRAMINE MALEATE
     Route: 050
     Dates: start: 20210323, end: 20210323
  1050. CHLORPHENIRAMINE MALEATE [Concomitant]
     Active Substance: CHLORPHENIRAMINE MALEATE
     Route: 065
     Dates: start: 20201215, end: 20201215
  1051. CHLORPHENIRAMINE MALEATE [Concomitant]
     Active Substance: CHLORPHENIRAMINE MALEATE
     Route: 065
     Dates: start: 20210309, end: 20210309
  1052. CHLORPHENIRAMINE MALEATE [Concomitant]
     Active Substance: CHLORPHENIRAMINE MALEATE
     Route: 065
     Dates: start: 20210119, end: 20210119
  1053. CHLORPHENIRAMINE MALEATE [Concomitant]
     Active Substance: CHLORPHENIRAMINE MALEATE
     Route: 065
     Dates: start: 20201217
  1054. CHLORPHENIRAMINE MALEATE [Concomitant]
     Active Substance: CHLORPHENIRAMINE MALEATE
     Route: 065
     Dates: start: 20210302, end: 20210302
  1055. CHLORPHENIRAMINE MALEATE [Concomitant]
     Active Substance: CHLORPHENIRAMINE MALEATE
     Route: 065
     Dates: start: 20210126, end: 20210126
  1056. CHLORPHENIRAMINE MALEATE [Concomitant]
     Active Substance: CHLORPHENIRAMINE MALEATE
     Route: 065
     Dates: start: 20210216, end: 20210216
  1057. CHLORPHENIRAMINE MALEATE [Concomitant]
     Active Substance: CHLORPHENIRAMINE MALEATE
     Route: 065
     Dates: start: 20210209, end: 20210209
  1058. CHLORPHENIRAMINE MALEATE [Concomitant]
     Active Substance: CHLORPHENIRAMINE MALEATE
     Route: 050
     Dates: start: 20210209, end: 20210209
  1059. CHLORPHENIRAMINE MALEATE [Concomitant]
     Active Substance: CHLORPHENIRAMINE MALEATE
     Route: 050
     Dates: start: 20211206, end: 20211206
  1060. CHLORPHENIRAMINE MALEATE [Concomitant]
     Active Substance: CHLORPHENIRAMINE MALEATE
     Route: 050
     Dates: start: 20210209, end: 20210209
  1061. CHLORPHENIRAMINE MALEATE [Concomitant]
     Active Substance: CHLORPHENIRAMINE MALEATE
     Route: 050
     Dates: start: 20210309, end: 20210309
  1062. CHLORPHENIRAMINE MALEATE [Concomitant]
     Active Substance: CHLORPHENIRAMINE MALEATE
     Route: 050
     Dates: start: 20210302, end: 20210302
  1063. CHLORPHENIRAMINE MALEATE [Concomitant]
     Active Substance: CHLORPHENIRAMINE MALEATE
     Route: 065
     Dates: start: 20210323, end: 20210323
  1064. CHLORPHENIRAMINE MALEATE [Concomitant]
     Active Substance: CHLORPHENIRAMINE MALEATE
     Route: 050
     Dates: start: 20210216, end: 20210216
  1065. CHLORPHENIRAMINE MALEATE [Concomitant]
     Active Substance: CHLORPHENIRAMINE MALEATE
     Route: 065
     Dates: start: 20201217
  1066. CHLORPHENIRAMINE MALEATE [Concomitant]
     Active Substance: CHLORPHENIRAMINE MALEATE
     Route: 050
     Dates: start: 20201215, end: 20201215
  1067. CHLORPHENIRAMINE MALEATE [Concomitant]
     Active Substance: CHLORPHENIRAMINE MALEATE
     Route: 050
     Dates: start: 20201124, end: 20201124
  1068. CHLORPHENIRAMINE MALEATE [Concomitant]
     Active Substance: CHLORPHENIRAMINE MALEATE
     Route: 065
     Dates: start: 20210119, end: 20210119
  1069. CHLORPHENIRAMINE MALEATE [Concomitant]
     Active Substance: CHLORPHENIRAMINE MALEATE
     Route: 042
     Dates: start: 20201124, end: 20201124
  1070. CHLORPHENIRAMINE MALEATE [Concomitant]
     Active Substance: CHLORPHENIRAMINE MALEATE
     Route: 042
     Dates: start: 20210309, end: 20210309
  1071. CHLORPHENIRAMINE MALEATE [Concomitant]
     Active Substance: CHLORPHENIRAMINE MALEATE
     Route: 042
     Dates: start: 20210323, end: 20210323
  1072. CHLORPHENIRAMINE MALEATE [Concomitant]
     Active Substance: CHLORPHENIRAMINE MALEATE
     Route: 042
     Dates: start: 20210126, end: 20210126
  1073. CHLORPHENIRAMINE MALEATE [Concomitant]
     Active Substance: CHLORPHENIRAMINE MALEATE
     Route: 042
     Dates: start: 20210209, end: 20210209
  1074. CHLORPHENIRAMINE MALEATE [Concomitant]
     Active Substance: CHLORPHENIRAMINE MALEATE
     Route: 042
     Dates: start: 20210119, end: 20210119
  1075. CHLORPHENIRAMINE MALEATE [Concomitant]
     Active Substance: CHLORPHENIRAMINE MALEATE
     Dates: start: 20210309, end: 20210309
  1076. CHLORPHENIRAMINE MALEATE [Concomitant]
     Active Substance: CHLORPHENIRAMINE MALEATE
     Route: 050
     Dates: start: 20210323, end: 20210323
  1077. CHLORPHENIRAMINE MALEATE [Concomitant]
     Active Substance: CHLORPHENIRAMINE MALEATE
     Dates: start: 20201217
  1078. CHLORPHENIRAMINE MALEATE [Concomitant]
     Active Substance: CHLORPHENIRAMINE MALEATE
     Dates: start: 20210302, end: 20210302
  1079. CHLORPHENIRAMINE MALEATE [Concomitant]
     Active Substance: CHLORPHENIRAMINE MALEATE
     Dates: start: 20210216, end: 20210216
  1080. CHLORPHENIRAMINE MALEATE [Concomitant]
     Active Substance: CHLORPHENIRAMINE MALEATE
     Dates: start: 20210216, end: 20210216
  1081. CHLORPHENIRAMINE MALEATE [Concomitant]
     Active Substance: CHLORPHENIRAMINE MALEATE
     Dates: start: 20210209, end: 20210209
  1082. CHLORPHENIRAMINE MALEATE [Concomitant]
     Active Substance: CHLORPHENIRAMINE MALEATE
     Dates: start: 20201215, end: 20201215
  1083. CHLORPHENIRAMINE MALEATE [Concomitant]
     Active Substance: CHLORPHENIRAMINE MALEATE
     Dates: start: 20201215, end: 20201215
  1084. CHLORPHENIRAMINE MALEATE [Concomitant]
     Active Substance: CHLORPHENIRAMINE MALEATE
     Dates: start: 20201124, end: 20201124
  1085. CHLORPHENIRAMINE MALEATE [Concomitant]
     Active Substance: CHLORPHENIRAMINE MALEATE
     Dates: start: 20210323, end: 20210323
  1086. CHLORPHENIRAMINE MALEATE [Concomitant]
     Active Substance: CHLORPHENIRAMINE MALEATE
     Dates: start: 20210216, end: 20210216
  1087. CHLORPHENIRAMINE MALEATE [Concomitant]
     Active Substance: CHLORPHENIRAMINE MALEATE
     Dates: start: 20201124, end: 20201124
  1088. CHLORPHENIRAMINE MALEATE [Concomitant]
     Active Substance: CHLORPHENIRAMINE MALEATE
     Dates: start: 20210209, end: 20210209
  1089. CHLORPHENIRAMINE MALEATE [Concomitant]
     Active Substance: CHLORPHENIRAMINE MALEATE
     Indication: Prophylaxis
     Dates: start: 20210119, end: 20210119
  1090. CHLORPHENIRAMINE MALEATE [Concomitant]
     Active Substance: CHLORPHENIRAMINE MALEATE
     Indication: Rash maculo-papular
     Dates: start: 20210126, end: 20210126
  1091. CHLORPHENIRAMINE MALEATE [Concomitant]
     Active Substance: CHLORPHENIRAMINE MALEATE
     Dates: start: 20210309, end: 20210309
  1092. CHLORPHENIRAMINE MALEATE [Concomitant]
     Active Substance: CHLORPHENIRAMINE MALEATE
     Dates: start: 20210323, end: 20210323
  1093. CHLORPHENIRAMINE MALEATE [Concomitant]
     Active Substance: CHLORPHENIRAMINE MALEATE
     Dates: start: 20210309, end: 20210309
  1094. CHLORPHENIRAMINE MALEATE [Concomitant]
     Active Substance: CHLORPHENIRAMINE MALEATE
     Dates: start: 20210309, end: 20210309
  1095. CHLORPHENIRAMINE MALEATE [Concomitant]
     Active Substance: CHLORPHENIRAMINE MALEATE
     Dates: start: 20210126, end: 20210126
  1096. CHLORPHENIRAMINE MALEATE [Concomitant]
     Active Substance: CHLORPHENIRAMINE MALEATE
     Dates: start: 20210126, end: 20210126
  1097. CHLORPHENIRAMINE MALEATE [Concomitant]
     Active Substance: CHLORPHENIRAMINE MALEATE
     Dates: start: 20210119, end: 20210119
  1098. CHLORPHENIRAMINE MALEATE [Concomitant]
     Active Substance: CHLORPHENIRAMINE MALEATE
     Dates: start: 20210119, end: 20210119
  1099. CHLORPHENIRAMINE MALEATE [Concomitant]
     Active Substance: CHLORPHENIRAMINE MALEATE
     Dates: start: 20210323, end: 20210323
  1100. CHLORPHENIRAMINE MALEATE [Concomitant]
     Active Substance: CHLORPHENIRAMINE MALEATE
     Dates: start: 20210323, end: 20210323
  1101. CHLORPHENIRAMINE MALEATE [Concomitant]
     Active Substance: CHLORPHENIRAMINE MALEATE
     Dates: start: 20210209, end: 20210209
  1102. CHLORPHENIRAMINE MALEATE [Concomitant]
     Active Substance: CHLORPHENIRAMINE MALEATE
     Dates: start: 20210209, end: 20210209
  1103. CHLORPHENIRAMINE MALEATE [Concomitant]
     Active Substance: CHLORPHENIRAMINE MALEATE
     Dates: start: 20210119, end: 20210119
  1104. CHLORPHENIRAMINE MALEATE [Concomitant]
     Active Substance: CHLORPHENIRAMINE MALEATE
     Dates: start: 20210119, end: 20210119
  1105. CHLORPHENIRAMINE MALEATE [Concomitant]
     Active Substance: CHLORPHENIRAMINE MALEATE
     Dates: start: 20201124, end: 20201124
  1106. CHLORPHENIRAMINE MALEATE [Concomitant]
     Active Substance: CHLORPHENIRAMINE MALEATE
     Dates: start: 20201124, end: 20201124
  1107. CHLORPHENIRAMINE MALEATE [Concomitant]
     Active Substance: CHLORPHENIRAMINE MALEATE
     Dates: start: 20210323, end: 20210323
  1108. CHLORPHENIRAMINE MALEATE [Concomitant]
     Active Substance: CHLORPHENIRAMINE MALEATE
     Dates: start: 20210323, end: 20210323
  1109. CHLORPHENIRAMINE MALEATE [Concomitant]
     Active Substance: CHLORPHENIRAMINE MALEATE
     Dates: start: 20210309, end: 20210309
  1110. CHLORPHENIRAMINE MALEATE [Concomitant]
     Active Substance: CHLORPHENIRAMINE MALEATE
     Dates: start: 20210309, end: 20210309
  1111. CHLORPHENIRAMINE MALEATE [Concomitant]
     Active Substance: CHLORPHENIRAMINE MALEATE
     Dates: start: 20210209, end: 20210209
  1112. CHLORPHENIRAMINE MALEATE [Concomitant]
     Active Substance: CHLORPHENIRAMINE MALEATE
     Dates: start: 20210209, end: 20210209
  1113. CHLORPHENIRAMINE MALEATE [Concomitant]
     Active Substance: CHLORPHENIRAMINE MALEATE
     Dates: start: 20210126, end: 20210126
  1114. CHLORPHENIRAMINE MALEATE [Concomitant]
     Active Substance: CHLORPHENIRAMINE MALEATE
     Dates: start: 20210126, end: 20210126
  1115. CHLORPHENIRAMINE MALEATE [Concomitant]
     Active Substance: CHLORPHENIRAMINE MALEATE
     Dates: start: 20210206, end: 20210206
  1116. CHLORPHENIRAMINE MALEATE [Concomitant]
     Active Substance: CHLORPHENIRAMINE MALEATE
     Dates: start: 20210206, end: 20210206
  1117. CHLORPHENIRAMINE MALEATE [Concomitant]
     Active Substance: CHLORPHENIRAMINE MALEATE
  1118. CHLORPHENIRAMINE MALEATE [Concomitant]
     Active Substance: CHLORPHENIRAMINE MALEATE
  1119. CHLORPHENIRAMINE MALEATE [Concomitant]
     Active Substance: CHLORPHENIRAMINE MALEATE
     Dates: start: 20201217
  1120. CHLORPHENIRAMINE MALEATE [Concomitant]
     Active Substance: CHLORPHENIRAMINE MALEATE
  1121. CHLORPHENIRAMINE MALEATE [Concomitant]
     Active Substance: CHLORPHENIRAMINE MALEATE
  1122. CHLORPHENIRAMINE MALEATE [Concomitant]
     Active Substance: CHLORPHENIRAMINE MALEATE
     Dates: start: 20201124, end: 20201124
  1123. CHLORPHENIRAMINE MALEATE [Concomitant]
     Active Substance: CHLORPHENIRAMINE MALEATE
     Dates: start: 20201217
  1124. CHLORPHENIRAMINE MALEATE [Concomitant]
     Active Substance: CHLORPHENIRAMINE MALEATE
     Dates: start: 20201217
  1125. CHLORPHENIRAMINE MALEATE [Concomitant]
     Active Substance: CHLORPHENIRAMINE MALEATE
     Dates: start: 20210216, end: 20210216
  1126. CHLORPHENIRAMINE MALEATE [Concomitant]
     Active Substance: CHLORPHENIRAMINE MALEATE
     Dates: start: 20210216, end: 20210216
  1127. CHLORPHENIRAMINE MALEATE [Concomitant]
     Active Substance: CHLORPHENIRAMINE MALEATE
     Route: 042
     Dates: start: 20210323, end: 20210323
  1128. CHLORPHENIRAMINE MALEATE [Concomitant]
     Active Substance: CHLORPHENIRAMINE MALEATE
     Dates: start: 20210216, end: 20210216
  1129. CHLORPHENIRAMINE MALEATE [Concomitant]
     Active Substance: CHLORPHENIRAMINE MALEATE
     Dates: start: 20210302, end: 20210302
  1130. CHLORPHENIRAMINE MALEATE [Concomitant]
     Active Substance: CHLORPHENIRAMINE MALEATE
     Dates: start: 20210126, end: 20210126
  1131. CHLORPHENIRAMINE MALEATE [Concomitant]
     Active Substance: CHLORPHENIRAMINE MALEATE
     Dates: start: 20210126, end: 20210126
  1132. CHLORPHENIRAMINE MALEATE [Concomitant]
     Active Substance: CHLORPHENIRAMINE MALEATE
     Dates: start: 20210302, end: 20210302
  1133. CHLORPHENIRAMINE MALEATE [Concomitant]
     Active Substance: CHLORPHENIRAMINE MALEATE
     Dates: start: 20210119, end: 20210119
  1134. CHLORPHENIRAMINE MALEATE [Concomitant]
     Active Substance: CHLORPHENIRAMINE MALEATE
     Dates: start: 20210119, end: 20210119
  1135. CHLORPHENIRAMINE MALEATE [Concomitant]
     Active Substance: CHLORPHENIRAMINE MALEATE
     Dates: start: 20210209, end: 20210209
  1136. CHLORPHENIRAMINE MALEATE [Concomitant]
     Active Substance: CHLORPHENIRAMINE MALEATE
     Dates: start: 20210309, end: 20210309
  1137. CHLORPHENIRAMINE MALEATE [Concomitant]
     Active Substance: CHLORPHENIRAMINE MALEATE
     Dates: start: 20210309, end: 20210309
  1138. CHLORPHENIRAMINE MALEATE [Concomitant]
     Active Substance: CHLORPHENIRAMINE MALEATE
     Dates: start: 20201215, end: 20201215
  1139. CHLORPHENIRAMINE MALEATE [Concomitant]
     Active Substance: CHLORPHENIRAMINE MALEATE
     Indication: Prophylaxis
     Dosage: 10 MILLIGRAM, Q3W (DOSE LAST STUDY DRUG ADMIN PRIOR AE 1260 MG START AD END DATE OF MOST RECENT DO)
     Dates: start: 20201124, end: 20201124
  1140. CHLORPHENIRAMINE MALEATE [Concomitant]
     Active Substance: CHLORPHENIRAMINE MALEATE
     Indication: Rash maculo-papular
     Dates: start: 20201124, end: 20201124
  1141. CHLORPHENIRAMINE MALEATE [Concomitant]
     Active Substance: CHLORPHENIRAMINE MALEATE
     Dates: start: 20210126, end: 20210126
  1142. CHLORPHENIRAMINE MALEATE [Concomitant]
     Active Substance: CHLORPHENIRAMINE MALEATE
     Dates: start: 20201215, end: 20201215
  1143. CHLORPHENIRAMINE MALEATE [Concomitant]
     Active Substance: CHLORPHENIRAMINE MALEATE
     Indication: Prophylaxis
     Route: 050
     Dates: start: 20210209, end: 20210209
  1144. CHLORPHENIRAMINE MALEATE [Concomitant]
     Active Substance: CHLORPHENIRAMINE MALEATE
     Indication: Rash maculo-papular
     Route: 050
     Dates: start: 20201215, end: 20201215
  1145. CHLORPHENIRAMINE MALEATE [Concomitant]
     Active Substance: CHLORPHENIRAMINE MALEATE
     Route: 065
     Dates: start: 20201217
  1146. CHLORPHENIRAMINE MALEATE [Concomitant]
     Active Substance: CHLORPHENIRAMINE MALEATE
     Route: 050
     Dates: start: 20210302, end: 20210302
  1147. CHLORPHENIRAMINE MALEATE [Concomitant]
     Active Substance: CHLORPHENIRAMINE MALEATE
     Route: 050
     Dates: start: 20210126, end: 20210126
  1148. CHLORPHENIRAMINE MALEATE [Concomitant]
     Active Substance: CHLORPHENIRAMINE MALEATE
     Route: 050
     Dates: start: 20201124, end: 20201124
  1149. CHLORPHENIRAMINE MALEATE [Concomitant]
     Active Substance: CHLORPHENIRAMINE MALEATE
     Route: 050
     Dates: start: 20210309, end: 20210309
  1150. CHLORPHENIRAMINE MALEATE [Concomitant]
     Active Substance: CHLORPHENIRAMINE MALEATE
     Route: 050
     Dates: start: 20210216, end: 20210216
  1151. CHLORPHENIRAMINE MALEATE [Concomitant]
     Active Substance: CHLORPHENIRAMINE MALEATE
     Route: 050
     Dates: start: 20210119, end: 20210119
  1152. CHLORPHENIRAMINE MALEATE [Concomitant]
     Active Substance: CHLORPHENIRAMINE MALEATE
     Route: 050
     Dates: start: 20210323, end: 20210323
  1153. CHLORPHENIRAMINE MALEATE [Concomitant]
     Active Substance: CHLORPHENIRAMINE MALEATE
     Route: 065
     Dates: start: 20210302, end: 20210302
  1154. CHLORPHENIRAMINE MALEATE [Concomitant]
     Active Substance: CHLORPHENIRAMINE MALEATE
     Route: 065
     Dates: start: 20210126, end: 20210126
  1155. CHLORPHENIRAMINE MALEATE [Concomitant]
     Active Substance: CHLORPHENIRAMINE MALEATE
     Route: 065
     Dates: start: 20201215, end: 20201215
  1156. CHLORPHENIRAMINE MALEATE [Concomitant]
     Active Substance: CHLORPHENIRAMINE MALEATE
     Route: 065
     Dates: start: 20210309, end: 20210309
  1157. CHLORPHENIRAMINE MALEATE [Concomitant]
     Active Substance: CHLORPHENIRAMINE MALEATE
     Route: 065
     Dates: start: 20210216, end: 20210216
  1158. CHLORPHENIRAMINE MALEATE [Concomitant]
     Active Substance: CHLORPHENIRAMINE MALEATE
     Route: 065
     Dates: start: 20210323, end: 20210323
  1159. CHLORPHENIRAMINE MALEATE [Concomitant]
     Active Substance: CHLORPHENIRAMINE MALEATE
     Route: 065
     Dates: start: 20210209, end: 20210209
  1160. CHLORPHENIRAMINE MALEATE [Concomitant]
     Active Substance: CHLORPHENIRAMINE MALEATE
     Route: 065
     Dates: start: 20210323, end: 20210323
  1161. CHLORPHENIRAMINE MALEATE [Concomitant]
     Active Substance: CHLORPHENIRAMINE MALEATE
     Route: 065
     Dates: start: 20200217
  1162. CHLORPHENIRAMINE MALEATE [Concomitant]
     Active Substance: CHLORPHENIRAMINE MALEATE
     Route: 065
     Dates: start: 20200217
  1163. CHLORPHENIRAMINE MALEATE [Concomitant]
     Active Substance: CHLORPHENIRAMINE MALEATE
  1164. CHLORPHENIRAMINE MALEATE [Concomitant]
     Active Substance: CHLORPHENIRAMINE MALEATE
     Route: 065
     Dates: start: 20201215, end: 20201215
  1165. CHLORPHENIRAMINE MALEATE [Concomitant]
     Active Substance: CHLORPHENIRAMINE MALEATE
     Route: 065
     Dates: start: 20210216, end: 20210216
  1166. CHLORPHENIRAMINE MALEATE [Concomitant]
     Active Substance: CHLORPHENIRAMINE MALEATE
     Route: 065
     Dates: start: 20201217
  1167. CHLORPHENIRAMINE MALEATE [Concomitant]
     Active Substance: CHLORPHENIRAMINE MALEATE
     Route: 065
     Dates: start: 20201217
  1168. CHLORPHENIRAMINE MALEATE [Concomitant]
     Active Substance: CHLORPHENIRAMINE MALEATE
     Route: 065
     Dates: start: 20210309, end: 20210309
  1169. CHLORPHENIRAMINE MALEATE [Concomitant]
     Active Substance: CHLORPHENIRAMINE MALEATE
     Route: 065
     Dates: start: 20210126, end: 20210126
  1170. CHLORPHENIRAMINE MALEATE [Concomitant]
     Active Substance: CHLORPHENIRAMINE MALEATE
     Route: 065
     Dates: start: 20201217
  1171. CHLORPHENIRAMINE MALEATE [Concomitant]
     Active Substance: CHLORPHENIRAMINE MALEATE
     Route: 065
     Dates: start: 20210119, end: 20210119
  1172. CHLORPHENIRAMINE MALEATE [Concomitant]
     Active Substance: CHLORPHENIRAMINE MALEATE
     Route: 065
     Dates: start: 20210302, end: 20210302
  1173. CHLORPHENIRAMINE MALEATE [Concomitant]
     Active Substance: CHLORPHENIRAMINE MALEATE
     Route: 065
     Dates: start: 20201124, end: 20201124
  1174. CHLORPHENIRAMINE MALEATE [Concomitant]
     Active Substance: CHLORPHENIRAMINE MALEATE
     Route: 065
     Dates: start: 20201215, end: 20201215
  1175. CHLORPHENIRAMINE MALEATE [Concomitant]
     Active Substance: CHLORPHENIRAMINE MALEATE
     Route: 065
     Dates: start: 20210119, end: 20210119
  1176. CHLORPHENIRAMINE MALEATE [Concomitant]
     Active Substance: CHLORPHENIRAMINE MALEATE
     Route: 065
     Dates: start: 20201217, end: 20210119
  1177. CHLORPHENIRAMINE MALEATE [Concomitant]
     Active Substance: CHLORPHENIRAMINE MALEATE
     Route: 065
     Dates: start: 20201124, end: 20201124
  1178. CHLORPHENIRAMINE MALEATE [Concomitant]
     Active Substance: CHLORPHENIRAMINE MALEATE
     Route: 065
     Dates: start: 20210302, end: 20210302
  1179. CHLORPHENIRAMINE MALEATE [Concomitant]
     Active Substance: CHLORPHENIRAMINE MALEATE
  1180. CHLORPHENIRAMINE MALEATE [Concomitant]
     Active Substance: CHLORPHENIRAMINE MALEATE
     Route: 065
     Dates: start: 20210126, end: 20210126
  1181. CHLORPHENIRAMINE MALEATE [Concomitant]
     Active Substance: CHLORPHENIRAMINE MALEATE
     Route: 065
     Dates: start: 20210209, end: 20210209
  1182. CHLORPHENIRAMINE MALEATE [Concomitant]
     Active Substance: CHLORPHENIRAMINE MALEATE
     Route: 065
     Dates: start: 20210323, end: 20210323
  1183. CHLORPHENIRAMINE MALEATE [Concomitant]
     Active Substance: CHLORPHENIRAMINE MALEATE
     Route: 065
     Dates: start: 20210216, end: 20210216
  1184. CHLORPHENIRAMINE MALEATE [Concomitant]
     Active Substance: CHLORPHENIRAMINE MALEATE
     Route: 065
     Dates: start: 20210119, end: 20210119
  1185. CHLORPHENIRAMINE MALEATE [Concomitant]
     Active Substance: CHLORPHENIRAMINE MALEATE
     Route: 065
     Dates: start: 20201124, end: 20201124
  1186. CHLORPHENIRAMINE MALEATE [Concomitant]
     Active Substance: CHLORPHENIRAMINE MALEATE
     Route: 065
     Dates: start: 20201217
  1187. CHLORPHENIRAMINE MALEATE [Concomitant]
     Active Substance: CHLORPHENIRAMINE MALEATE
     Route: 065
     Dates: start: 20201215, end: 20201215
  1188. CHLORPHENIRAMINE MALEATE [Concomitant]
     Active Substance: CHLORPHENIRAMINE MALEATE
     Route: 065
     Dates: start: 20201217
  1189. CHLORPHENIRAMINE MALEATE [Concomitant]
     Active Substance: CHLORPHENIRAMINE MALEATE
     Route: 065
     Dates: start: 20210323, end: 20210323
  1190. CHLORPHENIRAMINE MALEATE [Concomitant]
     Active Substance: CHLORPHENIRAMINE MALEATE
     Route: 065
     Dates: start: 20210302, end: 20210302
  1191. CHLORPHENIRAMINE MALEATE [Concomitant]
     Active Substance: CHLORPHENIRAMINE MALEATE
     Route: 065
     Dates: start: 20201124, end: 20201124
  1192. CHLORPHENIRAMINE MALEATE [Concomitant]
     Active Substance: CHLORPHENIRAMINE MALEATE
     Route: 065
     Dates: start: 20210206, end: 20210206
  1193. CHLORPHENIRAMINE MALEATE [Concomitant]
     Active Substance: CHLORPHENIRAMINE MALEATE
     Indication: Rash maculo-papular
     Route: 065
     Dates: start: 20210309, end: 20210309
  1194. CHLORPHENIRAMINE MALEATE [Concomitant]
     Active Substance: CHLORPHENIRAMINE MALEATE
     Indication: Prophylaxis
     Route: 065
     Dates: start: 20201217
  1195. CHLORPHENIRAMINE MALEATE [Concomitant]
     Active Substance: CHLORPHENIRAMINE MALEATE
     Route: 065
     Dates: start: 20210209, end: 20210209
  1196. CHLORPHENIRAMINE MALEATE [Concomitant]
     Active Substance: CHLORPHENIRAMINE MALEATE
     Route: 065
     Dates: start: 20210216, end: 20210216
  1197. CHLORPHENIRAMINE MALEATE [Concomitant]
     Active Substance: CHLORPHENIRAMINE MALEATE
     Route: 065
     Dates: start: 20210209, end: 20210209
  1198. CHLORPHENIRAMINE MALEATE [Concomitant]
     Active Substance: CHLORPHENIRAMINE MALEATE
     Route: 065
     Dates: start: 20210309, end: 20210309
  1199. CHLORPHENIRAMINE MALEATE [Concomitant]
     Active Substance: CHLORPHENIRAMINE MALEATE
     Route: 065
     Dates: start: 20210209, end: 20210209
  1200. CHLORPHENIRAMINE MALEATE [Concomitant]
     Active Substance: CHLORPHENIRAMINE MALEATE
     Route: 065
     Dates: start: 20201124, end: 20201124
  1201. CHLORPHENIRAMINE MALEATE [Concomitant]
     Active Substance: CHLORPHENIRAMINE MALEATE
     Route: 065
     Dates: start: 20201217
  1202. CHLORPHENIRAMINE MALEATE [Concomitant]
     Active Substance: CHLORPHENIRAMINE MALEATE
     Route: 065
     Dates: start: 20201124, end: 20201124
  1203. CHLORPHENIRAMINE MALEATE [Concomitant]
     Active Substance: CHLORPHENIRAMINE MALEATE
     Dates: start: 20201124, end: 20201124
  1204. CODEINE [Concomitant]
     Active Substance: CODEINE
     Indication: Pain
     Dates: start: 20201123
  1205. CODEINE [Concomitant]
     Active Substance: CODEINE
     Dates: start: 20201224, end: 20201224
  1206. CODEINE [Concomitant]
     Active Substance: CODEINE
     Dates: start: 20201123
  1207. CODEINE [Concomitant]
     Active Substance: CODEINE
     Dates: start: 20201123
  1208. CODEINE [Concomitant]
     Active Substance: CODEINE
     Dates: start: 20201224, end: 20201224
  1209. CODEINE [Concomitant]
     Active Substance: CODEINE
     Route: 065
     Dates: start: 20201224, end: 20201224
  1210. CODEINE [Concomitant]
     Active Substance: CODEINE
     Dates: start: 20201123
  1211. CODEINE [Concomitant]
     Active Substance: CODEINE
     Dates: start: 20201224, end: 20201224
  1212. CODEINE [Concomitant]
     Active Substance: CODEINE
     Dates: start: 20201123
  1213. CODEINE [Concomitant]
     Active Substance: CODEINE
     Dates: start: 20201224, end: 20201224
  1214. CODEINE [Concomitant]
     Active Substance: CODEINE
     Dates: start: 20201224, end: 20201224
  1215. CODEINE [Concomitant]
     Active Substance: CODEINE
     Dates: start: 20201224, end: 20201224
  1216. CODEINE [Concomitant]
     Active Substance: CODEINE
     Dates: start: 20201224, end: 20201224
  1217. CODEINE [Concomitant]
     Active Substance: CODEINE
     Dates: start: 20201224, end: 20201224
  1218. CODEINE [Concomitant]
     Active Substance: CODEINE
     Dates: start: 20201224, end: 20201224
  1219. CODEINE [Concomitant]
     Active Substance: CODEINE
     Dates: start: 20201224, end: 20201224
  1220. CODEINE [Concomitant]
     Active Substance: CODEINE
     Dates: start: 20201224, end: 20201224
  1221. CODEINE [Concomitant]
     Active Substance: CODEINE
     Dates: start: 20201224, end: 20201224
  1222. CODEINE [Concomitant]
     Active Substance: CODEINE
     Dates: start: 20201224, end: 20201224
  1223. CODEINE [Concomitant]
     Active Substance: CODEINE
     Dates: start: 20201224, end: 20201224
  1224. CODEINE [Concomitant]
     Active Substance: CODEINE
     Dates: start: 20201224, end: 20201224
  1225. CODEINE [Concomitant]
     Active Substance: CODEINE
     Dates: start: 20201224, end: 20201224
  1226. CODEINE [Concomitant]
     Active Substance: CODEINE
     Dates: start: 20201224, end: 20201224
  1227. CODEINE [Concomitant]
     Active Substance: CODEINE
     Route: 065
     Dates: start: 20201123
  1228. CODEINE [Concomitant]
     Active Substance: CODEINE
     Dates: start: 20201123
  1229. CODEINE [Concomitant]
     Active Substance: CODEINE
     Route: 065
     Dates: start: 20201224, end: 20201224
  1230. CODEINE [Concomitant]
     Active Substance: CODEINE
     Indication: Pain
     Route: 065
     Dates: start: 20201123
  1231. CODEINE [Concomitant]
     Active Substance: CODEINE
     Route: 065
     Dates: start: 20201224, end: 20201224
  1232. CODEINE [Concomitant]
     Active Substance: CODEINE
     Route: 050
     Dates: start: 20201123
  1233. CODEINE [Concomitant]
     Active Substance: CODEINE
     Route: 065
     Dates: start: 20201224, end: 20201224
  1234. CODEINE [Concomitant]
     Active Substance: CODEINE
     Route: 065
     Dates: start: 20201123
  1235. CODEINE [Concomitant]
     Active Substance: CODEINE
     Dates: start: 20201224, end: 20201224
  1236. CODEINE [Concomitant]
     Active Substance: CODEINE
     Dates: start: 20201123
  1237. CODEINE [Concomitant]
     Active Substance: CODEINE
     Dates: start: 20201224, end: 20201224
  1238. CODEINE [Concomitant]
     Active Substance: CODEINE
     Indication: Pain
     Route: 065
     Dates: start: 20201224, end: 20201224
  1239. CODEINE [Concomitant]
     Active Substance: CODEINE
     Route: 050
     Dates: start: 20201123
  1240. CODEINE [Concomitant]
     Active Substance: CODEINE
     Route: 065
     Dates: start: 20201123
  1241. CODEINE [Concomitant]
     Active Substance: CODEINE
     Route: 065
     Dates: start: 20201224, end: 20201224
  1242. CODEINE [Concomitant]
     Active Substance: CODEINE
     Route: 065
     Dates: start: 20201224, end: 20201224
  1243. CODEINE [Concomitant]
     Active Substance: CODEINE
     Route: 065
     Dates: start: 20201123
  1244. CODEINE [Concomitant]
     Active Substance: CODEINE
     Route: 065
     Dates: start: 20201224, end: 20201224
  1245. CODEINE [Concomitant]
     Active Substance: CODEINE
     Route: 065
     Dates: start: 20201224, end: 20201224
  1246. CODEINE [Concomitant]
     Active Substance: CODEINE
     Route: 065
     Dates: start: 20201123
  1247. CODEINE [Concomitant]
     Active Substance: CODEINE
     Route: 065
     Dates: start: 20201224, end: 20201224
  1248. CODEINE [Concomitant]
     Active Substance: CODEINE
     Route: 065
     Dates: start: 20201224, end: 20201224
  1249. CODEINE [Concomitant]
     Active Substance: CODEINE
     Route: 065
     Dates: start: 20201224, end: 20201224
  1250. CODEINE [Concomitant]
     Active Substance: CODEINE
     Route: 065
     Dates: start: 20201224, end: 20201224
  1251. CODEINE [Concomitant]
     Active Substance: CODEINE
     Route: 065
     Dates: start: 20201224, end: 20201224
  1252. CODEINE [Concomitant]
     Active Substance: CODEINE
     Route: 065
     Dates: start: 20201224, end: 20201224
  1253. CODEINE [Concomitant]
     Active Substance: CODEINE
     Route: 065
     Dates: start: 20201224, end: 20201224
  1254. CODEINE [Concomitant]
     Active Substance: CODEINE
     Route: 065
     Dates: start: 20201224, end: 20201224
  1255. CODEINE [Concomitant]
     Active Substance: CODEINE
     Route: 065
     Dates: start: 20201224, end: 20201224
  1256. CODEINE [Concomitant]
     Active Substance: CODEINE
     Route: 065
     Dates: start: 20201123
  1257. CODEINE [Concomitant]
     Active Substance: CODEINE
     Route: 065
     Dates: start: 20201224, end: 20201224
  1258. CODEINE [Concomitant]
     Active Substance: CODEINE
     Dates: start: 20201123
  1259. CODEINE [Concomitant]
     Active Substance: CODEINE
     Dates: start: 20201123
  1260. DEXAMETHASONE SODIUM SUCCINATE [Concomitant]
     Active Substance: DEXAMETHASONE SODIUM SUCCINATE
     Indication: Product used for unknown indication
     Route: 065
     Dates: start: 20210119, end: 20210119
  1261. DEXAMETHASONE SODIUM SUCCINATE [Concomitant]
     Active Substance: DEXAMETHASONE SODIUM SUCCINATE
     Route: 065
     Dates: start: 20210209, end: 20210209
  1262. DEXAMETHASONE SODIUM SUCCINATE [Concomitant]
     Active Substance: DEXAMETHASONE SODIUM SUCCINATE
     Route: 065
     Dates: start: 20210302, end: 20210302
  1263. DEXAMETHASONE SODIUM SUCCINATE [Concomitant]
     Active Substance: DEXAMETHASONE SODIUM SUCCINATE
     Route: 042
     Dates: start: 20210323, end: 20210323
  1264. DEXAMETHASONE SODIUM SUCCINATE [Concomitant]
     Active Substance: DEXAMETHASONE SODIUM SUCCINATE
     Route: 042
     Dates: start: 20210302, end: 20210302
  1265. DEXAMETHASONE SODIUM SUCCINATE [Concomitant]
     Active Substance: DEXAMETHASONE SODIUM SUCCINATE
     Route: 042
     Dates: start: 20210323, end: 20210323
  1266. DEXAMETHASONE SODIUM SUCCINATE [Concomitant]
     Active Substance: DEXAMETHASONE SODIUM SUCCINATE
     Route: 042
     Dates: start: 20210119, end: 20210119
  1267. DEXAMETHASONE SODIUM SUCCINATE [Concomitant]
     Active Substance: DEXAMETHASONE SODIUM SUCCINATE
     Route: 042
     Dates: start: 20210209, end: 20210209
  1268. DEXAMETHASONE SODIUM SUCCINATE [Concomitant]
     Active Substance: DEXAMETHASONE SODIUM SUCCINATE
     Dates: start: 20210302, end: 20210302
  1269. DEXAMETHASONE SODIUM SUCCINATE [Concomitant]
     Active Substance: DEXAMETHASONE SODIUM SUCCINATE
     Dates: start: 20210302, end: 20210302
  1270. DEXAMETHASONE SODIUM SUCCINATE [Concomitant]
     Active Substance: DEXAMETHASONE SODIUM SUCCINATE
     Dates: start: 20210119, end: 20210119
  1271. DEXAMETHASONE SODIUM SUCCINATE [Concomitant]
     Active Substance: DEXAMETHASONE SODIUM SUCCINATE
     Dates: start: 20210119, end: 20210119
  1272. DEXAMETHASONE SODIUM SUCCINATE [Concomitant]
     Active Substance: DEXAMETHASONE SODIUM SUCCINATE
     Dates: start: 20210302, end: 20210302
  1273. DEXAMETHASONE SODIUM SUCCINATE [Concomitant]
     Active Substance: DEXAMETHASONE SODIUM SUCCINATE
     Dates: start: 20210302, end: 20210302
  1274. DEXAMETHASONE SODIUM SUCCINATE [Concomitant]
     Active Substance: DEXAMETHASONE SODIUM SUCCINATE
     Route: 042
     Dates: start: 20210302, end: 20210302
  1275. DEXAMETHASONE SODIUM SUCCINATE [Concomitant]
     Active Substance: DEXAMETHASONE SODIUM SUCCINATE
     Route: 065
     Dates: start: 20210302, end: 20210302
  1276. DEXAMETHASONE SODIUM SUCCINATE [Concomitant]
     Active Substance: DEXAMETHASONE SODIUM SUCCINATE
     Route: 042
     Dates: start: 20210209, end: 20210209
  1277. DEXAMETHASONE SODIUM SUCCINATE [Concomitant]
     Active Substance: DEXAMETHASONE SODIUM SUCCINATE
     Route: 042
     Dates: start: 20210119, end: 20210119
  1278. DEXAMETHASONE SODIUM SUCCINATE [Concomitant]
     Active Substance: DEXAMETHASONE SODIUM SUCCINATE
     Route: 042
     Dates: start: 20210323, end: 20210323
  1279. DEXAMETHASONE SODIUM SUCCINATE [Concomitant]
     Active Substance: DEXAMETHASONE SODIUM SUCCINATE
     Route: 042
     Dates: start: 20210323, end: 20210323
  1280. DEXAMETHASONE SODIUM SUCCINATE [Concomitant]
     Active Substance: DEXAMETHASONE SODIUM SUCCINATE
     Dates: start: 20210323, end: 20210323
  1281. DEXAMETHASONE SODIUM SUCCINATE [Concomitant]
     Active Substance: DEXAMETHASONE SODIUM SUCCINATE
     Dates: start: 20210209, end: 20210209
  1282. DEXAMETHASONE SODIUM SUCCINATE [Concomitant]
     Active Substance: DEXAMETHASONE SODIUM SUCCINATE
     Dates: start: 20210302, end: 20210302
  1283. DEXAMETHASONE SODIUM SUCCINATE [Concomitant]
     Active Substance: DEXAMETHASONE SODIUM SUCCINATE
     Dates: start: 20210323, end: 20210323
  1284. DEXAMETHASONE SODIUM SUCCINATE [Concomitant]
     Active Substance: DEXAMETHASONE SODIUM SUCCINATE
     Dates: start: 20210323, end: 20210323
  1285. DEXAMETHASONE SODIUM SUCCINATE [Concomitant]
     Active Substance: DEXAMETHASONE SODIUM SUCCINATE
     Dates: start: 20210209, end: 20210209
  1286. DEXAMETHASONE SODIUM SUCCINATE [Concomitant]
     Active Substance: DEXAMETHASONE SODIUM SUCCINATE
     Dates: start: 20210302, end: 20210302
  1287. DEXAMETHASONE SODIUM SUCCINATE [Concomitant]
     Active Substance: DEXAMETHASONE SODIUM SUCCINATE
     Dates: start: 20210323, end: 20210323
  1288. DEXAMETHASONE SODIUM SUCCINATE [Concomitant]
     Active Substance: DEXAMETHASONE SODIUM SUCCINATE
     Dates: start: 20210323, end: 20210323
  1289. DEXAMETHASONE SODIUM SUCCINATE [Concomitant]
     Active Substance: DEXAMETHASONE SODIUM SUCCINATE
     Dates: start: 20210209, end: 20210209
  1290. DEXAMETHASONE SODIUM SUCCINATE [Concomitant]
     Active Substance: DEXAMETHASONE SODIUM SUCCINATE
     Dates: start: 20210209, end: 20210209
  1291. DEXAMETHASONE SODIUM SUCCINATE [Concomitant]
     Active Substance: DEXAMETHASONE SODIUM SUCCINATE
     Dates: start: 20210302, end: 20210302
  1292. DEXAMETHASONE SODIUM SUCCINATE [Concomitant]
     Active Substance: DEXAMETHASONE SODIUM SUCCINATE
     Dates: start: 20210302, end: 20210302
  1293. DEXAMETHASONE SODIUM SUCCINATE [Concomitant]
     Active Substance: DEXAMETHASONE SODIUM SUCCINATE
     Dates: start: 20210323, end: 20210323
  1294. DEXAMETHASONE SODIUM SUCCINATE [Concomitant]
     Active Substance: DEXAMETHASONE SODIUM SUCCINATE
     Dates: start: 20210323, end: 20210323
  1295. DEXAMETHASONE SODIUM SUCCINATE [Concomitant]
     Active Substance: DEXAMETHASONE SODIUM SUCCINATE
     Dates: start: 20210302, end: 20210302
  1296. DEXAMETHASONE SODIUM SUCCINATE [Concomitant]
     Active Substance: DEXAMETHASONE SODIUM SUCCINATE
     Dates: start: 20210302, end: 20210302
  1297. DEXAMETHASONE SODIUM SUCCINATE [Concomitant]
     Active Substance: DEXAMETHASONE SODIUM SUCCINATE
     Dates: start: 20210209, end: 20210209
  1298. DEXAMETHASONE SODIUM SUCCINATE [Concomitant]
     Active Substance: DEXAMETHASONE SODIUM SUCCINATE
     Dates: start: 20210209, end: 20210209
  1299. DEXAMETHASONE SODIUM SUCCINATE [Concomitant]
     Active Substance: DEXAMETHASONE SODIUM SUCCINATE
     Dates: start: 20210209, end: 20210209
  1300. DEXAMETHASONE SODIUM SUCCINATE [Concomitant]
     Active Substance: DEXAMETHASONE SODIUM SUCCINATE
     Dates: start: 20210209, end: 20210209
  1301. DEXAMETHASONE SODIUM SUCCINATE [Concomitant]
     Active Substance: DEXAMETHASONE SODIUM SUCCINATE
     Dates: start: 20210323, end: 20210323
  1302. DEXAMETHASONE SODIUM SUCCINATE [Concomitant]
     Active Substance: DEXAMETHASONE SODIUM SUCCINATE
     Dates: start: 20210323, end: 20210323
  1303. DEXAMETHASONE SODIUM SUCCINATE [Concomitant]
     Active Substance: DEXAMETHASONE SODIUM SUCCINATE
     Dates: start: 20210302, end: 20210302
  1304. DEXAMETHASONE SODIUM SUCCINATE [Concomitant]
     Active Substance: DEXAMETHASONE SODIUM SUCCINATE
     Dates: start: 20210302, end: 20210302
  1305. DEXAMETHASONE SODIUM SUCCINATE [Concomitant]
     Active Substance: DEXAMETHASONE SODIUM SUCCINATE
     Dates: start: 20210209, end: 20210209
  1306. DEXAMETHASONE SODIUM SUCCINATE [Concomitant]
     Active Substance: DEXAMETHASONE SODIUM SUCCINATE
     Dates: start: 20210209, end: 20210209
  1307. DEXAMETHASONE SODIUM SUCCINATE [Concomitant]
     Active Substance: DEXAMETHASONE SODIUM SUCCINATE
     Route: 065
     Dates: start: 20210119, end: 20210119
  1308. DEXAMETHASONE SODIUM SUCCINATE [Concomitant]
     Active Substance: DEXAMETHASONE SODIUM SUCCINATE
     Dates: start: 20210119, end: 20210119
  1309. DEXAMETHASONE SODIUM SUCCINATE [Concomitant]
     Active Substance: DEXAMETHASONE SODIUM SUCCINATE
     Dates: start: 20210302, end: 20210302
  1310. DEXAMETHASONE SODIUM SUCCINATE [Concomitant]
     Active Substance: DEXAMETHASONE SODIUM SUCCINATE
     Indication: Product used for unknown indication
     Dates: start: 20210302, end: 20210302
  1311. DEXAMETHASONE SODIUM SUCCINATE [Concomitant]
     Active Substance: DEXAMETHASONE SODIUM SUCCINATE
     Dates: start: 20210302, end: 20210302
  1312. DEXAMETHASONE SODIUM SUCCINATE [Concomitant]
     Active Substance: DEXAMETHASONE SODIUM SUCCINATE
     Dates: start: 20210302, end: 20210302
  1313. DEXAMETHASONE SODIUM SUCCINATE [Concomitant]
     Active Substance: DEXAMETHASONE SODIUM SUCCINATE
     Dates: start: 20210209, end: 20210209
  1314. DEXAMETHASONE SODIUM SUCCINATE [Concomitant]
     Active Substance: DEXAMETHASONE SODIUM SUCCINATE
     Dates: start: 20210209, end: 20210209
  1315. DEXAMETHASONE SODIUM SUCCINATE [Concomitant]
     Active Substance: DEXAMETHASONE SODIUM SUCCINATE
     Dates: start: 20210323, end: 20210323
  1316. DEXAMETHASONE SODIUM SUCCINATE [Concomitant]
     Active Substance: DEXAMETHASONE SODIUM SUCCINATE
     Dates: start: 20210323, end: 20210323
  1317. DEXAMETHASONE SODIUM SUCCINATE [Concomitant]
     Active Substance: DEXAMETHASONE SODIUM SUCCINATE
     Dates: start: 20210302, end: 20210302
  1318. DEXAMETHASONE SODIUM SUCCINATE [Concomitant]
     Active Substance: DEXAMETHASONE SODIUM SUCCINATE
     Dates: start: 20210302, end: 20210302
  1319. DEXAMETHASONE SODIUM SUCCINATE [Concomitant]
     Active Substance: DEXAMETHASONE SODIUM SUCCINATE
     Dates: start: 20210323, end: 20210323
  1320. DEXAMETHASONE SODIUM SUCCINATE [Concomitant]
     Active Substance: DEXAMETHASONE SODIUM SUCCINATE
     Dates: start: 20210323, end: 20210323
  1321. DEXAMETHASONE SODIUM SUCCINATE [Concomitant]
     Active Substance: DEXAMETHASONE SODIUM SUCCINATE
     Route: 065
     Dates: start: 20210323, end: 20210323
  1322. DEXAMETHASONE SODIUM SUCCINATE [Concomitant]
     Active Substance: DEXAMETHASONE SODIUM SUCCINATE
     Dates: start: 20210323, end: 20210323
  1323. DEXAMETHASONE SODIUM SUCCINATE [Concomitant]
     Active Substance: DEXAMETHASONE SODIUM SUCCINATE
     Dates: start: 20210209, end: 20210209
  1324. DEXAMETHASONE SODIUM SUCCINATE [Concomitant]
     Active Substance: DEXAMETHASONE SODIUM SUCCINATE
     Dates: start: 20210209, end: 20210209
  1325. DEXAMETHASONE SODIUM SUCCINATE [Concomitant]
     Active Substance: DEXAMETHASONE SODIUM SUCCINATE
     Dates: start: 20210302, end: 20210302
  1326. DEXAMETHASONE SODIUM SUCCINATE [Concomitant]
     Active Substance: DEXAMETHASONE SODIUM SUCCINATE
     Dates: start: 20210302, end: 20210302
  1327. DEXAMETHASONE SODIUM SUCCINATE [Concomitant]
     Active Substance: DEXAMETHASONE SODIUM SUCCINATE
     Dates: start: 20210302, end: 20210302
  1328. DEXAMETHASONE SODIUM SUCCINATE [Concomitant]
     Active Substance: DEXAMETHASONE SODIUM SUCCINATE
     Dates: start: 20210302, end: 20210302
  1329. DEXAMETHASONE SODIUM SUCCINATE [Concomitant]
     Active Substance: DEXAMETHASONE SODIUM SUCCINATE
     Dates: start: 20210209, end: 20210209
  1330. DEXAMETHASONE SODIUM SUCCINATE [Concomitant]
     Active Substance: DEXAMETHASONE SODIUM SUCCINATE
     Dates: start: 20210209, end: 20210209
  1331. DEXAMETHASONE SODIUM SUCCINATE [Concomitant]
     Active Substance: DEXAMETHASONE SODIUM SUCCINATE
     Dates: start: 20210323, end: 20210323
  1332. DEXAMETHASONE SODIUM SUCCINATE [Concomitant]
     Active Substance: DEXAMETHASONE SODIUM SUCCINATE
     Dates: start: 20210323, end: 20210323
  1333. DEXAMETHASONE SODIUM SUCCINATE [Concomitant]
     Active Substance: DEXAMETHASONE SODIUM SUCCINATE
     Dates: start: 20210323, end: 20210323
  1334. DEXAMETHASONE SODIUM SUCCINATE [Concomitant]
     Active Substance: DEXAMETHASONE SODIUM SUCCINATE
     Dates: start: 20210323, end: 20210323
  1335. DEXAMETHASONE SODIUM SUCCINATE [Concomitant]
     Active Substance: DEXAMETHASONE SODIUM SUCCINATE
     Dates: start: 20210323, end: 20210323
  1336. DEXAMETHASONE SODIUM SUCCINATE [Concomitant]
     Active Substance: DEXAMETHASONE SODIUM SUCCINATE
     Dates: start: 20210323, end: 20210323
  1337. DEXAMETHASONE SODIUM SUCCINATE [Concomitant]
     Active Substance: DEXAMETHASONE SODIUM SUCCINATE
     Route: 065
     Dates: start: 20210209, end: 20210209
  1338. DEXAMETHASONE SODIUM SUCCINATE [Concomitant]
     Active Substance: DEXAMETHASONE SODIUM SUCCINATE
     Dates: start: 20210209, end: 20210209
  1339. DEXAMETHASONE SODIUM SUCCINATE [Concomitant]
     Active Substance: DEXAMETHASONE SODIUM SUCCINATE
     Dates: start: 20210209, end: 20210209
  1340. DEXAMETHASONE SODIUM SUCCINATE [Concomitant]
     Active Substance: DEXAMETHASONE SODIUM SUCCINATE
     Dates: start: 20210209, end: 20210209
  1341. DEXAMETHASONE SODIUM SUCCINATE [Concomitant]
     Active Substance: DEXAMETHASONE SODIUM SUCCINATE
     Dates: start: 20210119, end: 20210119
  1342. DEXAMETHASONE SODIUM SUCCINATE [Concomitant]
     Active Substance: DEXAMETHASONE SODIUM SUCCINATE
     Dates: start: 20210119, end: 20210119
  1343. DEXAMETHASONE SODIUM SUCCINATE [Concomitant]
     Active Substance: DEXAMETHASONE SODIUM SUCCINATE
     Dates: start: 20210209, end: 20210209
  1344. DEXAMETHASONE SODIUM SUCCINATE [Concomitant]
     Active Substance: DEXAMETHASONE SODIUM SUCCINATE
     Dates: start: 20210209, end: 20210209
  1345. DEXAMETHASONE SODIUM SUCCINATE [Concomitant]
     Active Substance: DEXAMETHASONE SODIUM SUCCINATE
     Dates: start: 20210323, end: 20210323
  1346. DEXAMETHASONE SODIUM SUCCINATE [Concomitant]
     Active Substance: DEXAMETHASONE SODIUM SUCCINATE
     Dates: start: 20210323, end: 20210323
  1347. DEXAMETHASONE SODIUM SUCCINATE [Concomitant]
     Active Substance: DEXAMETHASONE SODIUM SUCCINATE
     Dates: start: 20210302, end: 20210302
  1348. DEXAMETHASONE SODIUM SUCCINATE [Concomitant]
     Active Substance: DEXAMETHASONE SODIUM SUCCINATE
     Dates: start: 20210302, end: 20210302
  1349. DEXAMETHASONE SODIUM SUCCINATE [Concomitant]
     Active Substance: DEXAMETHASONE SODIUM SUCCINATE
     Dates: start: 20210209, end: 20210209
  1350. DEXAMETHASONE SODIUM SUCCINATE [Concomitant]
     Active Substance: DEXAMETHASONE SODIUM SUCCINATE
     Dates: start: 20210209, end: 20210209
  1351. DEXAMETHASONE SODIUM SUCCINATE [Concomitant]
     Active Substance: DEXAMETHASONE SODIUM SUCCINATE
     Dates: start: 20210323, end: 20210323
  1352. DEXAMETHASONE SODIUM SUCCINATE [Concomitant]
     Active Substance: DEXAMETHASONE SODIUM SUCCINATE
     Dates: start: 20210323, end: 20210323
  1353. DEXAMETHASONE SODIUM SUCCINATE [Concomitant]
     Active Substance: DEXAMETHASONE SODIUM SUCCINATE
     Dates: start: 20210209, end: 20210209
  1354. DEXAMETHASONE SODIUM SUCCINATE [Concomitant]
     Active Substance: DEXAMETHASONE SODIUM SUCCINATE
     Dates: start: 20210209, end: 20210209
  1355. DEXAMETHASONE SODIUM SUCCINATE [Concomitant]
     Active Substance: DEXAMETHASONE SODIUM SUCCINATE
     Dates: start: 20210323, end: 20210323
  1356. DEXAMETHASONE SODIUM SUCCINATE [Concomitant]
     Active Substance: DEXAMETHASONE SODIUM SUCCINATE
     Dates: start: 20210323, end: 20210323
  1357. DEXAMETHASONE SODIUM SUCCINATE [Concomitant]
     Active Substance: DEXAMETHASONE SODIUM SUCCINATE
     Dates: start: 20210302, end: 20210302
  1358. DEXAMETHASONE SODIUM SUCCINATE [Concomitant]
     Active Substance: DEXAMETHASONE SODIUM SUCCINATE
     Dates: start: 20210302, end: 20210302
  1359. DEXAMETHASONE SODIUM SUCCINATE [Concomitant]
     Active Substance: DEXAMETHASONE SODIUM SUCCINATE
     Dates: start: 20210323, end: 20210323
  1360. DEXAMETHASONE SODIUM SUCCINATE [Concomitant]
     Active Substance: DEXAMETHASONE SODIUM SUCCINATE
     Indication: Product used for unknown indication
     Dates: start: 20210323, end: 20210323
  1361. DEXAMETHASONE SODIUM SUCCINATE [Concomitant]
     Active Substance: DEXAMETHASONE SODIUM SUCCINATE
     Dates: start: 20210323, end: 20210323
  1362. DEXAMETHASONE SODIUM SUCCINATE [Concomitant]
     Active Substance: DEXAMETHASONE SODIUM SUCCINATE
     Dates: start: 20210323, end: 20210323
  1363. DEXAMETHASONE SODIUM SUCCINATE [Concomitant]
     Active Substance: DEXAMETHASONE SODIUM SUCCINATE
     Dates: start: 20210209, end: 20210209
  1364. DEXAMETHASONE SODIUM SUCCINATE [Concomitant]
     Active Substance: DEXAMETHASONE SODIUM SUCCINATE
     Dates: start: 20210209, end: 20210209
  1365. DEXAMETHASONE SODIUM SUCCINATE [Concomitant]
     Active Substance: DEXAMETHASONE SODIUM SUCCINATE
     Dates: start: 20210323, end: 20210323
  1366. DEXAMETHASONE SODIUM SUCCINATE [Concomitant]
     Active Substance: DEXAMETHASONE SODIUM SUCCINATE
     Dates: start: 20210302, end: 20210302
  1367. DEXAMETHASONE SODIUM SUCCINATE [Concomitant]
     Active Substance: DEXAMETHASONE SODIUM SUCCINATE
     Dates: start: 20210302, end: 20210302
  1368. DEXAMETHASONE SODIUM SUCCINATE [Concomitant]
     Active Substance: DEXAMETHASONE SODIUM SUCCINATE
     Dates: start: 20210302, end: 20210302
  1369. DEXAMETHASONE SODIUM SUCCINATE [Concomitant]
     Active Substance: DEXAMETHASONE SODIUM SUCCINATE
     Dates: start: 20210302, end: 20210302
  1370. DEXAMETHASONE SODIUM SUCCINATE [Concomitant]
     Active Substance: DEXAMETHASONE SODIUM SUCCINATE
     Dates: start: 20210209, end: 20210209
  1371. DEXAMETHASONE SODIUM SUCCINATE [Concomitant]
     Active Substance: DEXAMETHASONE SODIUM SUCCINATE
     Dates: start: 20210209, end: 20210209
  1372. DEXAMETHASONE SODIUM SUCCINATE [Concomitant]
     Active Substance: DEXAMETHASONE SODIUM SUCCINATE
     Dates: start: 20210323, end: 20210323
  1373. DEXAMETHASONE SODIUM SUCCINATE [Concomitant]
     Active Substance: DEXAMETHASONE SODIUM SUCCINATE
     Dates: start: 20210323, end: 20210323
  1374. DEXAMETHASONE SODIUM SUCCINATE [Concomitant]
     Active Substance: DEXAMETHASONE SODIUM SUCCINATE
     Route: 042
     Dates: start: 20210302, end: 20210302
  1375. DEXAMETHASONE SODIUM SUCCINATE [Concomitant]
     Active Substance: DEXAMETHASONE SODIUM SUCCINATE
     Route: 065
     Dates: start: 20210302, end: 20210302
  1376. DEXAMETHASONE SODIUM SUCCINATE [Concomitant]
     Active Substance: DEXAMETHASONE SODIUM SUCCINATE
     Dates: start: 20210209, end: 20210209
  1377. DEXAMETHASONE SODIUM SUCCINATE [Concomitant]
     Active Substance: DEXAMETHASONE SODIUM SUCCINATE
     Dates: start: 20210209, end: 20210209
  1378. DEXAMETHASONE SODIUM SUCCINATE [Concomitant]
     Active Substance: DEXAMETHASONE SODIUM SUCCINATE
     Route: 065
     Dates: start: 20210219, end: 20210219
  1379. DEXAMETHASONE SODIUM SUCCINATE [Concomitant]
     Active Substance: DEXAMETHASONE SODIUM SUCCINATE
     Route: 042
     Dates: start: 20210323, end: 20210323
  1380. DEXAMETHASONE SODIUM SUCCINATE [Concomitant]
     Active Substance: DEXAMETHASONE SODIUM SUCCINATE
     Dates: start: 20210119, end: 20210119
  1381. DEXAMETHASONE SODIUM SUCCINATE [Concomitant]
     Active Substance: DEXAMETHASONE SODIUM SUCCINATE
     Dates: start: 20210302, end: 20210302
  1382. FILGRASTIM [Concomitant]
     Active Substance: FILGRASTIM
     Indication: Prophylaxis
     Dates: start: 20201129, end: 20201206
  1383. FILGRASTIM [Concomitant]
     Active Substance: FILGRASTIM
     Dates: start: 20201220
  1384. FILGRASTIM [Concomitant]
     Active Substance: FILGRASTIM
     Dates: start: 20201220
  1385. FILGRASTIM [Concomitant]
     Active Substance: FILGRASTIM
     Dates: start: 20201220
  1386. FILGRASTIM [Concomitant]
     Active Substance: FILGRASTIM
     Dates: start: 20201129, end: 20201206
  1387. FILGRASTIM [Concomitant]
     Active Substance: FILGRASTIM
     Dates: start: 20201129, end: 20201206
  1388. FILGRASTIM [Concomitant]
     Active Substance: FILGRASTIM
     Dates: start: 20201129, end: 20201206
  1389. FILGRASTIM [Concomitant]
     Active Substance: FILGRASTIM
     Dates: start: 20201129, end: 20201206
  1390. FILGRASTIM [Concomitant]
     Active Substance: FILGRASTIM
     Dates: start: 20201220
  1391. FILGRASTIM [Concomitant]
     Active Substance: FILGRASTIM
     Dates: start: 20201129, end: 20201206
  1392. FILGRASTIM [Concomitant]
     Active Substance: FILGRASTIM
     Dates: start: 20201220
  1393. FILGRASTIM [Concomitant]
     Active Substance: FILGRASTIM
     Dates: start: 20201220
  1394. FILGRASTIM [Concomitant]
     Active Substance: FILGRASTIM
     Dates: start: 20201129, end: 20201206
  1395. FILGRASTIM [Concomitant]
     Active Substance: FILGRASTIM
     Dates: start: 20201129, end: 20201206
  1396. FILGRASTIM [Concomitant]
     Active Substance: FILGRASTIM
     Dates: start: 20201220
  1397. FILGRASTIM [Concomitant]
     Active Substance: FILGRASTIM
     Dates: start: 20201129, end: 20201206
  1398. FILGRASTIM [Concomitant]
     Active Substance: FILGRASTIM
     Dates: start: 20201220
  1399. FILGRASTIM [Concomitant]
     Active Substance: FILGRASTIM
     Dates: start: 20201220
  1400. FILGRASTIM [Concomitant]
     Active Substance: FILGRASTIM
     Dates: start: 20201129, end: 20201206
  1401. FILGRASTIM [Concomitant]
     Active Substance: FILGRASTIM
     Dates: start: 20201129, end: 20201206
  1402. FILGRASTIM [Concomitant]
     Active Substance: FILGRASTIM
     Dates: start: 20201220
  1403. FILGRASTIM [Concomitant]
     Active Substance: FILGRASTIM
     Dates: start: 20201129, end: 20201206
  1404. FILGRASTIM [Concomitant]
     Active Substance: FILGRASTIM
     Dates: start: 20201129, end: 20201206
  1405. FILGRASTIM [Concomitant]
     Active Substance: FILGRASTIM
     Dates: start: 20201129, end: 20201206
  1406. FILGRASTIM [Concomitant]
     Active Substance: FILGRASTIM
     Dates: start: 20201129, end: 20201206
  1407. FILGRASTIM [Concomitant]
     Active Substance: FILGRASTIM
     Dates: start: 20201129, end: 20201206
  1408. FILGRASTIM [Concomitant]
     Active Substance: FILGRASTIM
     Dates: start: 20201129, end: 20201206
  1409. FILGRASTIM [Concomitant]
     Active Substance: FILGRASTIM
     Dates: start: 20201129, end: 20201206
  1410. FILGRASTIM [Concomitant]
     Active Substance: FILGRASTIM
     Dates: start: 20201129, end: 20201206
  1411. FILGRASTIM [Concomitant]
     Active Substance: FILGRASTIM
     Dates: start: 20201220
  1412. FILGRASTIM [Concomitant]
     Active Substance: FILGRASTIM
     Indication: Prophylaxis
     Route: 065
     Dates: start: 20201129, end: 20201206
  1413. FILGRASTIM [Concomitant]
     Active Substance: FILGRASTIM
     Route: 065
     Dates: start: 20201220, end: 20210513
  1414. FILGRASTIM [Concomitant]
     Active Substance: FILGRASTIM
     Route: 065
     Dates: start: 20201220
  1415. FILGRASTIM [Concomitant]
     Active Substance: FILGRASTIM
     Indication: Prophylaxis
     Route: 065
     Dates: start: 20201220
  1416. FILGRASTIM [Concomitant]
     Active Substance: FILGRASTIM
     Route: 065
     Dates: start: 20201129, end: 20201206
  1417. FILGRASTIM [Concomitant]
     Active Substance: FILGRASTIM
     Indication: Prophylaxis
     Route: 065
     Dates: start: 20201220
  1418. FILGRASTIM [Concomitant]
     Active Substance: FILGRASTIM
     Route: 065
     Dates: start: 20201220
  1419. FILGRASTIM [Concomitant]
     Active Substance: FILGRASTIM
     Route: 065
     Dates: start: 20201129, end: 20201206
  1420. FILGRASTIM [Concomitant]
     Active Substance: FILGRASTIM
     Route: 065
     Dates: start: 20201129, end: 20201206
  1421. FILGRASTIM [Concomitant]
     Active Substance: FILGRASTIM
     Route: 065
     Dates: start: 20201129, end: 20201206
  1422. FILGRASTIM [Concomitant]
     Active Substance: FILGRASTIM
     Route: 065
     Dates: start: 20201129, end: 20201206
  1423. FILGRASTIM [Concomitant]
     Active Substance: FILGRASTIM
     Route: 065
     Dates: start: 20201220
  1424. FILGRASTIM [Concomitant]
     Active Substance: FILGRASTIM
     Route: 065
     Dates: start: 20201129, end: 20201206
  1425. FILGRASTIM [Concomitant]
     Active Substance: FILGRASTIM
     Route: 065
     Dates: start: 20201129, end: 20201206
  1426. FILGRASTIM [Concomitant]
     Active Substance: FILGRASTIM
     Route: 065
     Dates: start: 20201220
  1427. FILGRASTIM [Concomitant]
     Active Substance: FILGRASTIM
     Route: 065
     Dates: start: 20201206, end: 20201220
  1428. FILGRASTIM [Concomitant]
     Active Substance: FILGRASTIM
     Route: 065
     Dates: start: 20201220
  1429. FILGRASTIM [Concomitant]
     Active Substance: FILGRASTIM
     Route: 065
     Dates: start: 20201220
  1430. FILGRASTIM [Concomitant]
     Active Substance: FILGRASTIM
     Route: 065
     Dates: start: 20201206, end: 20201220
  1431. FILGRASTIM [Concomitant]
     Active Substance: FILGRASTIM
     Route: 065
     Dates: start: 20201220
  1432. FILGRASTIM [Concomitant]
     Active Substance: FILGRASTIM
     Route: 065
     Dates: start: 20201220
  1433. FILGRASTIM [Concomitant]
     Active Substance: FILGRASTIM
     Route: 065
     Dates: start: 20201129, end: 20201206
  1434. FILGRASTIM [Concomitant]
     Active Substance: FILGRASTIM
     Route: 065
     Dates: start: 20201129, end: 20201206
  1435. FILGRASTIM [Concomitant]
     Active Substance: FILGRASTIM
     Route: 065
     Dates: start: 20201129, end: 20201206
  1436. FILGRASTIM [Concomitant]
     Active Substance: FILGRASTIM
     Route: 065
     Dates: start: 20201129, end: 20201206
  1437. FILGRASTIM [Concomitant]
     Active Substance: FILGRASTIM
     Dates: start: 20201220
  1438. FILGRASTIM [Concomitant]
     Active Substance: FILGRASTIM
     Dates: start: 20201220
  1439. FILGRASTIM [Concomitant]
     Active Substance: FILGRASTIM
     Dates: start: 20201220
  1440. FILGRASTIM [Concomitant]
     Active Substance: FILGRASTIM
     Dates: start: 20201129, end: 20201206
  1441. FILGRASTIM [Concomitant]
     Active Substance: FILGRASTIM
     Dates: start: 20201129, end: 20201206
  1442. FILGRASTIM [Concomitant]
     Active Substance: FILGRASTIM
     Dates: start: 20201129, end: 20201206
  1443. FILGRASTIM [Concomitant]
     Active Substance: FILGRASTIM
     Dates: start: 20201220
  1444. FILGRASTIM [Concomitant]
     Active Substance: FILGRASTIM
     Dates: start: 20201129, end: 20201206
  1445. FILGRASTIM [Concomitant]
     Active Substance: FILGRASTIM
     Dates: start: 20201129, end: 20201206
  1446. FILGRASTIM [Concomitant]
     Active Substance: FILGRASTIM
     Dates: start: 20201129, end: 20201206
  1447. FILGRASTIM [Concomitant]
     Active Substance: FILGRASTIM
     Dates: start: 20201129, end: 20201206
  1448. FILGRASTIM [Concomitant]
     Active Substance: FILGRASTIM
     Dates: start: 20201129, end: 20201206
  1449. OMEPRAZOLE [Concomitant]
     Active Substance: OMEPRAZOLE
     Indication: Gastrointestinal disorder prophylaxis
     Route: 050
     Dates: start: 20201118
  1450. OMEPRAZOLE [Concomitant]
     Active Substance: OMEPRAZOLE
     Route: 065
  1451. OMEPRAZOLE [Concomitant]
     Active Substance: OMEPRAZOLE
     Route: 065
     Dates: start: 20201118
  1452. OMEPRAZOLE [Concomitant]
     Active Substance: OMEPRAZOLE
     Dates: start: 20201118
  1453. OMEPRAZOLE [Concomitant]
     Active Substance: OMEPRAZOLE
     Dates: start: 20201118
  1454. OMEPRAZOLE [Concomitant]
     Active Substance: OMEPRAZOLE
  1455. OMEPRAZOLE [Concomitant]
     Active Substance: OMEPRAZOLE
  1456. OMEPRAZOLE [Concomitant]
     Active Substance: OMEPRAZOLE
     Dates: start: 20201118
  1457. OMEPRAZOLE [Concomitant]
     Active Substance: OMEPRAZOLE
  1458. OMEPRAZOLE [Concomitant]
     Active Substance: OMEPRAZOLE
  1459. OMEPRAZOLE [Concomitant]
     Active Substance: OMEPRAZOLE
  1460. OMEPRAZOLE [Concomitant]
     Active Substance: OMEPRAZOLE
  1461. OMEPRAZOLE [Concomitant]
     Active Substance: OMEPRAZOLE
  1462. OMEPRAZOLE [Concomitant]
     Active Substance: OMEPRAZOLE
  1463. OMEPRAZOLE [Concomitant]
     Active Substance: OMEPRAZOLE
  1464. OMEPRAZOLE [Concomitant]
     Active Substance: OMEPRAZOLE
  1465. OMEPRAZOLE [Concomitant]
     Active Substance: OMEPRAZOLE
  1466. OMEPRAZOLE [Concomitant]
     Active Substance: OMEPRAZOLE
  1467. OMEPRAZOLE [Concomitant]
     Active Substance: OMEPRAZOLE
  1468. OMEPRAZOLE [Concomitant]
     Active Substance: OMEPRAZOLE
  1469. OMEPRAZOLE [Concomitant]
     Active Substance: OMEPRAZOLE
  1470. OMEPRAZOLE [Concomitant]
     Active Substance: OMEPRAZOLE
  1471. OMEPRAZOLE [Concomitant]
     Active Substance: OMEPRAZOLE
     Dates: start: 20201118
  1472. OMEPRAZOLE [Concomitant]
     Active Substance: OMEPRAZOLE
     Indication: Gastrointestinal disorder prophylaxis
  1473. OMEPRAZOLE [Concomitant]
     Active Substance: OMEPRAZOLE
     Indication: Product used for unknown indication
     Route: 050
     Dates: start: 20201118
  1474. OMEPRAZOLE [Concomitant]
     Active Substance: OMEPRAZOLE
     Route: 065
  1475. OMEPRAZOLE [Concomitant]
     Active Substance: OMEPRAZOLE
     Route: 065
  1476. OMEPRAZOLE [Concomitant]
     Active Substance: OMEPRAZOLE
     Route: 065
     Dates: start: 20201118
  1477. OMEPRAZOLE [Concomitant]
     Active Substance: OMEPRAZOLE
     Route: 065
  1478. OMEPRAZOLE [Concomitant]
     Active Substance: OMEPRAZOLE
     Route: 065
  1479. OMEPRAZOLE [Concomitant]
     Active Substance: OMEPRAZOLE
     Route: 065
  1480. OMEPRAZOLE [Concomitant]
     Active Substance: OMEPRAZOLE
     Route: 065
     Dates: start: 20201118
  1481. OMEPRAZOLE [Concomitant]
     Active Substance: OMEPRAZOLE
     Route: 065
  1482. OMEPRAZOLE [Concomitant]
     Active Substance: OMEPRAZOLE
     Route: 065
  1483. OMEPRAZOLE [Concomitant]
     Active Substance: OMEPRAZOLE
     Route: 065
  1484. OMEPRAZOLE [Concomitant]
     Active Substance: OMEPRAZOLE
     Route: 065
  1485. OMEPRAZOLE [Concomitant]
     Active Substance: OMEPRAZOLE
     Route: 065
  1486. OMEPRAZOLE [Concomitant]
     Active Substance: OMEPRAZOLE
     Route: 065
  1487. OMEPRAZOLE [Concomitant]
     Active Substance: OMEPRAZOLE
     Route: 065
  1488. OMEPRAZOLE [Concomitant]
     Active Substance: OMEPRAZOLE
     Route: 065
  1489. OMEPRAZOLE [Concomitant]
     Active Substance: OMEPRAZOLE
     Route: 065
  1490. OMEPRAZOLE [Concomitant]
     Active Substance: OMEPRAZOLE
     Route: 065
  1491. ACETAMINOPHEN [Concomitant]
     Active Substance: ACETAMINOPHEN
     Indication: Prophylaxis
     Route: 065
     Dates: start: 20201123
  1492. ACETAMINOPHEN [Concomitant]
     Active Substance: ACETAMINOPHEN
     Route: 065
     Dates: start: 20201124, end: 20201124
  1493. ACETAMINOPHEN [Concomitant]
     Active Substance: ACETAMINOPHEN
     Route: 065
     Dates: start: 20201215, end: 20201215
  1494. ACETAMINOPHEN [Concomitant]
     Active Substance: ACETAMINOPHEN
     Route: 065
     Dates: start: 20210119, end: 20210119
  1495. ACETAMINOPHEN [Concomitant]
     Active Substance: ACETAMINOPHEN
     Route: 048
     Dates: start: 20210126, end: 20210126
  1496. ACETAMINOPHEN [Concomitant]
     Active Substance: ACETAMINOPHEN
     Route: 065
     Dates: start: 20210126, end: 20210126
  1497. ACETAMINOPHEN [Concomitant]
     Active Substance: ACETAMINOPHEN
     Route: 050
     Dates: start: 20210126, end: 20210126
  1498. ACETAMINOPHEN [Concomitant]
     Active Substance: ACETAMINOPHEN
     Route: 065
     Dates: start: 20210209, end: 20210209
  1499. ACETAMINOPHEN [Concomitant]
     Active Substance: ACETAMINOPHEN
     Route: 065
     Dates: start: 20210216, end: 20210216
  1500. ACETAMINOPHEN [Concomitant]
     Active Substance: ACETAMINOPHEN
     Route: 065
     Dates: start: 20210302, end: 20210302
  1501. ACETAMINOPHEN [Concomitant]
     Active Substance: ACETAMINOPHEN
     Route: 065
     Dates: start: 20210309, end: 20210309
  1502. ACETAMINOPHEN [Concomitant]
     Active Substance: ACETAMINOPHEN
     Route: 048
     Dates: start: 20210323, end: 20210323
  1503. ACETAMINOPHEN [Concomitant]
     Active Substance: ACETAMINOPHEN
     Route: 065
     Dates: start: 20210323, end: 20210323
  1504. ACETAMINOPHEN [Concomitant]
     Active Substance: ACETAMINOPHEN
     Route: 065
     Dates: start: 20210126, end: 20210126
  1505. ACETAMINOPHEN [Concomitant]
     Active Substance: ACETAMINOPHEN
     Route: 048
     Dates: start: 20201215, end: 20201215
  1506. ACETAMINOPHEN [Concomitant]
     Active Substance: ACETAMINOPHEN
     Route: 048
     Dates: start: 20201124, end: 20201124
  1507. ACETAMINOPHEN [Concomitant]
     Active Substance: ACETAMINOPHEN
     Route: 048
     Dates: start: 20210309, end: 20210309
  1508. ACETAMINOPHEN [Concomitant]
     Active Substance: ACETAMINOPHEN
     Route: 048
     Dates: start: 20210323, end: 20210323
  1509. ACETAMINOPHEN [Concomitant]
     Active Substance: ACETAMINOPHEN
     Route: 048
     Dates: start: 20210302, end: 20210302
  1510. ACETAMINOPHEN [Concomitant]
     Active Substance: ACETAMINOPHEN
     Route: 048
     Dates: start: 20210209, end: 20210209
  1511. ACETAMINOPHEN [Concomitant]
     Active Substance: ACETAMINOPHEN
     Route: 048
     Dates: start: 20210119, end: 20210119
  1512. ACETAMINOPHEN [Concomitant]
     Active Substance: ACETAMINOPHEN
     Route: 048
     Dates: start: 20210216, end: 20210216
  1513. ACETAMINOPHEN [Concomitant]
     Active Substance: ACETAMINOPHEN
     Route: 048
     Dates: start: 20210126, end: 20210126
  1514. ACETAMINOPHEN [Concomitant]
     Active Substance: ACETAMINOPHEN
     Route: 048
     Dates: start: 20201124, end: 20201124
  1515. ACETAMINOPHEN [Concomitant]
     Active Substance: ACETAMINOPHEN
     Dates: start: 20210209, end: 20210209
  1516. ACETAMINOPHEN [Concomitant]
     Active Substance: ACETAMINOPHEN
     Route: 048
     Dates: start: 20210323, end: 20210323
  1517. ACETAMINOPHEN [Concomitant]
     Active Substance: ACETAMINOPHEN
     Dates: start: 20210126, end: 20210126
  1518. ACETAMINOPHEN [Concomitant]
     Active Substance: ACETAMINOPHEN
     Route: 048
     Dates: start: 20210126, end: 20210126
  1519. ACETAMINOPHEN [Concomitant]
     Active Substance: ACETAMINOPHEN
     Route: 065
     Dates: start: 20210323, end: 20210323
  1520. ACETAMINOPHEN [Concomitant]
     Active Substance: ACETAMINOPHEN
     Dates: start: 20201123
  1521. ACETAMINOPHEN [Concomitant]
     Active Substance: ACETAMINOPHEN
     Dates: start: 20201123
  1522. ACETAMINOPHEN [Concomitant]
     Active Substance: ACETAMINOPHEN
     Dates: start: 20201123
  1523. ACETAMINOPHEN [Concomitant]
     Active Substance: ACETAMINOPHEN
     Dates: start: 20210323, end: 20210323
  1524. ACETAMINOPHEN [Concomitant]
     Active Substance: ACETAMINOPHEN
     Dates: start: 20210209, end: 20210209
  1525. ACETAMINOPHEN [Concomitant]
     Active Substance: ACETAMINOPHEN
     Route: 048
     Dates: start: 20201215, end: 20201215
  1526. ACETAMINOPHEN [Concomitant]
     Active Substance: ACETAMINOPHEN
     Route: 048
     Dates: start: 20210119, end: 20210119
  1527. ACETAMINOPHEN [Concomitant]
     Active Substance: ACETAMINOPHEN
     Dates: start: 20210302, end: 20210302
  1528. ACETAMINOPHEN [Concomitant]
     Active Substance: ACETAMINOPHEN
     Dates: start: 20210216, end: 20210216
  1529. ACETAMINOPHEN [Concomitant]
     Active Substance: ACETAMINOPHEN
     Dates: start: 20210309, end: 20210309
  1530. ACETAMINOPHEN [Concomitant]
     Active Substance: ACETAMINOPHEN
     Route: 065
     Dates: start: 20210126, end: 20210126
  1531. ACETAMINOPHEN [Concomitant]
     Active Substance: ACETAMINOPHEN
     Dates: start: 20210309, end: 20210309
  1532. ACETAMINOPHEN [Concomitant]
     Active Substance: ACETAMINOPHEN
     Dates: start: 20210119, end: 20210119
  1533. ACETAMINOPHEN [Concomitant]
     Active Substance: ACETAMINOPHEN
     Route: 065
     Dates: start: 20210126, end: 20210126
  1534. ACETAMINOPHEN [Concomitant]
     Active Substance: ACETAMINOPHEN
     Dates: start: 20210302, end: 20210302
  1535. ACETAMINOPHEN [Concomitant]
     Active Substance: ACETAMINOPHEN
     Dates: start: 20201215, end: 20201215
  1536. ACETAMINOPHEN [Concomitant]
     Active Substance: ACETAMINOPHEN
     Route: 065
     Dates: start: 20210126, end: 20210126
  1537. ACETAMINOPHEN [Concomitant]
     Active Substance: ACETAMINOPHEN
     Dates: start: 20210216, end: 20210216
  1538. ACETAMINOPHEN [Concomitant]
     Active Substance: ACETAMINOPHEN
     Dates: start: 20210309, end: 20210309
  1539. ACETAMINOPHEN [Concomitant]
     Active Substance: ACETAMINOPHEN
     Dates: start: 20210216, end: 20210216
  1540. ACETAMINOPHEN [Concomitant]
     Active Substance: ACETAMINOPHEN
     Route: 065
     Dates: start: 20210216, end: 20210216
  1541. ACETAMINOPHEN [Concomitant]
     Active Substance: ACETAMINOPHEN
     Indication: Prophylaxis
     Dates: start: 20201215, end: 20201215
  1542. ACETAMINOPHEN [Concomitant]
     Active Substance: ACETAMINOPHEN
     Dates: start: 20201215, end: 20201215
  1543. ACETAMINOPHEN [Concomitant]
     Active Substance: ACETAMINOPHEN
     Dates: start: 20210119, end: 20210119
  1544. ACETAMINOPHEN [Concomitant]
     Active Substance: ACETAMINOPHEN
     Dates: start: 20210119, end: 20210119
  1545. ACETAMINOPHEN [Concomitant]
     Active Substance: ACETAMINOPHEN
     Dates: start: 20210126, end: 20210126
  1546. ACETAMINOPHEN [Concomitant]
     Active Substance: ACETAMINOPHEN
     Dates: start: 20201124, end: 20201124
  1547. ACETAMINOPHEN [Concomitant]
     Active Substance: ACETAMINOPHEN
     Dates: start: 20210209, end: 20210209
  1548. ACETAMINOPHEN [Concomitant]
     Active Substance: ACETAMINOPHEN
     Dates: start: 20210126, end: 20210126
  1549. ACETAMINOPHEN [Concomitant]
     Active Substance: ACETAMINOPHEN
     Dates: start: 20210309, end: 20210309
  1550. ACETAMINOPHEN [Concomitant]
     Active Substance: ACETAMINOPHEN
     Dates: start: 20210309, end: 20210309
  1551. ACETAMINOPHEN [Concomitant]
     Active Substance: ACETAMINOPHEN
     Dates: start: 20210302, end: 20210302
  1552. ACETAMINOPHEN [Concomitant]
     Active Substance: ACETAMINOPHEN
     Dates: start: 20210126, end: 20210126
  1553. ACETAMINOPHEN [Concomitant]
     Active Substance: ACETAMINOPHEN
     Dates: start: 20210302, end: 20210302
  1554. ACETAMINOPHEN [Concomitant]
     Active Substance: ACETAMINOPHEN
     Dates: start: 20210119, end: 20210119
  1555. ACETAMINOPHEN [Concomitant]
     Active Substance: ACETAMINOPHEN
     Dates: start: 20210216, end: 20210216
  1556. ACETAMINOPHEN [Concomitant]
     Active Substance: ACETAMINOPHEN
     Dates: start: 20201215, end: 20201215
  1557. ACETAMINOPHEN [Concomitant]
     Active Substance: ACETAMINOPHEN
     Dates: start: 20201124, end: 20201124
  1558. ACETAMINOPHEN [Concomitant]
     Active Substance: ACETAMINOPHEN
     Dates: start: 20210126, end: 20210126
  1559. ACETAMINOPHEN [Concomitant]
     Active Substance: ACETAMINOPHEN
     Route: 048
     Dates: start: 20210302, end: 20210302
  1560. ACETAMINOPHEN [Concomitant]
     Active Substance: ACETAMINOPHEN
     Dates: start: 20210209, end: 20210209
  1561. ACETAMINOPHEN [Concomitant]
     Active Substance: ACETAMINOPHEN
     Dates: start: 20210126, end: 20210126
  1562. ACETAMINOPHEN [Concomitant]
     Active Substance: ACETAMINOPHEN
     Route: 048
     Dates: start: 20210309, end: 20210309
  1563. ACETAMINOPHEN [Concomitant]
     Active Substance: ACETAMINOPHEN
     Dates: start: 20210126, end: 20210126
  1564. ACETAMINOPHEN [Concomitant]
     Active Substance: ACETAMINOPHEN
     Dates: start: 20210216, end: 20210216
  1565. ACETAMINOPHEN [Concomitant]
     Active Substance: ACETAMINOPHEN
     Dates: start: 20210216, end: 20210216
  1566. ACETAMINOPHEN [Concomitant]
     Active Substance: ACETAMINOPHEN
     Dates: start: 20210302, end: 20210302
  1567. ACETAMINOPHEN [Concomitant]
     Active Substance: ACETAMINOPHEN
     Dates: start: 20210302, end: 20210302
  1568. ACETAMINOPHEN [Concomitant]
     Active Substance: ACETAMINOPHEN
     Dates: start: 20201124, end: 20201124
  1569. ACETAMINOPHEN [Concomitant]
     Active Substance: ACETAMINOPHEN
     Dates: start: 20201124, end: 20201124
  1570. ACETAMINOPHEN [Concomitant]
     Active Substance: ACETAMINOPHEN
     Dates: start: 20210119, end: 20210119
  1571. ACETAMINOPHEN [Concomitant]
     Active Substance: ACETAMINOPHEN
     Dates: start: 20210119, end: 20210119
  1572. ACETAMINOPHEN [Concomitant]
     Active Substance: ACETAMINOPHEN
     Dates: start: 20201215, end: 20201215
  1573. ACETAMINOPHEN [Concomitant]
     Active Substance: ACETAMINOPHEN
     Dates: start: 20201215, end: 20201215
  1574. ACETAMINOPHEN [Concomitant]
     Active Substance: ACETAMINOPHEN
     Route: 048
     Dates: start: 20210309, end: 20210309
  1575. ACETAMINOPHEN [Concomitant]
     Active Substance: ACETAMINOPHEN
     Dates: start: 20210309, end: 20210309
  1576. ACETAMINOPHEN [Concomitant]
     Active Substance: ACETAMINOPHEN
     Dates: start: 20210209, end: 20210209
  1577. ACETAMINOPHEN [Concomitant]
     Active Substance: ACETAMINOPHEN
     Dates: start: 20210209, end: 20210209
  1578. ACETAMINOPHEN [Concomitant]
     Active Substance: ACETAMINOPHEN
     Dates: start: 20210126, end: 20210126
  1579. ACETAMINOPHEN [Concomitant]
     Active Substance: ACETAMINOPHEN
     Dates: start: 20210126, end: 20210126
  1580. ACETAMINOPHEN [Concomitant]
     Active Substance: ACETAMINOPHEN
     Dates: start: 20210126, end: 20210126
  1581. ACETAMINOPHEN [Concomitant]
     Active Substance: ACETAMINOPHEN
     Dates: start: 20210126, end: 20210126
  1582. ACETAMINOPHEN [Concomitant]
     Active Substance: ACETAMINOPHEN
     Dates: start: 20201124, end: 20201124
  1583. ACETAMINOPHEN [Concomitant]
     Active Substance: ACETAMINOPHEN
     Dates: start: 20201124, end: 20201124
  1584. ACETAMINOPHEN [Concomitant]
     Active Substance: ACETAMINOPHEN
     Dates: start: 20210323, end: 20210323
  1585. ACETAMINOPHEN [Concomitant]
     Active Substance: ACETAMINOPHEN
     Dates: start: 20210323, end: 20210323
  1586. ACETAMINOPHEN [Concomitant]
     Active Substance: ACETAMINOPHEN
     Dates: start: 20210309, end: 20210309
  1587. ACETAMINOPHEN [Concomitant]
     Active Substance: ACETAMINOPHEN
     Dates: start: 20210309, end: 20210309
  1588. ACETAMINOPHEN [Concomitant]
     Active Substance: ACETAMINOPHEN
     Dates: start: 20210126, end: 20210126
  1589. ACETAMINOPHEN [Concomitant]
     Active Substance: ACETAMINOPHEN
     Dates: start: 20210126, end: 20210126
  1590. ACETAMINOPHEN [Concomitant]
     Active Substance: ACETAMINOPHEN
     Dates: start: 20210119, end: 20210119
  1591. ACETAMINOPHEN [Concomitant]
     Active Substance: ACETAMINOPHEN
     Indication: Prophylaxis
     Dates: start: 20210119, end: 20210119
  1592. ACETAMINOPHEN [Concomitant]
     Active Substance: ACETAMINOPHEN
     Dates: start: 20210209, end: 20210209
  1593. ACETAMINOPHEN [Concomitant]
     Active Substance: ACETAMINOPHEN
     Dates: start: 20210209, end: 20210209
  1594. ACETAMINOPHEN [Concomitant]
     Active Substance: ACETAMINOPHEN
     Dates: start: 20210216, end: 20210216
  1595. ACETAMINOPHEN [Concomitant]
     Active Substance: ACETAMINOPHEN
     Route: 048
     Dates: start: 20210216, end: 20210216
  1596. ACETAMINOPHEN [Concomitant]
     Active Substance: ACETAMINOPHEN
     Dates: start: 20201215, end: 20201215
  1597. ACETAMINOPHEN [Concomitant]
     Active Substance: ACETAMINOPHEN
     Dates: start: 20201215, end: 20201215
  1598. ACETAMINOPHEN [Concomitant]
     Active Substance: ACETAMINOPHEN
     Dates: start: 20210302, end: 20210302
  1599. ACETAMINOPHEN [Concomitant]
     Active Substance: ACETAMINOPHEN
     Dates: start: 20210302, end: 20210302
  1600. ACETAMINOPHEN [Concomitant]
     Active Substance: ACETAMINOPHEN
     Dates: start: 20201215, end: 20201215
  1601. ACETAMINOPHEN [Concomitant]
     Active Substance: ACETAMINOPHEN
     Dates: start: 20210126, end: 20210126
  1602. ACETAMINOPHEN [Concomitant]
     Active Substance: ACETAMINOPHEN
     Dates: start: 20210126, end: 20210126
  1603. ACETAMINOPHEN [Concomitant]
     Active Substance: ACETAMINOPHEN
     Dates: start: 20201215, end: 20201215
  1604. ACETAMINOPHEN [Concomitant]
     Active Substance: ACETAMINOPHEN
     Dates: start: 20201123
  1605. ACETAMINOPHEN [Concomitant]
     Active Substance: ACETAMINOPHEN
     Dates: start: 20201124, end: 20201124
  1606. ACETAMINOPHEN [Concomitant]
     Active Substance: ACETAMINOPHEN
     Dates: start: 20210126, end: 20210126
  1607. ACETAMINOPHEN [Concomitant]
     Active Substance: ACETAMINOPHEN
     Route: 048
     Dates: start: 20210209, end: 20210209
  1608. ACETAMINOPHEN [Concomitant]
     Active Substance: ACETAMINOPHEN
     Route: 048
     Dates: start: 20210126, end: 20210126
  1609. ACETAMINOPHEN [Concomitant]
     Active Substance: ACETAMINOPHEN
     Dates: start: 20210302, end: 20210302
  1610. ACETAMINOPHEN [Concomitant]
     Active Substance: ACETAMINOPHEN
     Dates: start: 20210309, end: 20210309
  1611. ACETAMINOPHEN [Concomitant]
     Active Substance: ACETAMINOPHEN
     Dates: start: 20201123
  1612. ACETAMINOPHEN [Concomitant]
     Active Substance: ACETAMINOPHEN
     Dates: start: 20201123
  1613. ACETAMINOPHEN [Concomitant]
     Active Substance: ACETAMINOPHEN
     Route: 048
     Dates: start: 20210323, end: 20210323
  1614. ACETAMINOPHEN [Concomitant]
     Active Substance: ACETAMINOPHEN
     Route: 048
     Dates: start: 20210119, end: 20210119
  1615. ACETAMINOPHEN [Concomitant]
     Active Substance: ACETAMINOPHEN
     Route: 065
     Dates: start: 20201123
  1616. ACETAMINOPHEN [Concomitant]
     Active Substance: ACETAMINOPHEN
     Route: 048
     Dates: start: 20210209, end: 20210209
  1617. ACETAMINOPHEN [Concomitant]
     Active Substance: ACETAMINOPHEN
     Route: 048
     Dates: start: 20210126, end: 20210126
  1618. ACETAMINOPHEN [Concomitant]
     Active Substance: ACETAMINOPHEN
     Route: 048
     Dates: start: 20210309, end: 20210309
  1619. ACETAMINOPHEN [Concomitant]
     Active Substance: ACETAMINOPHEN
     Route: 048
     Dates: start: 20201215, end: 20201215
  1620. ACETAMINOPHEN [Concomitant]
     Active Substance: ACETAMINOPHEN
     Route: 048
     Dates: start: 20210216, end: 20210216
  1621. ACETAMINOPHEN [Concomitant]
     Active Substance: ACETAMINOPHEN
     Route: 048
     Dates: start: 20210302, end: 20210302
  1622. ACETAMINOPHEN [Concomitant]
     Active Substance: ACETAMINOPHEN
     Route: 048
     Dates: start: 20201124, end: 20201124
  1623. ACETAMINOPHEN [Concomitant]
     Active Substance: ACETAMINOPHEN
     Route: 048
     Dates: start: 20210323, end: 20210323
  1624. ACETAMINOPHEN [Concomitant]
     Active Substance: ACETAMINOPHEN
     Route: 048
     Dates: start: 20210123, end: 20210123
  1625. ACETAMINOPHEN [Concomitant]
     Active Substance: ACETAMINOPHEN
     Dates: start: 20201123
  1626. ACETAMINOPHEN [Concomitant]
     Active Substance: ACETAMINOPHEN
     Indication: Prophylaxis
     Route: 048
     Dates: start: 20210119, end: 20210119
  1627. ACETAMINOPHEN [Concomitant]
     Active Substance: ACETAMINOPHEN
     Route: 050
     Dates: start: 20210216, end: 20210216
  1628. ACETAMINOPHEN [Concomitant]
     Active Substance: ACETAMINOPHEN
     Route: 048
     Dates: start: 20201124, end: 20201124
  1629. ACETAMINOPHEN [Concomitant]
     Active Substance: ACETAMINOPHEN
     Route: 050
     Dates: start: 20210126, end: 20210126
  1630. ACETAMINOPHEN [Concomitant]
     Active Substance: ACETAMINOPHEN
     Route: 050
     Dates: start: 20210323, end: 20210323
  1631. ACETAMINOPHEN [Concomitant]
     Active Substance: ACETAMINOPHEN
     Route: 048
     Dates: start: 20210126, end: 20210126
  1632. ACETAMINOPHEN [Concomitant]
     Active Substance: ACETAMINOPHEN
     Route: 050
     Dates: start: 20210309, end: 20210309
  1633. ACETAMINOPHEN [Concomitant]
     Active Substance: ACETAMINOPHEN
     Route: 050
     Dates: start: 20201123
  1634. ACETAMINOPHEN [Concomitant]
     Active Substance: ACETAMINOPHEN
     Route: 048
     Dates: start: 20201215, end: 20201215
  1635. ACETAMINOPHEN [Concomitant]
     Active Substance: ACETAMINOPHEN
     Route: 050
     Dates: start: 20210302, end: 20210302
  1636. ACETAMINOPHEN [Concomitant]
     Active Substance: ACETAMINOPHEN
     Route: 050
     Dates: start: 20210209, end: 20210209
  1637. ACETAMINOPHEN [Concomitant]
     Active Substance: ACETAMINOPHEN
     Route: 048
     Dates: start: 20210323, end: 20210323
  1638. ACETAMINOPHEN [Concomitant]
     Active Substance: ACETAMINOPHEN
     Route: 065
     Dates: start: 20210216, end: 20210216
  1639. ACETAMINOPHEN [Concomitant]
     Active Substance: ACETAMINOPHEN
     Route: 065
     Dates: start: 20201124, end: 20201124
  1640. ACETAMINOPHEN [Concomitant]
     Active Substance: ACETAMINOPHEN
     Route: 048
     Dates: start: 20210209, end: 20210209
  1641. ACETAMINOPHEN [Concomitant]
     Active Substance: ACETAMINOPHEN
     Route: 065
     Dates: start: 20210302, end: 20210302
  1642. ACETAMINOPHEN [Concomitant]
     Active Substance: ACETAMINOPHEN
     Route: 048
     Dates: start: 20210126, end: 20210126
  1643. ACETAMINOPHEN [Concomitant]
     Active Substance: ACETAMINOPHEN
     Route: 065
     Dates: start: 20210216, end: 20210216
  1644. ACETAMINOPHEN [Concomitant]
     Active Substance: ACETAMINOPHEN
     Route: 048
     Dates: start: 20201215, end: 20201215
  1645. ACETAMINOPHEN [Concomitant]
     Active Substance: ACETAMINOPHEN
     Route: 048
     Dates: start: 20210119, end: 20210119
  1646. ACETAMINOPHEN [Concomitant]
     Active Substance: ACETAMINOPHEN
     Route: 065
     Dates: start: 20201124, end: 20201124
  1647. ACETAMINOPHEN [Concomitant]
     Active Substance: ACETAMINOPHEN
     Route: 065
     Dates: start: 20201123, end: 20201123
  1648. ACETAMINOPHEN [Concomitant]
     Active Substance: ACETAMINOPHEN
     Route: 065
     Dates: start: 20210126, end: 20210126
  1649. ACETAMINOPHEN [Concomitant]
     Active Substance: ACETAMINOPHEN
     Route: 065
     Dates: start: 20201215, end: 20201215
  1650. ACETAMINOPHEN [Concomitant]
     Active Substance: ACETAMINOPHEN
     Route: 065
     Dates: start: 20210126, end: 20210126
  1651. ACETAMINOPHEN [Concomitant]
     Active Substance: ACETAMINOPHEN
     Route: 065
     Dates: start: 20210323, end: 20210323
  1652. ACETAMINOPHEN [Concomitant]
     Active Substance: ACETAMINOPHEN
     Route: 065
     Dates: start: 20201123, end: 20201123
  1653. ACETAMINOPHEN [Concomitant]
     Active Substance: ACETAMINOPHEN
     Route: 048
     Dates: start: 20201215, end: 20201215
  1654. ACETAMINOPHEN [Concomitant]
     Active Substance: ACETAMINOPHEN
     Route: 065
     Dates: start: 20210302, end: 20210302
  1655. ACETAMINOPHEN [Concomitant]
     Active Substance: ACETAMINOPHEN
     Route: 065
     Dates: start: 20210209, end: 20210209
  1656. ACETAMINOPHEN [Concomitant]
     Active Substance: ACETAMINOPHEN
     Route: 065
     Dates: start: 20210216, end: 20210216
  1657. ACETAMINOPHEN [Concomitant]
     Active Substance: ACETAMINOPHEN
     Route: 065
     Dates: start: 20201215, end: 20201215
  1658. ACETAMINOPHEN [Concomitant]
     Active Substance: ACETAMINOPHEN
     Route: 065
     Dates: start: 20201215, end: 20201215
  1659. ACETAMINOPHEN [Concomitant]
     Active Substance: ACETAMINOPHEN
     Route: 065
     Dates: start: 20201123, end: 20201123
  1660. ACETAMINOPHEN [Concomitant]
     Active Substance: ACETAMINOPHEN
     Route: 065
     Dates: start: 20210323, end: 20210323
  1661. ACETAMINOPHEN [Concomitant]
     Active Substance: ACETAMINOPHEN
     Route: 065
     Dates: start: 20201123, end: 20201123
  1662. ACETAMINOPHEN [Concomitant]
     Active Substance: ACETAMINOPHEN
     Route: 065
     Dates: start: 20210119, end: 20210119
  1663. ACETAMINOPHEN [Concomitant]
     Active Substance: ACETAMINOPHEN
     Route: 065
     Dates: start: 20201123, end: 20201123
  1664. ACETAMINOPHEN [Concomitant]
     Active Substance: ACETAMINOPHEN
     Route: 048
     Dates: start: 20201124, end: 20201124
  1665. ACETAMINOPHEN [Concomitant]
     Active Substance: ACETAMINOPHEN
     Route: 065
     Dates: start: 20210209, end: 20210209
  1666. ACETAMINOPHEN [Concomitant]
     Active Substance: ACETAMINOPHEN
     Route: 065
     Dates: start: 20210126, end: 20210126
  1667. ACETAMINOPHEN [Concomitant]
     Active Substance: ACETAMINOPHEN
     Route: 065
     Dates: start: 20210323, end: 20210323
  1668. ACETAMINOPHEN [Concomitant]
     Active Substance: ACETAMINOPHEN
     Route: 065
     Dates: start: 20210309, end: 20210309
  1669. ACETAMINOPHEN [Concomitant]
     Active Substance: ACETAMINOPHEN
     Route: 048
     Dates: start: 20210119, end: 20210119
  1670. ACETAMINOPHEN [Concomitant]
     Active Substance: ACETAMINOPHEN
     Route: 065
     Dates: start: 20201124, end: 20201124
  1671. ACETAMINOPHEN [Concomitant]
     Active Substance: ACETAMINOPHEN
     Route: 048
     Dates: start: 20210216, end: 20210216
  1672. ACETAMINOPHEN [Concomitant]
     Active Substance: ACETAMINOPHEN
     Route: 048
     Dates: start: 20210309, end: 20210309
  1673. ACETAMINOPHEN [Concomitant]
     Active Substance: ACETAMINOPHEN
     Route: 048
     Dates: start: 20210302, end: 20210302
  1674. ACETAMINOPHEN [Concomitant]
     Active Substance: ACETAMINOPHEN
     Route: 065
     Dates: start: 20210309, end: 20210309
  1675. ACETAMINOPHEN [Concomitant]
     Active Substance: ACETAMINOPHEN
     Route: 065
     Dates: start: 20210323, end: 20210323
  1676. ACETAMINOPHEN [Concomitant]
     Active Substance: ACETAMINOPHEN
     Indication: Prophylaxis
     Route: 065
     Dates: start: 20210309, end: 20210309
  1677. ACETAMINOPHEN [Concomitant]
     Active Substance: ACETAMINOPHEN
     Route: 065
     Dates: start: 20210216, end: 20210216
  1678. ACETAMINOPHEN [Concomitant]
     Active Substance: ACETAMINOPHEN
     Route: 065
     Dates: start: 20201123
  1679. ACETAMINOPHEN [Concomitant]
     Active Substance: ACETAMINOPHEN
     Route: 048
     Dates: start: 20210126, end: 20210126
  1680. ACETAMINOPHEN [Concomitant]
     Active Substance: ACETAMINOPHEN
     Route: 065
     Dates: start: 20210209, end: 20210209
  1681. ACETAMINOPHEN [Concomitant]
     Active Substance: ACETAMINOPHEN
     Route: 065
     Dates: start: 20210126, end: 20210126
  1682. ACETAMINOPHEN [Concomitant]
     Active Substance: ACETAMINOPHEN
     Route: 065
     Dates: start: 20210309, end: 20210309
  1683. ACETAMINOPHEN [Concomitant]
     Active Substance: ACETAMINOPHEN
     Route: 065
     Dates: start: 20210126, end: 20210126
  1684. ACETAMINOPHEN [Concomitant]
     Active Substance: ACETAMINOPHEN
     Route: 065
     Dates: start: 20210309, end: 20210309
  1685. ACETAMINOPHEN [Concomitant]
     Active Substance: ACETAMINOPHEN
     Route: 065
     Dates: start: 20210126, end: 20210126
  1686. ACETAMINOPHEN [Concomitant]
     Active Substance: ACETAMINOPHEN
     Route: 048
     Dates: start: 20210123, end: 20210123
  1687. ACETAMINOPHEN [Concomitant]
     Active Substance: ACETAMINOPHEN
     Route: 048
     Dates: start: 20210119, end: 20210119
  1688. ACETAMINOPHEN [Concomitant]
     Active Substance: ACETAMINOPHEN
     Route: 048
     Dates: start: 20210119, end: 20210119
  1689. ACETAMINOPHEN [Concomitant]
     Active Substance: ACETAMINOPHEN
     Route: 048
     Dates: start: 20201215, end: 20201215
  1690. ACETAMINOPHEN [Concomitant]
     Active Substance: ACETAMINOPHEN
     Route: 048
     Dates: start: 20210323, end: 20210323
  1691. ACETAMINOPHEN [Concomitant]
     Active Substance: ACETAMINOPHEN
     Route: 048
     Dates: start: 20210323, end: 20210323
  1692. ACETAMINOPHEN [Concomitant]
     Active Substance: ACETAMINOPHEN
     Route: 048
     Dates: start: 20210303, end: 20210303
  1693. ACETAMINOPHEN [Concomitant]
     Active Substance: ACETAMINOPHEN
     Route: 048
     Dates: start: 20201215, end: 20201215
  1694. ACETAMINOPHEN [Concomitant]
     Active Substance: ACETAMINOPHEN
     Route: 048
     Dates: start: 20210209, end: 20210209
  1695. ACETAMINOPHEN [Concomitant]
     Active Substance: ACETAMINOPHEN
     Route: 048
     Dates: start: 20201124, end: 20201124
  1696. ACETAMINOPHEN [Concomitant]
     Active Substance: ACETAMINOPHEN
     Route: 048
     Dates: start: 20210216, end: 20210216
  1697. ACETAMINOPHEN [Concomitant]
     Active Substance: ACETAMINOPHEN
     Route: 048
     Dates: start: 20210126, end: 20210126
  1698. ACETAMINOPHEN [Concomitant]
     Active Substance: ACETAMINOPHEN
     Route: 065
     Dates: start: 20210309, end: 20210309
  1699. ACETAMINOPHEN [Concomitant]
     Active Substance: ACETAMINOPHEN
     Route: 065
     Dates: start: 20201124, end: 20201124
  1700. ACETAMINOPHEN [Concomitant]
     Active Substance: ACETAMINOPHEN
     Route: 065
     Dates: start: 20210216, end: 20210216
  1701. ACETAMINOPHEN [Concomitant]
     Active Substance: ACETAMINOPHEN
     Route: 065
     Dates: start: 20210209, end: 20210209
  1702. ACETAMINOPHEN [Concomitant]
     Active Substance: ACETAMINOPHEN
     Route: 065
     Dates: start: 20210323, end: 20210323
  1703. ACETAMINOPHEN [Concomitant]
     Active Substance: ACETAMINOPHEN
     Route: 065
     Dates: start: 20210309, end: 20210309
  1704. ACETAMINOPHEN [Concomitant]
     Active Substance: ACETAMINOPHEN
     Route: 065
     Dates: start: 20210323, end: 20210323
  1705. ACETAMINOPHEN [Concomitant]
     Active Substance: ACETAMINOPHEN
     Route: 048
     Dates: start: 20210216, end: 20210216
  1706. ACETAMINOPHEN [Concomitant]
     Active Substance: ACETAMINOPHEN
     Route: 048
     Dates: start: 20210302, end: 20210302
  1707. ACETAMINOPHEN [Concomitant]
     Active Substance: ACETAMINOPHEN
     Route: 048
     Dates: start: 20210323, end: 20210323
  1708. ACETAMINOPHEN [Concomitant]
     Active Substance: ACETAMINOPHEN
     Route: 065
     Dates: start: 20210309, end: 20210309
  1709. ACETAMINOPHEN [Concomitant]
     Active Substance: ACETAMINOPHEN
     Route: 065
     Dates: start: 20201124, end: 20201124
  1710. ACETAMINOPHEN [Concomitant]
     Active Substance: ACETAMINOPHEN
     Route: 065
     Dates: start: 20210216, end: 20210216
  1711. ACETAMINOPHEN [Concomitant]
     Active Substance: ACETAMINOPHEN
     Route: 065
     Dates: start: 20210209, end: 20210209
  1712. ACETAMINOPHEN [Concomitant]
     Active Substance: ACETAMINOPHEN
     Route: 065
     Dates: start: 20210323, end: 20210323
  1713. ACETAMINOPHEN [Concomitant]
     Active Substance: ACETAMINOPHEN
     Route: 048
     Dates: start: 20201124, end: 20201124
  1714. ACETAMINOPHEN [Concomitant]
     Active Substance: ACETAMINOPHEN
     Route: 048
     Dates: start: 20201124, end: 20201124
  1715. ACETAMINOPHEN [Concomitant]
     Active Substance: ACETAMINOPHEN
     Route: 048
     Dates: start: 20201215, end: 20201215
  1716. ACETAMINOPHEN [Concomitant]
     Active Substance: ACETAMINOPHEN
     Route: 048
     Dates: start: 20210119, end: 20210119
  1717. ACETAMINOPHEN [Concomitant]
     Active Substance: ACETAMINOPHEN
     Route: 048
     Dates: start: 20210309, end: 20210309
  1718. ACETAMINOPHEN [Concomitant]
     Active Substance: ACETAMINOPHEN
     Route: 065
     Dates: start: 20210126, end: 20210126
  1719. ACETAMINOPHEN [Concomitant]
     Active Substance: ACETAMINOPHEN
     Route: 065
     Dates: start: 20201123, end: 20201123
  1720. SENNA [Concomitant]
     Active Substance: SENNOSIDES
     Indication: Constipation
     Route: 065
     Dates: start: 20201124
  1721. SENNA [Concomitant]
     Active Substance: SENNOSIDES
     Dates: start: 20201124
  1722. SENNA [Concomitant]
     Active Substance: SENNOSIDES
     Dates: start: 20201124
  1723. SENNA [Concomitant]
     Active Substance: SENNOSIDES
     Dates: start: 20201124
  1724. SENNA [Concomitant]
     Active Substance: SENNOSIDES
     Dates: start: 20201124
  1725. SENNA [Concomitant]
     Active Substance: SENNOSIDES
     Dates: start: 20201124
  1726. SENNA [Concomitant]
     Active Substance: SENNOSIDES
     Dates: start: 20201124
  1727. SENNA [Concomitant]
     Active Substance: SENNOSIDES
     Dates: start: 20201124
  1728. SENNA [Concomitant]
     Active Substance: SENNOSIDES
     Dates: start: 20201124
  1729. SENNA [Concomitant]
     Active Substance: SENNOSIDES
     Dates: start: 20201124
  1730. SENNA [Concomitant]
     Active Substance: SENNOSIDES
     Dates: start: 20201124
  1731. SENNA [Concomitant]
     Active Substance: SENNOSIDES
     Dates: start: 20201124
  1732. SENNA [Concomitant]
     Active Substance: SENNOSIDES
     Dates: start: 20201124
  1733. SENNA [Concomitant]
     Active Substance: SENNOSIDES
     Indication: Constipation
     Route: 050
     Dates: start: 20201124
  1734. SENNA [Concomitant]
     Active Substance: SENNOSIDES
     Dates: start: 20201124
  1735. SENNA [Concomitant]
     Active Substance: SENNOSIDES
     Dates: start: 20201124
  1736. SENNA [Concomitant]
     Active Substance: SENNOSIDES
     Dates: start: 20201124
  1737. SENNA [Concomitant]
     Active Substance: SENNOSIDES
     Dates: start: 20201124
  1738. SENOKOT [Concomitant]
     Active Substance: SENNOSIDES
     Indication: Constipation
     Route: 065
  1739. SENOKOT [Concomitant]
     Active Substance: SENNOSIDES
  1740. SENOKOT [Concomitant]
     Active Substance: SENNOSIDES
  1741. SENOKOT [Concomitant]
     Active Substance: SENNOSIDES
  1742. SENOKOT [Concomitant]
     Active Substance: SENNOSIDES
  1743. SENOKOT [Concomitant]
     Active Substance: SENNOSIDES
  1744. SENOKOT [Concomitant]
     Active Substance: SENNOSIDES
  1745. SENOKOT [Concomitant]
     Active Substance: SENNOSIDES
     Dates: start: 20201124
  1746. SENOKOT [Concomitant]
     Active Substance: SENNOSIDES
     Dates: start: 20201124
  1747. SENOKOT [Concomitant]
     Active Substance: SENNOSIDES
  1748. SENOKOT [Concomitant]
     Active Substance: SENNOSIDES
  1749. SENOKOT [Concomitant]
     Active Substance: SENNOSIDES
  1750. SENOKOT [Concomitant]
     Active Substance: SENNOSIDES
  1751. SENOKOT [Concomitant]
     Active Substance: SENNOSIDES
  1752. SENOKOT [Concomitant]
     Active Substance: SENNOSIDES
  1753. SENOKOT [Concomitant]
     Active Substance: SENNOSIDES
  1754. SENOKOT [Concomitant]
     Active Substance: SENNOSIDES
  1755. SENOKOT [Concomitant]
     Active Substance: SENNOSIDES
  1756. SENOKOT [Concomitant]
     Active Substance: SENNOSIDES
  1757. SENOKOT [Concomitant]
     Active Substance: SENNOSIDES
  1758. SENOKOT [Concomitant]
     Active Substance: SENNOSIDES
  1759. SENOKOT [Concomitant]
     Active Substance: SENNOSIDES
  1760. SENOKOT [Concomitant]
     Active Substance: SENNOSIDES
  1761. SENOKOT [Concomitant]
     Active Substance: SENNOSIDES
  1762. SENOKOT [Concomitant]
     Active Substance: SENNOSIDES
  1763. SENOKOT [Concomitant]
     Active Substance: SENNOSIDES
  1764. SENOKOT [Concomitant]
     Active Substance: SENNOSIDES
  1765. SENOKOT [Concomitant]
     Active Substance: SENNOSIDES
  1766. SENOKOT [Concomitant]
     Active Substance: SENNOSIDES
     Dates: start: 20201124
  1767. SENOKOT [Concomitant]
     Active Substance: SENNOSIDES
     Dates: start: 20201124
  1768. SENOKOT [Concomitant]
     Active Substance: SENNOSIDES
     Dates: start: 20201124
  1769. SENOKOT [Concomitant]
     Active Substance: SENNOSIDES
     Dates: start: 20201124
  1770. SENOKOT [Concomitant]
     Active Substance: SENNOSIDES
     Dates: start: 20201124
  1771. SENOKOT [Concomitant]
     Active Substance: SENNOSIDES
     Dates: start: 20201124
  1772. SENOKOT [Concomitant]
     Active Substance: SENNOSIDES
     Dates: start: 20201124
  1773. SENOKOT [Concomitant]
     Active Substance: SENNOSIDES
     Dates: start: 20201124
  1774. SENOKOT [Concomitant]
     Active Substance: SENNOSIDES
     Dates: start: 20201124
  1775. SENOKOT [Concomitant]
     Active Substance: SENNOSIDES
     Dates: start: 20201124
  1776. SENOKOT [Concomitant]
     Active Substance: SENNOSIDES
     Dates: start: 20201124
  1777. SENOKOT [Concomitant]
     Active Substance: SENNOSIDES
     Dates: start: 20201124
  1778. SENOKOT [Concomitant]
     Active Substance: SENNOSIDES
     Dates: start: 20201124
  1779. SENOKOT [Concomitant]
     Active Substance: SENNOSIDES
     Dates: start: 20201124
  1780. SENOKOT [Concomitant]
     Active Substance: SENNOSIDES
     Dates: start: 20201124
  1781. SENOKOT [Concomitant]
     Active Substance: SENNOSIDES
     Dates: start: 20201124
  1782. SENOKOT [Concomitant]
     Active Substance: SENNOSIDES
     Dates: start: 20201124
  1783. SENOKOT [Concomitant]
     Active Substance: SENNOSIDES
     Dates: start: 20201124
  1784. SENOKOT [Concomitant]
     Active Substance: SENNOSIDES
     Dates: start: 20201124
  1785. SENOKOT [Concomitant]
     Active Substance: SENNOSIDES
     Dates: start: 20201124
  1786. SENOKOT [Concomitant]
     Active Substance: SENNOSIDES
     Dates: start: 20201124
  1787. SENOKOT [Concomitant]
     Active Substance: SENNOSIDES
     Dates: start: 20201124
  1788. SENOKOT [Concomitant]
     Active Substance: SENNOSIDES
     Indication: Constipation
  1789. SENOKOT [Concomitant]
     Active Substance: SENNOSIDES
  1790. SENOKOT [Concomitant]
     Active Substance: SENNOSIDES
  1791. SENOKOT [Concomitant]
     Active Substance: SENNOSIDES
     Dates: start: 20201124
  1792. SENOKOT [Concomitant]
     Active Substance: SENNOSIDES
     Dates: start: 20201124
  1793. SENOKOT [Concomitant]
     Active Substance: SENNOSIDES
     Dates: start: 20201124
  1794. SENOKOT [Concomitant]
     Active Substance: SENNOSIDES
     Dates: start: 20201124
  1795. SENOKOT [Concomitant]
     Active Substance: SENNOSIDES
     Dates: start: 20201124
  1796. SENOKOT [Concomitant]
     Active Substance: SENNOSIDES
     Dates: start: 20201124
  1797. SENOKOT [Concomitant]
     Active Substance: SENNOSIDES
     Dates: start: 20201124
  1798. SENOKOT [Concomitant]
     Active Substance: SENNOSIDES
     Dates: start: 20201124
  1799. SENOKOT [Concomitant]
     Active Substance: SENNOSIDES
     Dates: start: 20201124
  1800. SENOKOT [Concomitant]
     Active Substance: SENNOSIDES
     Dates: start: 20201124
  1801. SENOKOT [Concomitant]
     Active Substance: SENNOSIDES
     Dates: start: 20201124
  1802. SENOKOT [Concomitant]
     Active Substance: SENNOSIDES
     Indication: Constipation
     Route: 065
  1803. SENOKOT [Concomitant]
     Active Substance: SENNOSIDES
     Route: 065
     Dates: start: 20201124
  1804. SENOKOT [Concomitant]
     Active Substance: SENNOSIDES
     Route: 065
     Dates: start: 20201124
  1805. SENOKOT [Concomitant]
     Active Substance: SENNOSIDES
     Route: 065
     Dates: start: 20201124
  1806. SENOKOT [Concomitant]
     Active Substance: SENNOSIDES
     Route: 065
  1807. SENOKOT [Concomitant]
     Active Substance: SENNOSIDES
     Route: 065
     Dates: start: 20201124
  1808. SENOKOT [Concomitant]
     Active Substance: SENNOSIDES
     Route: 065
     Dates: start: 20201124
  1809. SENOKOT [Concomitant]
     Active Substance: SENNOSIDES
     Route: 065
     Dates: start: 20201124
  1810. SENOKOT [Concomitant]
     Active Substance: SENNOSIDES
     Route: 065
     Dates: start: 20201124
  1811. SENOKOT [Concomitant]
     Active Substance: SENNOSIDES
     Route: 065
     Dates: start: 20201124
  1812. SENOKOT [Concomitant]
     Active Substance: SENNOSIDES
     Route: 065
     Dates: start: 20201124
  1813. SENOKOT [Concomitant]
     Active Substance: SENNOSIDES
     Route: 065
  1814. SENOKOT [Concomitant]
     Active Substance: SENNOSIDES
     Route: 065
     Dates: start: 20201124
  1815. SENOKOT [Concomitant]
     Active Substance: SENNOSIDES
     Route: 065
     Dates: start: 20201124
  1816. SENOKOT [Concomitant]
     Active Substance: SENNOSIDES
     Route: 065
     Dates: start: 20201124
  1817. SENOKOT [Concomitant]
     Active Substance: SENNOSIDES
     Route: 065
  1818. SENOKOT [Concomitant]
     Active Substance: SENNOSIDES
     Route: 065
  1819. SENOKOT [Concomitant]
     Active Substance: SENNOSIDES
     Route: 065
     Dates: start: 20201124
  1820. SENOKOT [Concomitant]
     Active Substance: SENNOSIDES
     Route: 065
  1821. SENOKOT [Concomitant]
     Active Substance: SENNOSIDES
     Route: 065
  1822. SENOKOT [Concomitant]
     Active Substance: SENNOSIDES
     Route: 065
     Dates: start: 20201124
  1823. SENOKOT [Concomitant]
     Active Substance: SENNOSIDES
     Route: 065
  1824. SENOKOT [Concomitant]
     Active Substance: SENNOSIDES
     Route: 065
  1825. SENOKOT [Concomitant]
     Active Substance: SENNOSIDES
     Route: 065
     Dates: start: 20201124
  1826. SENOKOT [Concomitant]
     Active Substance: SENNOSIDES
     Route: 065
     Dates: start: 20201124
  1827. SENOKOT [Concomitant]
     Active Substance: SENNOSIDES
     Route: 065
     Dates: start: 20201124
  1828. SENOKOT [Concomitant]
     Active Substance: SENNOSIDES
     Route: 065
     Dates: start: 20201124
  1829. SARS-COV-2 VACCINE [Concomitant]
     Indication: COVID-19 immunisation
     Route: 065
  1830. SARS-COV-2 VACCINE [Concomitant]
     Route: 065
     Dates: start: 20210428, end: 20210428
  1831. SARS-COV-2 VACCINE [Concomitant]
     Route: 065
  1832. SARS-COV-2 VACCINE [Concomitant]
     Route: 065
  1833. SARS-COV-2 VACCINE [Concomitant]
     Indication: Product used for unknown indication
  1834. COVID-19 VACCINE [Concomitant]
     Indication: Product used for unknown indication
     Route: 065
  1835. COVID-19 VACCINE [Concomitant]
  1836. COVID-19 VACCINE [Concomitant]
  1837. SENNA LEAF [Concomitant]
     Active Substance: SENNA LEAF
     Indication: Constipation
     Dates: start: 20201124
  1838. SENNA LEAF [Concomitant]
     Active Substance: SENNA LEAF
     Route: 065
     Dates: start: 20201124
  1839. SENNA LEAF [Concomitant]
     Active Substance: SENNA LEAF
     Route: 065
     Dates: start: 20201124
  1840. SENNA LEAF [Concomitant]
     Active Substance: SENNA LEAF
     Route: 065
     Dates: start: 20201124
  1841. SENNA LEAF [Concomitant]
     Active Substance: SENNA LEAF
     Route: 065
     Dates: start: 20201124
  1842. SENNA LEAF [Concomitant]
     Active Substance: SENNA LEAF
     Route: 065
     Dates: start: 20201124
  1843. SENNA LEAF [Concomitant]
     Active Substance: SENNA LEAF
     Route: 065
     Dates: start: 20201124
  1844. SENNA LEAF [Concomitant]
     Active Substance: SENNA LEAF
     Route: 065
     Dates: start: 20201124
  1845. SENNA LEAF [Concomitant]
     Active Substance: SENNA LEAF
     Route: 065
     Dates: start: 20201124
  1846. SENNA LEAF [Concomitant]
     Active Substance: SENNA LEAF
     Route: 065
     Dates: start: 20201124
  1847. SENNA LEAF [Concomitant]
     Active Substance: SENNA LEAF
     Route: 065
     Dates: start: 20201124
  1848. SENNA LEAF [Concomitant]
     Active Substance: SENNA LEAF
     Route: 065
     Dates: start: 20201124
  1849. SENNA LEAF [Concomitant]
     Active Substance: SENNA LEAF
     Route: 065
     Dates: start: 20201124
  1850. SENNA LEAF [Concomitant]
     Active Substance: SENNA LEAF
     Indication: Constipation
     Route: 065
     Dates: start: 20201124
  1851. SENNA LEAF [Concomitant]
     Active Substance: SENNA LEAF
     Route: 065
     Dates: start: 20201124
  1852. SENNA LEAF [Concomitant]
     Active Substance: SENNA LEAF
     Route: 065
     Dates: start: 20201124
  1853. SENNA LEAF [Concomitant]
     Active Substance: SENNA LEAF
     Route: 065
     Dates: start: 20201124
  1854. SENNA LEAF [Concomitant]
     Active Substance: SENNA LEAF
     Route: 065
     Dates: start: 20201124
  1855. SENNA LEAF [Concomitant]
     Active Substance: SENNA LEAF
     Route: 065
     Dates: start: 20201124
  1856. SENNA LEAF [Concomitant]
     Active Substance: SENNA LEAF
     Route: 065
     Dates: start: 20201124
  1857. SENNA LEAF [Concomitant]
     Active Substance: SENNA LEAF
     Route: 065
     Dates: start: 20201124
  1858. SENNA LEAF [Concomitant]
     Active Substance: SENNA LEAF
     Route: 065
     Dates: start: 20201124
  1859. SENNA LEAF [Concomitant]
     Active Substance: SENNA LEAF
     Route: 065
     Dates: start: 20201124
  1860. SENNA LEAF [Concomitant]
     Active Substance: SENNA LEAF
     Route: 065
     Dates: start: 20201124
  1861. SENNA LEAF [Concomitant]
     Active Substance: SENNA LEAF
     Route: 065
     Dates: start: 20201124
  1862. SENNA LEAF [Concomitant]
     Active Substance: SENNA LEAF
     Route: 065
     Dates: start: 20201124
  1863. SENNA LEAF [Concomitant]
     Active Substance: SENNA LEAF
     Dates: start: 20201124
  1864. SENNA LEAF [Concomitant]
     Active Substance: SENNA LEAF
     Dates: start: 20201124
  1865. SENNA LEAF [Concomitant]
     Active Substance: SENNA LEAF
     Dates: start: 20201124
  1866. SENNA LEAF [Concomitant]
     Active Substance: SENNA LEAF
     Dates: start: 20201124
  1867. SENNA LEAF [Concomitant]
     Active Substance: SENNA LEAF
     Dates: start: 20201124
  1868. SENNA LEAF [Concomitant]
     Active Substance: SENNA LEAF
     Dates: start: 20201124
  1869. SENNA LEAF [Concomitant]
     Active Substance: SENNA LEAF
     Dates: start: 20201124
  1870. SENNA LEAF [Concomitant]
     Active Substance: SENNA LEAF
     Dates: start: 20201124
  1871. SENNA LEAF [Concomitant]
     Active Substance: SENNA LEAF
     Dates: start: 20201124
  1872. SENNA LEAF [Concomitant]
     Active Substance: SENNA LEAF
     Dates: start: 20201124
  1873. SENNA LEAF [Concomitant]
     Active Substance: SENNA LEAF
     Dates: start: 20201124
  1874. SENNA LEAF [Concomitant]
     Active Substance: SENNA LEAF
     Dates: start: 20201124
  1875. SENNA LEAF [Concomitant]
     Active Substance: SENNA LEAF
     Dates: start: 20201124
  1876. SENNA LEAF [Concomitant]
     Active Substance: SENNA LEAF
     Dates: start: 20201124
  1877. SENNA LEAF [Concomitant]
     Active Substance: SENNA LEAF
     Dates: start: 20201124
  1878. SENNA LEAF [Concomitant]
     Active Substance: SENNA LEAF
     Dates: start: 20201124
  1879. SENNA LEAF [Concomitant]
     Active Substance: SENNA LEAF
     Dates: start: 20201124
  1880. SENNA LEAF [Concomitant]
     Active Substance: SENNA LEAF
     Dates: start: 20201124
  1881. SENNA LEAF [Concomitant]
     Active Substance: SENNA LEAF
     Dates: start: 20201124
  1882. SENNA LEAF [Concomitant]
     Active Substance: SENNA LEAF
     Dates: start: 20201124
  1883. SENNA LEAF [Concomitant]
     Active Substance: SENNA LEAF
     Dates: start: 20201124
  1884. SENNA LEAF [Concomitant]
     Active Substance: SENNA LEAF
     Dates: start: 20201124
  1885. SENNA LEAF [Concomitant]
     Active Substance: SENNA LEAF
     Dates: start: 20201124
  1886. SENNA LEAF [Concomitant]
     Active Substance: SENNA LEAF
     Dates: start: 20201124
  1887. SENNA LEAF [Concomitant]
     Active Substance: SENNA LEAF
     Dates: start: 20201124
  1888. SENNA LEAF [Concomitant]
     Active Substance: SENNA LEAF
     Dates: start: 20201124
  1889. SENNA LEAF [Concomitant]
     Active Substance: SENNA LEAF
     Dates: start: 20201124
  1890. SENNA LEAF [Concomitant]
     Active Substance: SENNA LEAF
     Dates: start: 20201124
  1891. SENNA LEAF [Concomitant]
     Active Substance: SENNA LEAF
     Dates: start: 20201124
  1892. SENNA LEAF [Concomitant]
     Active Substance: SENNA LEAF
     Dates: start: 20201124
  1893. SENNA LEAF [Concomitant]
     Active Substance: SENNA LEAF
     Dates: start: 20201124
  1894. SENNA LEAF [Concomitant]
     Active Substance: SENNA LEAF
     Dates: start: 20201124
  1895. SENNA LEAF [Concomitant]
     Active Substance: SENNA LEAF
     Dates: start: 20201124
  1896. SENNA LEAF [Concomitant]
     Active Substance: SENNA LEAF
     Dates: start: 20201124
  1897. SENNA LEAF [Concomitant]
     Active Substance: SENNA LEAF
     Dates: start: 20201124
  1898. SENNA LEAF [Concomitant]
     Active Substance: SENNA LEAF
     Dates: start: 20201124
  1899. SENNA LEAF [Concomitant]
     Active Substance: SENNA LEAF
     Dates: start: 20201124
  1900. SENNA LEAF [Concomitant]
     Active Substance: SENNA LEAF
     Indication: Constipation
     Dates: start: 20201124
  1901. SENNA LEAF [Concomitant]
     Active Substance: SENNA LEAF
     Dates: start: 20201124
  1902. SENNA LEAF [Concomitant]
     Active Substance: SENNA LEAF
     Dates: start: 20201124
  1903. SENNA LEAF [Concomitant]
     Active Substance: SENNA LEAF
     Dates: start: 20201124
  1904. SENNA LEAF [Concomitant]
     Active Substance: SENNA LEAF
     Dates: start: 20201124
  1905. SENNA LEAF [Concomitant]
     Active Substance: SENNA LEAF
     Dates: start: 20201124
  1906. SENNA LEAF [Concomitant]
     Active Substance: SENNA LEAF
     Dates: start: 20201124
  1907. SENNA LEAF [Concomitant]
     Active Substance: SENNA LEAF
     Dates: start: 20201124
  1908. SENNA LEAF [Concomitant]
     Active Substance: SENNA LEAF
     Dates: start: 20201124
  1909. SENNA LEAF [Concomitant]
     Active Substance: SENNA LEAF
     Dates: start: 20201124
  1910. SENNA LEAF [Concomitant]
     Active Substance: SENNA LEAF
     Dates: start: 20201124
  1911. SENNA LEAF [Concomitant]
     Active Substance: SENNA LEAF
     Dates: start: 20201124
  1912. SENNA LEAF [Concomitant]
     Active Substance: SENNA LEAF
     Dates: start: 20201124
  1913. SENNA LEAF [Concomitant]
     Active Substance: SENNA LEAF
     Dates: start: 20201124
  1914. SENNA LEAF [Concomitant]
     Active Substance: SENNA LEAF
     Dates: start: 20201124
  1915. SENNA LEAF [Concomitant]
     Active Substance: SENNA LEAF
     Dates: start: 20201124
  1916. SENNA LEAF [Concomitant]
     Active Substance: SENNA LEAF
     Dates: start: 20201124
  1917. SENNA LEAF [Concomitant]
     Active Substance: SENNA LEAF
     Dates: start: 20201124
  1918. SENNA LEAF [Concomitant]
     Active Substance: SENNA LEAF
     Dates: start: 20201124
  1919. SENNA LEAF [Concomitant]
     Active Substance: SENNA LEAF
     Dates: start: 20201124
  1920. SENNA LEAF [Concomitant]
     Active Substance: SENNA LEAF
     Dates: start: 20201124
  1921. SENNA LEAF [Concomitant]
     Active Substance: SENNA LEAF
     Dates: start: 20201124
  1922. SENNA LEAF [Concomitant]
     Active Substance: SENNA LEAF
     Dates: start: 20201124
  1923. SENNA LEAF [Concomitant]
     Active Substance: SENNA LEAF
     Dates: start: 20201124
  1924. SENNA LEAF [Concomitant]
     Active Substance: SENNA LEAF
     Dates: start: 20201124
  1925. SENNA LEAF [Concomitant]
     Active Substance: SENNA LEAF
     Dates: start: 20201124
  1926. SENNA LEAF [Concomitant]
     Active Substance: SENNA LEAF
     Dates: start: 20201124
  1927. SENNA LEAF [Concomitant]
     Active Substance: SENNA LEAF
     Dates: start: 20201124
  1928. SENNA LEAF [Concomitant]
     Active Substance: SENNA LEAF
     Dates: start: 20201124
  1929. SENNA LEAF [Concomitant]
     Active Substance: SENNA LEAF
     Dates: start: 20201124
  1930. SENNA LEAF [Concomitant]
     Active Substance: SENNA LEAF
     Dates: start: 20201124
  1931. SENNA LEAF [Concomitant]
     Active Substance: SENNA LEAF
     Dates: start: 20201124
  1932. SENNA LEAF [Concomitant]
     Active Substance: SENNA LEAF
     Dates: start: 20201124
  1933. SENNA LEAF [Concomitant]
     Active Substance: SENNA LEAF
     Dates: start: 20201124
  1934. SENNA LEAF [Concomitant]
     Active Substance: SENNA LEAF
     Dates: start: 20201124
  1935. SENNA LEAF [Concomitant]
     Active Substance: SENNA LEAF
     Dates: start: 20201124
  1936. SENNA LEAF [Concomitant]
     Active Substance: SENNA LEAF
     Dates: start: 20201124
  1937. SENNA LEAF [Concomitant]
     Active Substance: SENNA LEAF
     Dates: start: 20201124
  1938. SENNA LEAF [Concomitant]
     Active Substance: SENNA LEAF
     Dates: start: 20201124
  1939. SENNA LEAF [Concomitant]
     Active Substance: SENNA LEAF
     Dates: start: 20201124
  1940. SENNA LEAF [Concomitant]
     Active Substance: SENNA LEAF
     Dates: start: 20201124
  1941. SENNA LEAF [Concomitant]
     Active Substance: SENNA LEAF
     Dates: start: 20201124
  1942. SENNA LEAF [Concomitant]
     Active Substance: SENNA LEAF
     Dates: start: 20201124
  1943. SENNA LEAF [Concomitant]
     Active Substance: SENNA LEAF
     Dates: start: 20201124
  1944. SENNA LEAF [Concomitant]
     Active Substance: SENNA LEAF
     Dates: start: 20201124
  1945. SENNA LEAF [Concomitant]
     Active Substance: SENNA LEAF
     Dates: start: 20201124
  1946. SENNA LEAF [Concomitant]
     Active Substance: SENNA LEAF
     Dates: start: 20201124
  1947. SENNA LEAF [Concomitant]
     Active Substance: SENNA LEAF
     Dates: start: 20201124
  1948. SENNA LEAF [Concomitant]
     Active Substance: SENNA LEAF
     Dates: start: 20201124
  1949. SENNA LEAF [Concomitant]
     Active Substance: SENNA LEAF
     Dates: start: 20201124
  1950. SENNA LEAF [Concomitant]
     Active Substance: SENNA LEAF
     Indication: Constipation
     Dates: start: 20201124
  1951. SENNA LEAF [Concomitant]
     Active Substance: SENNA LEAF
     Dates: start: 20201124
  1952. SENNA LEAF [Concomitant]
     Active Substance: SENNA LEAF
     Dates: start: 20201124
  1953. SENNA LEAF [Concomitant]
     Active Substance: SENNA LEAF
     Dates: start: 20201124
  1954. SENNA LEAF [Concomitant]
     Active Substance: SENNA LEAF
     Dates: start: 20201124
  1955. SENNA LEAF [Concomitant]
     Active Substance: SENNA LEAF
     Dates: start: 20201124
  1956. SENNA LEAF [Concomitant]
     Active Substance: SENNA LEAF
     Dates: start: 20201124
  1957. SENNA LEAF [Concomitant]
     Active Substance: SENNA LEAF
     Dates: start: 20201124
  1958. SENNA LEAF [Concomitant]
     Active Substance: SENNA LEAF
     Dates: start: 20201124
  1959. SENNA LEAF [Concomitant]
     Active Substance: SENNA LEAF
     Dates: start: 20201124
  1960. SENNA LEAF [Concomitant]
     Active Substance: SENNA LEAF
     Dates: start: 20201124
  1961. SENNA LEAF [Concomitant]
     Active Substance: SENNA LEAF
     Dates: start: 20201124
  1962. SENNA LEAF [Concomitant]
     Active Substance: SENNA LEAF
     Dates: start: 20201124
  1963. SENNA LEAF [Concomitant]
     Active Substance: SENNA LEAF
     Dates: start: 20201124
  1964. SENNA LEAF [Concomitant]
     Active Substance: SENNA LEAF
     Dates: start: 20201124
  1965. SENNA LEAF [Concomitant]
     Active Substance: SENNA LEAF
     Dates: start: 20201124
  1966. SENNA LEAF [Concomitant]
     Active Substance: SENNA LEAF
     Dates: start: 20201124
  1967. SENNA LEAF [Concomitant]
     Active Substance: SENNA LEAF
     Dates: start: 20201124
  1968. SENNA LEAF [Concomitant]
     Active Substance: SENNA LEAF
     Dates: start: 20201124
  1969. SENNA LEAF [Concomitant]
     Active Substance: SENNA LEAF
     Dates: start: 20201124
  1970. SENNA LEAF [Concomitant]
     Active Substance: SENNA LEAF
     Dates: start: 20201124
  1971. SENNA LEAF [Concomitant]
     Active Substance: SENNA LEAF
     Dates: start: 20201124
  1972. SENNA LEAF [Concomitant]
     Active Substance: SENNA LEAF
     Dates: start: 20201124
  1973. SENNA LEAF [Concomitant]
     Active Substance: SENNA LEAF
     Dates: start: 20201124
  1974. SENNA LEAF [Concomitant]
     Active Substance: SENNA LEAF
     Dates: start: 20201124
  1975. SENNA LEAF [Concomitant]
     Active Substance: SENNA LEAF
     Dates: start: 20201124
  1976. SENNA LEAF [Concomitant]
     Active Substance: SENNA LEAF
     Dates: start: 20201124
  1977. SENNA LEAF [Concomitant]
     Active Substance: SENNA LEAF
     Dates: start: 20201124
  1978. SENNA LEAF [Concomitant]
     Active Substance: SENNA LEAF
     Dates: start: 20201124
  1979. CALCIUM SENNOSIDES [Concomitant]
     Active Substance: SENNOSIDES
     Indication: Constipation
     Dates: start: 20201124
  1980. CALCIUM SENNOSIDES [Concomitant]
     Active Substance: SENNOSIDES
     Dates: start: 20201124
  1981. CALCIUM SENNOSIDES [Concomitant]
     Active Substance: SENNOSIDES
     Dates: start: 20201124
  1982. CALCIUM SENNOSIDES [Concomitant]
     Active Substance: SENNOSIDES
     Dates: start: 20201124
  1983. CALCIUM SENNOSIDES [Concomitant]
     Active Substance: SENNOSIDES
     Dates: start: 20201124
  1984. CALCIUM SENNOSIDES [Concomitant]
     Active Substance: SENNOSIDES
     Dates: start: 20201124
  1985. CALCIUM SENNOSIDES [Concomitant]
     Active Substance: SENNOSIDES
     Dates: start: 20201124
  1986. CALCIUM SENNOSIDES [Concomitant]
     Active Substance: SENNOSIDES
     Dates: start: 20201124
  1987. CALCIUM SENNOSIDES [Concomitant]
     Active Substance: SENNOSIDES
     Dates: start: 20201124
  1988. CALCIUM SENNOSIDES [Concomitant]
     Active Substance: SENNOSIDES
     Dates: start: 20201124
  1989. CALCIUM SENNOSIDES [Concomitant]
     Active Substance: SENNOSIDES
     Dates: start: 20201124
  1990. CALCIUM SENNOSIDES [Concomitant]
     Active Substance: SENNOSIDES
     Dates: start: 20201124
  1991. CALCIUM SENNOSIDES [Concomitant]
     Active Substance: SENNOSIDES
     Dates: start: 20201124
  1992. DEXAMETHASONE SODIUM PHOSPHATE [Concomitant]
     Active Substance: DEXAMETHASONE SODIUM PHOSPHATE
     Indication: Product used for unknown indication
     Route: 042
     Dates: start: 20210209, end: 20210209
  1993. DEXAMETHASONE SODIUM PHOSPHATE [Concomitant]
     Active Substance: DEXAMETHASONE SODIUM PHOSPHATE
     Route: 042
     Dates: start: 20210302, end: 20210302
  1994. DEXAMETHASONE SODIUM PHOSPHATE [Concomitant]
     Active Substance: DEXAMETHASONE SODIUM PHOSPHATE
     Route: 042
     Dates: start: 20210119, end: 20210119
  1995. DEXAMETHASONE SODIUM PHOSPHATE [Concomitant]
     Active Substance: DEXAMETHASONE SODIUM PHOSPHATE
     Route: 042
     Dates: start: 20210323, end: 20210323
  1996. DEXAMETHASONE SODIUM PHOSPHATE [Concomitant]
     Active Substance: DEXAMETHASONE SODIUM PHOSPHATE
     Dates: start: 20210323, end: 20210323
  1997. DEXAMETHASONE SODIUM PHOSPHATE [Concomitant]
     Active Substance: DEXAMETHASONE SODIUM PHOSPHATE
     Dates: start: 20210323, end: 20210323
  1998. DEXAMETHASONE SODIUM PHOSPHATE [Concomitant]
     Active Substance: DEXAMETHASONE SODIUM PHOSPHATE
     Dates: start: 20210119, end: 20210119
  1999. DEXAMETHASONE SODIUM PHOSPHATE [Concomitant]
     Active Substance: DEXAMETHASONE SODIUM PHOSPHATE
     Dates: start: 20210209, end: 20210209
  2000. DEXAMETHASONE SODIUM PHOSPHATE [Concomitant]
     Active Substance: DEXAMETHASONE SODIUM PHOSPHATE
     Dates: start: 20210302, end: 20210302
  2001. DEXAMETHASONE SODIUM PHOSPHATE [Concomitant]
     Active Substance: DEXAMETHASONE SODIUM PHOSPHATE
     Dates: start: 20210323, end: 20210323
  2002. DEXAMETHASONE SODIUM PHOSPHATE [Concomitant]
     Active Substance: DEXAMETHASONE SODIUM PHOSPHATE
     Dates: start: 20210119, end: 20210119
  2003. DEXAMETHASONE SODIUM PHOSPHATE [Concomitant]
     Active Substance: DEXAMETHASONE SODIUM PHOSPHATE
     Dates: start: 20210119, end: 20210119
  2004. DEXAMETHASONE SODIUM PHOSPHATE [Concomitant]
     Active Substance: DEXAMETHASONE SODIUM PHOSPHATE
     Dates: start: 20210209, end: 20210209
  2005. DEXAMETHASONE SODIUM PHOSPHATE [Concomitant]
     Active Substance: DEXAMETHASONE SODIUM PHOSPHATE
     Dates: start: 20210209, end: 20210209
  2006. DEXAMETHASONE SODIUM PHOSPHATE [Concomitant]
     Active Substance: DEXAMETHASONE SODIUM PHOSPHATE
     Dates: start: 20210302, end: 20210302
  2007. DEXAMETHASONE SODIUM PHOSPHATE [Concomitant]
     Active Substance: DEXAMETHASONE SODIUM PHOSPHATE
     Dates: start: 20210302, end: 20210302
  2008. DEXAMETHASONE SODIUM PHOSPHATE [Concomitant]
     Active Substance: DEXAMETHASONE SODIUM PHOSPHATE
     Dates: start: 20210323, end: 20210323
  2009. DEXAMETHASONE SODIUM PHOSPHATE [Concomitant]
     Active Substance: DEXAMETHASONE SODIUM PHOSPHATE
     Dates: start: 20210323, end: 20210323
  2010. DEXAMETHASONE SODIUM PHOSPHATE [Concomitant]
     Active Substance: DEXAMETHASONE SODIUM PHOSPHATE
     Dates: start: 20210323, end: 20210323
  2011. DEXAMETHASONE SODIUM PHOSPHATE [Concomitant]
     Active Substance: DEXAMETHASONE SODIUM PHOSPHATE
     Dates: start: 20210209, end: 20210209
  2012. DEXAMETHASONE SODIUM PHOSPHATE [Concomitant]
     Active Substance: DEXAMETHASONE SODIUM PHOSPHATE
     Dates: start: 20210119, end: 20210119
  2013. DEXAMETHASONE SODIUM PHOSPHATE [Concomitant]
     Active Substance: DEXAMETHASONE SODIUM PHOSPHATE
     Dates: start: 20210302, end: 20210302
  2014. DEXAMETHASONE SODIUM PHOSPHATE [Concomitant]
     Active Substance: DEXAMETHASONE SODIUM PHOSPHATE
     Dates: start: 20210119, end: 20210119
  2015. DEXAMETHASONE SODIUM PHOSPHATE [Concomitant]
     Active Substance: DEXAMETHASONE SODIUM PHOSPHATE
     Dates: start: 20210119, end: 20210119
  2016. DEXAMETHASONE SODIUM PHOSPHATE [Concomitant]
     Active Substance: DEXAMETHASONE SODIUM PHOSPHATE
     Dates: start: 20210323, end: 20210323
  2017. DEXAMETHASONE SODIUM PHOSPHATE [Concomitant]
     Active Substance: DEXAMETHASONE SODIUM PHOSPHATE
     Dates: start: 20210323, end: 20210323
  2018. DEXAMETHASONE SODIUM PHOSPHATE [Concomitant]
     Active Substance: DEXAMETHASONE SODIUM PHOSPHATE
     Dates: start: 20210209, end: 20210209
  2019. DEXAMETHASONE SODIUM PHOSPHATE [Concomitant]
     Active Substance: DEXAMETHASONE SODIUM PHOSPHATE
     Dates: start: 20210209, end: 20210209
  2020. DEXAMETHASONE SODIUM PHOSPHATE [Concomitant]
     Active Substance: DEXAMETHASONE SODIUM PHOSPHATE
     Dates: start: 20210302, end: 20210302
  2021. DEXAMETHASONE SODIUM PHOSPHATE [Concomitant]
     Active Substance: DEXAMETHASONE SODIUM PHOSPHATE
     Dates: start: 20210302, end: 20210302
  2022. DEXAMETHASONE SODIUM PHOSPHATE [Concomitant]
     Active Substance: DEXAMETHASONE SODIUM PHOSPHATE
     Dates: start: 20210119, end: 20210119
  2023. DEXAMETHASONE SODIUM PHOSPHATE [Concomitant]
     Active Substance: DEXAMETHASONE SODIUM PHOSPHATE
     Dates: start: 20210119, end: 20210119
  2024. DEXAMETHASONE SODIUM PHOSPHATE [Concomitant]
     Active Substance: DEXAMETHASONE SODIUM PHOSPHATE
     Dates: start: 20210323, end: 20210323
  2025. DEXAMETHASONE SODIUM PHOSPHATE [Concomitant]
     Active Substance: DEXAMETHASONE SODIUM PHOSPHATE
     Dates: start: 20210323, end: 20210323
  2026. DEXAMETHASONE SODIUM PHOSPHATE [Concomitant]
     Active Substance: DEXAMETHASONE SODIUM PHOSPHATE
     Dates: start: 20210302, end: 20210302
  2027. DEXAMETHASONE SODIUM PHOSPHATE [Concomitant]
     Active Substance: DEXAMETHASONE SODIUM PHOSPHATE
     Dates: start: 20210302, end: 20210302
  2028. DEXAMETHASONE SODIUM PHOSPHATE [Concomitant]
     Active Substance: DEXAMETHASONE SODIUM PHOSPHATE
     Dates: start: 20210209, end: 20210209
  2029. DEXAMETHASONE SODIUM PHOSPHATE [Concomitant]
     Active Substance: DEXAMETHASONE SODIUM PHOSPHATE
     Dates: start: 20210209, end: 20210209
  2030. DEXAMETHASONE SODIUM PHOSPHATE [Concomitant]
     Active Substance: DEXAMETHASONE SODIUM PHOSPHATE
     Dates: start: 20210119, end: 20210119
  2031. DEXAMETHASONE SODIUM PHOSPHATE [Concomitant]
     Active Substance: DEXAMETHASONE SODIUM PHOSPHATE
     Dates: start: 20210119, end: 20210119
  2032. DEXAMETHASONE SODIUM PHOSPHATE [Concomitant]
     Active Substance: DEXAMETHASONE SODIUM PHOSPHATE
     Dates: start: 20210209, end: 20210209
  2033. DEXAMETHASONE SODIUM PHOSPHATE [Concomitant]
     Active Substance: DEXAMETHASONE SODIUM PHOSPHATE
     Dates: start: 20210209, end: 20210209
  2034. DEXAMETHASONE SODIUM PHOSPHATE [Concomitant]
     Active Substance: DEXAMETHASONE SODIUM PHOSPHATE
     Dates: start: 20210323, end: 20210323
  2035. DEXAMETHASONE SODIUM PHOSPHATE [Concomitant]
     Active Substance: DEXAMETHASONE SODIUM PHOSPHATE
     Dates: start: 20210323, end: 20210323
  2036. DEXAMETHASONE SODIUM PHOSPHATE [Concomitant]
     Active Substance: DEXAMETHASONE SODIUM PHOSPHATE
     Dates: start: 20210302, end: 20210302
  2037. DEXAMETHASONE SODIUM PHOSPHATE [Concomitant]
     Active Substance: DEXAMETHASONE SODIUM PHOSPHATE
     Dates: start: 20210302, end: 20210302
  2038. DEXAMETHASONE SODIUM PHOSPHATE [Concomitant]
     Active Substance: DEXAMETHASONE SODIUM PHOSPHATE
     Dates: start: 20210119, end: 20210119
  2039. DEXAMETHASONE SODIUM PHOSPHATE [Concomitant]
     Active Substance: DEXAMETHASONE SODIUM PHOSPHATE
     Dates: start: 20210209, end: 20210209
  2040. DEXAMETHASONE SODIUM PHOSPHATE [Concomitant]
     Active Substance: DEXAMETHASONE SODIUM PHOSPHATE
     Dates: start: 20210209, end: 20210209
  2041. DEXAMETHASONE SODIUM PHOSPHATE [Concomitant]
     Active Substance: DEXAMETHASONE SODIUM PHOSPHATE
     Dates: start: 20210209, end: 20210209
  2042. DEXAMETHASONE SODIUM PHOSPHATE [Concomitant]
     Active Substance: DEXAMETHASONE SODIUM PHOSPHATE
     Indication: Product used for unknown indication
     Dates: start: 20210119, end: 20210119
  2043. DEXAMETHASONE SODIUM PHOSPHATE [Concomitant]
     Active Substance: DEXAMETHASONE SODIUM PHOSPHATE
     Route: 042
     Dates: start: 20210119, end: 20210119
  2044. DEXAMETHASONE SODIUM PHOSPHATE [Concomitant]
     Active Substance: DEXAMETHASONE SODIUM PHOSPHATE
     Route: 065
     Dates: start: 20210119, end: 20210119
  2045. DEXAMETHASONE SODIUM PHOSPHATE [Concomitant]
     Active Substance: DEXAMETHASONE SODIUM PHOSPHATE
     Route: 042
     Dates: start: 20210209, end: 20210209
  2046. DEXAMETHASONE SODIUM PHOSPHATE [Concomitant]
     Active Substance: DEXAMETHASONE SODIUM PHOSPHATE
     Route: 065
     Dates: start: 20210209, end: 20210209
  2047. DEXAMETHASONE SODIUM PHOSPHATE [Concomitant]
     Active Substance: DEXAMETHASONE SODIUM PHOSPHATE
     Dates: start: 20210119, end: 20210119
  2048. DEXAMETHASONE SODIUM PHOSPHATE [Concomitant]
     Active Substance: DEXAMETHASONE SODIUM PHOSPHATE
     Route: 042
     Dates: start: 20210323, end: 20210323
  2049. DEXAMETHASONE SODIUM PHOSPHATE [Concomitant]
     Active Substance: DEXAMETHASONE SODIUM PHOSPHATE
     Route: 065
     Dates: start: 20210323, end: 20210323
  2050. DEXAMETHASONE SODIUM PHOSPHATE [Concomitant]
     Active Substance: DEXAMETHASONE SODIUM PHOSPHATE
     Dates: start: 20210323, end: 20210323
  2051. DEXAMETHASONE SODIUM PHOSPHATE [Concomitant]
     Active Substance: DEXAMETHASONE SODIUM PHOSPHATE
     Dates: start: 20210119, end: 20210119
  2052. DEXAMETHASONE SODIUM PHOSPHATE [Concomitant]
     Active Substance: DEXAMETHASONE SODIUM PHOSPHATE
     Dates: start: 20210119, end: 20210119
  2053. DEXAMETHASONE SODIUM PHOSPHATE [Concomitant]
     Active Substance: DEXAMETHASONE SODIUM PHOSPHATE
     Dates: start: 20210323, end: 20210323
  2054. DEXAMETHASONE SODIUM PHOSPHATE [Concomitant]
     Active Substance: DEXAMETHASONE SODIUM PHOSPHATE
     Route: 042
     Dates: start: 20210302, end: 20210302
  2055. DEXAMETHASONE SODIUM PHOSPHATE [Concomitant]
     Active Substance: DEXAMETHASONE SODIUM PHOSPHATE
     Dates: start: 20210302, end: 20210302
  2056. DEXAMETHASONE SODIUM PHOSPHATE [Concomitant]
     Active Substance: DEXAMETHASONE SODIUM PHOSPHATE
     Route: 065
     Dates: start: 20210302, end: 20210302
  2057. DEXAMETHASONE SODIUM PHOSPHATE [Concomitant]
     Active Substance: DEXAMETHASONE SODIUM PHOSPHATE
     Dates: start: 20210302, end: 20210302
  2058. DEXAMETHASONE SODIUM PHOSPHATE [Concomitant]
     Active Substance: DEXAMETHASONE SODIUM PHOSPHATE
     Route: 065
     Dates: start: 20210302, end: 20210302
  2059. DEXAMETHASONE SODIUM PHOSPHATE [Concomitant]
     Active Substance: DEXAMETHASONE SODIUM PHOSPHATE
     Dates: start: 20210302, end: 20210302
  2060. DEXAMETHASONE SODIUM PHOSPHATE [Concomitant]
     Active Substance: DEXAMETHASONE SODIUM PHOSPHATE
     Dates: start: 20210209, end: 20210209
  2061. DEXAMETHASONE SODIUM PHOSPHATE [Concomitant]
     Active Substance: DEXAMETHASONE SODIUM PHOSPHATE
     Dates: start: 20210209, end: 20210209
  2062. DEXAMETHASONE SODIUM PHOSPHATE [Concomitant]
     Active Substance: DEXAMETHASONE SODIUM PHOSPHATE
     Dates: start: 20210323, end: 20210323
  2063. DEXAMETHASONE SODIUM PHOSPHATE [Concomitant]
     Active Substance: DEXAMETHASONE SODIUM PHOSPHATE
     Dates: start: 20210323, end: 20210323
  2064. DEXAMETHASONE SODIUM PHOSPHATE [Concomitant]
     Active Substance: DEXAMETHASONE SODIUM PHOSPHATE
     Dates: start: 20210302, end: 20210302
  2065. DEXAMETHASONE SODIUM PHOSPHATE [Concomitant]
     Active Substance: DEXAMETHASONE SODIUM PHOSPHATE
     Dates: start: 20210302, end: 20210302
  2066. DEXAMETHASONE SODIUM PHOSPHATE [Concomitant]
     Active Substance: DEXAMETHASONE SODIUM PHOSPHATE
     Route: 065
     Dates: start: 20210323, end: 20210323
  2067. DEXAMETHASONE SODIUM PHOSPHATE [Concomitant]
     Active Substance: DEXAMETHASONE SODIUM PHOSPHATE
     Dates: start: 20210323, end: 20210323
  2068. DEXAMETHASONE SODIUM PHOSPHATE [Concomitant]
     Active Substance: DEXAMETHASONE SODIUM PHOSPHATE
     Dates: start: 20210323, end: 20210323
  2069. DEXAMETHASONE SODIUM PHOSPHATE [Concomitant]
     Active Substance: DEXAMETHASONE SODIUM PHOSPHATE
     Dates: start: 20210323, end: 20210323
  2070. DEXAMETHASONE SODIUM PHOSPHATE [Concomitant]
     Active Substance: DEXAMETHASONE SODIUM PHOSPHATE
     Dates: start: 20210209, end: 20210209
  2071. DEXAMETHASONE SODIUM PHOSPHATE [Concomitant]
     Active Substance: DEXAMETHASONE SODIUM PHOSPHATE
     Dates: start: 20210209, end: 20210209
  2072. DEXAMETHASONE SODIUM PHOSPHATE [Concomitant]
     Active Substance: DEXAMETHASONE SODIUM PHOSPHATE
     Dates: start: 20210119, end: 20210119
  2073. DEXAMETHASONE SODIUM PHOSPHATE [Concomitant]
     Active Substance: DEXAMETHASONE SODIUM PHOSPHATE
     Dates: start: 20210119, end: 20210119
  2074. DEXAMETHASONE SODIUM PHOSPHATE [Concomitant]
     Active Substance: DEXAMETHASONE SODIUM PHOSPHATE
     Dates: start: 20210302, end: 20210302
  2075. DEXAMETHASONE SODIUM PHOSPHATE [Concomitant]
     Active Substance: DEXAMETHASONE SODIUM PHOSPHATE
     Dates: start: 20210302, end: 20210302
  2076. DEXAMETHASONE SODIUM PHOSPHATE [Concomitant]
     Active Substance: DEXAMETHASONE SODIUM PHOSPHATE
     Dates: start: 20210302, end: 20210302
  2077. DEXAMETHASONE SODIUM PHOSPHATE [Concomitant]
     Active Substance: DEXAMETHASONE SODIUM PHOSPHATE
     Dates: start: 20210302, end: 20210302
  2078. DEXAMETHASONE SODIUM PHOSPHATE [Concomitant]
     Active Substance: DEXAMETHASONE SODIUM PHOSPHATE
     Dates: start: 20210209, end: 20210209
  2079. DEXAMETHASONE SODIUM PHOSPHATE [Concomitant]
     Active Substance: DEXAMETHASONE SODIUM PHOSPHATE
     Dates: start: 20210209, end: 20210209
  2080. DEXAMETHASONE SODIUM PHOSPHATE [Concomitant]
     Active Substance: DEXAMETHASONE SODIUM PHOSPHATE
     Dates: start: 20210323, end: 20210323
  2081. DEXAMETHASONE SODIUM PHOSPHATE [Concomitant]
     Active Substance: DEXAMETHASONE SODIUM PHOSPHATE
     Dates: start: 20210323, end: 20210323
  2082. DEXAMETHASONE SODIUM PHOSPHATE [Concomitant]
     Active Substance: DEXAMETHASONE SODIUM PHOSPHATE
     Dates: start: 20210119, end: 20210119
  2083. DEXAMETHASONE SODIUM PHOSPHATE [Concomitant]
     Active Substance: DEXAMETHASONE SODIUM PHOSPHATE
     Dates: start: 20210119, end: 20210119
  2084. DEXAMETHASONE SODIUM PHOSPHATE [Concomitant]
     Active Substance: DEXAMETHASONE SODIUM PHOSPHATE
     Dates: start: 20210323, end: 20210323
  2085. DEXAMETHASONE SODIUM PHOSPHATE [Concomitant]
     Active Substance: DEXAMETHASONE SODIUM PHOSPHATE
     Dates: start: 20210323, end: 20210323
  2086. DEXAMETHASONE SODIUM PHOSPHATE [Concomitant]
     Active Substance: DEXAMETHASONE SODIUM PHOSPHATE
     Dates: start: 20210323, end: 20210323
  2087. DEXAMETHASONE SODIUM PHOSPHATE [Concomitant]
     Active Substance: DEXAMETHASONE SODIUM PHOSPHATE
     Dates: start: 20210323, end: 20210323
  2088. DEXAMETHASONE SODIUM PHOSPHATE [Concomitant]
     Active Substance: DEXAMETHASONE SODIUM PHOSPHATE
     Dates: start: 20210209, end: 20210209
  2089. DEXAMETHASONE SODIUM PHOSPHATE [Concomitant]
     Active Substance: DEXAMETHASONE SODIUM PHOSPHATE
     Dates: start: 20210209, end: 20210209
  2090. DEXAMETHASONE SODIUM PHOSPHATE [Concomitant]
     Active Substance: DEXAMETHASONE SODIUM PHOSPHATE
     Dates: start: 20210119, end: 20210119
  2091. DEXAMETHASONE SODIUM PHOSPHATE [Concomitant]
     Active Substance: DEXAMETHASONE SODIUM PHOSPHATE
     Dates: start: 20210119, end: 20210119
  2092. DEXAMETHASONE SODIUM PHOSPHATE [Concomitant]
     Active Substance: DEXAMETHASONE SODIUM PHOSPHATE
     Indication: Product used for unknown indication
     Dates: start: 20210323, end: 20210323
  2093. DEXAMETHASONE SODIUM PHOSPHATE [Concomitant]
     Active Substance: DEXAMETHASONE SODIUM PHOSPHATE
     Dates: start: 20210323, end: 20210323
  2094. DEXAMETHASONE SODIUM PHOSPHATE [Concomitant]
     Active Substance: DEXAMETHASONE SODIUM PHOSPHATE
     Dates: start: 20210209, end: 20210209
  2095. DEXAMETHASONE SODIUM PHOSPHATE [Concomitant]
     Active Substance: DEXAMETHASONE SODIUM PHOSPHATE
     Dates: start: 20210209, end: 20210209
  2096. DEXAMETHASONE SODIUM PHOSPHATE [Concomitant]
     Active Substance: DEXAMETHASONE SODIUM PHOSPHATE
     Dates: start: 20210119, end: 20210119
  2097. DEXAMETHASONE SODIUM PHOSPHATE [Concomitant]
     Active Substance: DEXAMETHASONE SODIUM PHOSPHATE
     Dates: start: 20210119, end: 20210119
  2098. DEXAMETHASONE SODIUM PHOSPHATE [Concomitant]
     Active Substance: DEXAMETHASONE SODIUM PHOSPHATE
     Dates: start: 20210119, end: 20210119
  2099. DEXAMETHASONE SODIUM PHOSPHATE [Concomitant]
     Active Substance: DEXAMETHASONE SODIUM PHOSPHATE
     Dates: start: 20210119, end: 20210119
  2100. DEXAMETHASONE SODIUM PHOSPHATE [Concomitant]
     Active Substance: DEXAMETHASONE SODIUM PHOSPHATE
     Dates: start: 20210209, end: 20210209
  2101. DEXAMETHASONE SODIUM PHOSPHATE [Concomitant]
     Active Substance: DEXAMETHASONE SODIUM PHOSPHATE
     Dates: start: 20210209, end: 20210209
  2102. DEXAMETHASONE SODIUM PHOSPHATE [Concomitant]
     Active Substance: DEXAMETHASONE SODIUM PHOSPHATE
     Dates: start: 20210302, end: 20210302
  2103. DEXAMETHASONE SODIUM PHOSPHATE [Concomitant]
     Active Substance: DEXAMETHASONE SODIUM PHOSPHATE
     Dates: start: 20210302, end: 20210302
  2104. DEXAMETHASONE SODIUM PHOSPHATE [Concomitant]
     Active Substance: DEXAMETHASONE SODIUM PHOSPHATE
     Dates: start: 20210323, end: 20210323
  2105. DEXAMETHASONE SODIUM PHOSPHATE [Concomitant]
     Active Substance: DEXAMETHASONE SODIUM PHOSPHATE
     Dates: start: 20210323, end: 20210323
  2106. DEXAMETHASONE SODIUM PHOSPHATE [Concomitant]
     Active Substance: DEXAMETHASONE SODIUM PHOSPHATE
     Dates: start: 20210302, end: 20210302
  2107. DEXAMETHASONE SODIUM PHOSPHATE [Concomitant]
     Active Substance: DEXAMETHASONE SODIUM PHOSPHATE
     Dates: start: 20210302, end: 20210302
  2108. DEXAMETHASONE SODIUM PHOSPHATE [Concomitant]
     Active Substance: DEXAMETHASONE SODIUM PHOSPHATE
     Dates: start: 20210209, end: 20210209
  2109. DEXAMETHASONE SODIUM PHOSPHATE [Concomitant]
     Active Substance: DEXAMETHASONE SODIUM PHOSPHATE
     Dates: start: 20210209, end: 20210209
  2110. DEXAMETHASONE SODIUM PHOSPHATE [Concomitant]
     Active Substance: DEXAMETHASONE SODIUM PHOSPHATE
     Dates: start: 20210119, end: 20210119
  2111. DEXAMETHASONE SODIUM PHOSPHATE [Concomitant]
     Active Substance: DEXAMETHASONE SODIUM PHOSPHATE
     Dates: start: 20210119, end: 20210119
  2112. DEXAMETHASONE SODIUM PHOSPHATE [Concomitant]
     Active Substance: DEXAMETHASONE SODIUM PHOSPHATE
     Dates: start: 20210323, end: 20210323
  2113. DEXAMETHASONE SODIUM PHOSPHATE [Concomitant]
     Active Substance: DEXAMETHASONE SODIUM PHOSPHATE
     Dates: start: 20210323, end: 20210323
  2114. DEXAMETHASONE SODIUM PHOSPHATE [Concomitant]
     Active Substance: DEXAMETHASONE SODIUM PHOSPHATE
     Dates: start: 20210323, end: 20210323
  2115. DEXAMETHASONE SODIUM PHOSPHATE [Concomitant]
     Active Substance: DEXAMETHASONE SODIUM PHOSPHATE
     Dates: start: 20210323, end: 20210323
  2116. DEXAMETHASONE SODIUM PHOSPHATE [Concomitant]
     Active Substance: DEXAMETHASONE SODIUM PHOSPHATE
     Dates: start: 20210209, end: 20210209
  2117. DEXAMETHASONE SODIUM PHOSPHATE [Concomitant]
     Active Substance: DEXAMETHASONE SODIUM PHOSPHATE
     Dates: start: 20210209, end: 20210209
  2118. DEXAMETHASONE SODIUM PHOSPHATE [Concomitant]
     Active Substance: DEXAMETHASONE SODIUM PHOSPHATE
     Dates: start: 20210323, end: 20210323
  2119. DEXAMETHASONE SODIUM PHOSPHATE [Concomitant]
     Active Substance: DEXAMETHASONE SODIUM PHOSPHATE
     Dates: start: 20210323, end: 20210323
  2120. DEXAMETHASONE SODIUM PHOSPHATE [Concomitant]
     Active Substance: DEXAMETHASONE SODIUM PHOSPHATE
     Dates: start: 20210302, end: 20210302
  2121. DEXAMETHASONE SODIUM PHOSPHATE [Concomitant]
     Active Substance: DEXAMETHASONE SODIUM PHOSPHATE
     Dates: start: 20210302, end: 20210302
  2122. DEXAMETHASONE SODIUM PHOSPHATE [Concomitant]
     Active Substance: DEXAMETHASONE SODIUM PHOSPHATE
     Dates: start: 20210119, end: 20210119
  2123. DEXAMETHASONE SODIUM PHOSPHATE [Concomitant]
     Active Substance: DEXAMETHASONE SODIUM PHOSPHATE
     Dates: start: 20210119, end: 20210119
  2124. DEXAMETHASONE SODIUM PHOSPHATE [Concomitant]
     Active Substance: DEXAMETHASONE SODIUM PHOSPHATE
     Dates: start: 20210323, end: 20210323
  2125. DEXAMETHASONE SODIUM PHOSPHATE [Concomitant]
     Active Substance: DEXAMETHASONE SODIUM PHOSPHATE
     Dates: start: 20210323, end: 20210323
  2126. DEXAMETHASONE SODIUM PHOSPHATE [Concomitant]
     Active Substance: DEXAMETHASONE SODIUM PHOSPHATE
     Dates: start: 20210323, end: 20210323
  2127. DEXAMETHASONE SODIUM PHOSPHATE [Concomitant]
     Active Substance: DEXAMETHASONE SODIUM PHOSPHATE
     Dates: start: 20210323, end: 20210323
  2128. DEXAMETHASONE SODIUM PHOSPHATE [Concomitant]
     Active Substance: DEXAMETHASONE SODIUM PHOSPHATE
     Dates: start: 20210209, end: 20210209
  2129. DEXAMETHASONE SODIUM PHOSPHATE [Concomitant]
     Active Substance: DEXAMETHASONE SODIUM PHOSPHATE
     Dates: start: 20210209, end: 20210209
  2130. DEXAMETHASONE SODIUM PHOSPHATE [Concomitant]
     Active Substance: DEXAMETHASONE SODIUM PHOSPHATE
     Dates: start: 20210302, end: 20210302
  2131. DEXAMETHASONE SODIUM PHOSPHATE [Concomitant]
     Active Substance: DEXAMETHASONE SODIUM PHOSPHATE
     Dates: start: 20210302, end: 20210302
  2132. DEXAMETHASONE SODIUM PHOSPHATE [Concomitant]
     Active Substance: DEXAMETHASONE SODIUM PHOSPHATE
     Dates: start: 20210119, end: 20210119
  2133. DEXAMETHASONE SODIUM PHOSPHATE [Concomitant]
     Active Substance: DEXAMETHASONE SODIUM PHOSPHATE
     Dates: start: 20210119, end: 20210119
  2134. DEXAMETHASONE SODIUM PHOSPHATE [Concomitant]
     Active Substance: DEXAMETHASONE SODIUM PHOSPHATE
     Dates: start: 20210323, end: 20210323
  2135. DEXAMETHASONE SODIUM PHOSPHATE [Concomitant]
     Active Substance: DEXAMETHASONE SODIUM PHOSPHATE
     Dates: start: 20210323, end: 20210323
  2136. DEXAMETHASONE SODIUM PHOSPHATE [Concomitant]
     Active Substance: DEXAMETHASONE SODIUM PHOSPHATE
     Dates: start: 20210302, end: 20210302
  2137. DEXAMETHASONE SODIUM PHOSPHATE [Concomitant]
     Active Substance: DEXAMETHASONE SODIUM PHOSPHATE
     Dates: start: 20210302, end: 20210302
  2138. DEXAMETHASONE SODIUM PHOSPHATE [Concomitant]
     Active Substance: DEXAMETHASONE SODIUM PHOSPHATE
     Dates: start: 20210302, end: 20210302
  2139. DEXAMETHASONE SODIUM PHOSPHATE [Concomitant]
     Active Substance: DEXAMETHASONE SODIUM PHOSPHATE
     Dates: start: 20210302, end: 20210302
  2140. DEXAMETHASONE SODIUM PHOSPHATE [Concomitant]
     Active Substance: DEXAMETHASONE SODIUM PHOSPHATE
     Dates: start: 20210209, end: 20210209
  2141. DEXAMETHASONE SODIUM PHOSPHATE [Concomitant]
     Active Substance: DEXAMETHASONE SODIUM PHOSPHATE
     Dates: start: 20210209, end: 20210209
  2142. DEXAMETHASONE SODIUM PHOSPHATE [Concomitant]
     Active Substance: DEXAMETHASONE SODIUM PHOSPHATE
     Indication: Product used for unknown indication
     Dates: start: 20210323, end: 20210323
  2143. DEXAMETHASONE SODIUM PHOSPHATE [Concomitant]
     Active Substance: DEXAMETHASONE SODIUM PHOSPHATE
     Dates: start: 20210323, end: 20210323
  2144. DEXAMETHASONE SODIUM PHOSPHATE [Concomitant]
     Active Substance: DEXAMETHASONE SODIUM PHOSPHATE
     Dates: start: 20210302, end: 20210302
  2145. DEXAMETHASONE SODIUM PHOSPHATE [Concomitant]
     Active Substance: DEXAMETHASONE SODIUM PHOSPHATE
     Dates: start: 20210302, end: 20210302
  2146. DEXAMETHASONE SODIUM PHOSPHATE [Concomitant]
     Active Substance: DEXAMETHASONE SODIUM PHOSPHATE
     Dates: start: 20210119, end: 20210119
  2147. DEXAMETHASONE SODIUM PHOSPHATE [Concomitant]
     Active Substance: DEXAMETHASONE SODIUM PHOSPHATE
     Dates: start: 20210119, end: 20210119
  2148. DEXAMETHASONE SODIUM PHOSPHATE [Concomitant]
     Active Substance: DEXAMETHASONE SODIUM PHOSPHATE
     Dates: start: 20210209, end: 20210209
  2149. DEXAMETHASONE SODIUM PHOSPHATE [Concomitant]
     Active Substance: DEXAMETHASONE SODIUM PHOSPHATE
     Dates: start: 20210209, end: 20210209
  2150. DEXAMETHASONE SODIUM PHOSPHATE [Concomitant]
     Active Substance: DEXAMETHASONE SODIUM PHOSPHATE
     Route: 042
     Dates: start: 20210209, end: 20210209
  2151. DEXAMETHASONE SODIUM PHOSPHATE [Concomitant]
     Active Substance: DEXAMETHASONE SODIUM PHOSPHATE
     Route: 042
     Dates: start: 20210209, end: 20210209
  2152. DEXAMETHASONE [Concomitant]
     Active Substance: DEXAMETHASONE
     Indication: Product used for unknown indication
     Route: 042
     Dates: start: 20210209, end: 20210209
  2153. DEXAMETHASONE [Concomitant]
     Active Substance: DEXAMETHASONE
     Route: 042
     Dates: start: 20210302, end: 20210302
  2154. DEXAMETHASONE [Concomitant]
     Active Substance: DEXAMETHASONE
     Route: 042
     Dates: start: 20210119, end: 20210119
  2155. DEXAMETHASONE [Concomitant]
     Active Substance: DEXAMETHASONE
     Route: 042
     Dates: start: 20210323, end: 20210323
  2156. DEXAMETHASONE SODIUM SUCCINATE [Concomitant]
     Active Substance: DEXAMETHASONE SODIUM SUCCINATE
     Indication: Product used for unknown indication
     Dates: start: 20210209, end: 20210209
  2157. DEXAMETHASONE SODIUM SUCCINATE [Concomitant]
     Active Substance: DEXAMETHASONE SODIUM SUCCINATE
     Dates: start: 20210119, end: 20210119
  2158. DEXAMETHASONE SODIUM SUCCINATE [Concomitant]
     Active Substance: DEXAMETHASONE SODIUM SUCCINATE
     Dates: start: 20210323, end: 20210323
  2159. DEXAMETHASONE SODIUM SUCCINATE [Concomitant]
     Active Substance: DEXAMETHASONE SODIUM SUCCINATE
     Dates: start: 20210119, end: 20210119
  2160. DEXAMETHASONE SODIUM SUCCINATE [Concomitant]
     Active Substance: DEXAMETHASONE SODIUM SUCCINATE
     Route: 065
     Dates: start: 20210323, end: 20210323
  2161. DEXAMETHASONE SODIUM SUCCINATE [Concomitant]
     Active Substance: DEXAMETHASONE SODIUM SUCCINATE
     Dates: start: 20210302, end: 20210302
  2162. DEXAMETHASONE SODIUM SUCCINATE [Concomitant]
     Active Substance: DEXAMETHASONE SODIUM SUCCINATE
     Dates: start: 20210209, end: 20210209
  2163. DEXAMETHASONE SODIUM SUCCINATE [Concomitant]
     Active Substance: DEXAMETHASONE SODIUM SUCCINATE
     Dates: start: 20210119, end: 20210119
  2164. DEXAMETHASONE SODIUM SUCCINATE [Concomitant]
     Active Substance: DEXAMETHASONE SODIUM SUCCINATE
     Dates: start: 20210323, end: 20210323
  2165. DEXAMETHASONE SODIUM SUCCINATE [Concomitant]
     Active Substance: DEXAMETHASONE SODIUM SUCCINATE
     Dates: start: 20210302, end: 20210302
  2166. DEXAMETHASONE SODIUM SUCCINATE [Concomitant]
     Active Substance: DEXAMETHASONE SODIUM SUCCINATE
     Dates: start: 20210209, end: 20210209
  2167. DEXAMETHASONE SODIUM SUCCINATE [Concomitant]
     Active Substance: DEXAMETHASONE SODIUM SUCCINATE
     Dates: start: 20210323, end: 20210323
  2168. DEXAMETHASONE SODIUM SUCCINATE [Concomitant]
     Active Substance: DEXAMETHASONE SODIUM SUCCINATE
     Dates: start: 20210302, end: 20210302
  2169. DEXAMETHASONE SODIUM SUCCINATE [Concomitant]
     Active Substance: DEXAMETHASONE SODIUM SUCCINATE
     Dates: start: 20210119, end: 20210119
  2170. DEXAMETHASONE SODIUM SUCCINATE [Concomitant]
     Active Substance: DEXAMETHASONE SODIUM SUCCINATE
     Dates: start: 20210323, end: 20210323
  2171. DEXAMETHASONE SODIUM SUCCINATE [Concomitant]
     Active Substance: DEXAMETHASONE SODIUM SUCCINATE
     Dates: start: 20210323, end: 20210323
  2172. DEXAMETHASONE SODIUM SUCCINATE [Concomitant]
     Active Substance: DEXAMETHASONE SODIUM SUCCINATE
     Dates: start: 20210209, end: 20210209
  2173. DEXAMETHASONE SODIUM SUCCINATE [Concomitant]
     Active Substance: DEXAMETHASONE SODIUM SUCCINATE
     Dates: start: 20210119, end: 20210119
  2174. DEXAMETHASONE SODIUM SUCCINATE [Concomitant]
     Active Substance: DEXAMETHASONE SODIUM SUCCINATE
     Dates: start: 20210323, end: 20210323
  2175. DEXAMETHASONE SODIUM SUCCINATE [Concomitant]
     Active Substance: DEXAMETHASONE SODIUM SUCCINATE
     Dates: start: 20210323, end: 20210323
  2176. DEXAMETHASONE SODIUM SUCCINATE [Concomitant]
     Active Substance: DEXAMETHASONE SODIUM SUCCINATE
     Dates: start: 20210209, end: 20210209
  2177. DEXAMETHASONE SODIUM SUCCINATE [Concomitant]
     Active Substance: DEXAMETHASONE SODIUM SUCCINATE
     Dates: start: 20210302, end: 20210302
  2178. DEXAMETHASONE SODIUM SUCCINATE [Concomitant]
     Active Substance: DEXAMETHASONE SODIUM SUCCINATE
     Dates: start: 20210302, end: 20210302
  2179. DEXAMETHASONE SODIUM SUCCINATE [Concomitant]
     Active Substance: DEXAMETHASONE SODIUM SUCCINATE
     Dates: start: 20210302, end: 20210302
  2180. DEXAMETHASONE SODIUM SUCCINATE [Concomitant]
     Active Substance: DEXAMETHASONE SODIUM SUCCINATE
     Dates: start: 20210323, end: 20210323
  2181. DEXAMETHASONE SODIUM SUCCINATE [Concomitant]
     Active Substance: DEXAMETHASONE SODIUM SUCCINATE
     Dates: start: 20210209, end: 20210209
  2182. DEXAMETHASONE SODIUM SUCCINATE [Concomitant]
     Active Substance: DEXAMETHASONE SODIUM SUCCINATE
     Dates: start: 20210223, end: 20210223
  2183. DEXAMETHASONE SODIUM SUCCINATE [Concomitant]
     Active Substance: DEXAMETHASONE SODIUM SUCCINATE
     Dates: start: 20210119, end: 20210119
  2184. DEXAMETHASONE SODIUM SUCCINATE [Concomitant]
     Active Substance: DEXAMETHASONE SODIUM SUCCINATE
     Route: 065
     Dates: start: 20210209, end: 20210209
  2185. DEXAMETHASONE SODIUM SUCCINATE [Concomitant]
     Active Substance: DEXAMETHASONE SODIUM SUCCINATE
     Route: 065
     Dates: start: 20210302, end: 20210302
  2186. DEXAMETHASONE SODIUM SUCCINATE [Concomitant]
     Active Substance: DEXAMETHASONE SODIUM SUCCINATE
     Dates: start: 20210302, end: 20210302
  2187. DEXAMETHASONE SODIUM SUCCINATE [Concomitant]
     Active Substance: DEXAMETHASONE SODIUM SUCCINATE
     Dates: start: 20210119, end: 20210119
  2188. DEXAMETHASONE SODIUM SUCCINATE [Concomitant]
     Active Substance: DEXAMETHASONE SODIUM SUCCINATE
     Dates: start: 20210209, end: 20210209
  2189. DEXAMETHASONE SODIUM SUCCINATE [Concomitant]
     Active Substance: DEXAMETHASONE SODIUM SUCCINATE
     Dates: start: 20210119, end: 20210119
  2190. DEXAMETHASONE SODIUM SUCCINATE [Concomitant]
     Active Substance: DEXAMETHASONE SODIUM SUCCINATE
     Dates: start: 20210119, end: 20210119
  2191. DEXAMETHASONE SODIUM SUCCINATE [Concomitant]
     Active Substance: DEXAMETHASONE SODIUM SUCCINATE
     Dates: start: 20210323, end: 20210323
  2192. DEXAMETHASONE SODIUM SUCCINATE [Concomitant]
     Active Substance: DEXAMETHASONE SODIUM SUCCINATE
     Dates: start: 20210119, end: 20210119
  2193. DEXAMETHASONE SODIUM SUCCINATE [Concomitant]
     Active Substance: DEXAMETHASONE SODIUM SUCCINATE
     Dates: start: 20210209, end: 20210209
  2194. DEXAMETHASONE SODIUM SUCCINATE [Concomitant]
     Active Substance: DEXAMETHASONE SODIUM SUCCINATE
     Dates: start: 20210209, end: 20210209
  2195. DEXAMETHASONE SODIUM SUCCINATE [Concomitant]
     Active Substance: DEXAMETHASONE SODIUM SUCCINATE
     Dates: start: 20210323, end: 20210323
  2196. DEXAMETHASONE SODIUM SUCCINATE [Concomitant]
     Active Substance: DEXAMETHASONE SODIUM SUCCINATE
     Dates: start: 20210323, end: 20210323
  2197. DEXAMETHASONE SODIUM SUCCINATE [Concomitant]
     Active Substance: DEXAMETHASONE SODIUM SUCCINATE
     Dates: start: 20210302, end: 20210302
  2198. DEXAMETHASONE SODIUM SUCCINATE [Concomitant]
     Active Substance: DEXAMETHASONE SODIUM SUCCINATE
     Dates: start: 20210119, end: 20210119
  2199. DEXAMETHASONE SODIUM SUCCINATE [Concomitant]
     Active Substance: DEXAMETHASONE SODIUM SUCCINATE
     Dates: start: 20210119, end: 20210119
  2200. DEXAMETHASONE SODIUM SUCCINATE [Concomitant]
     Active Substance: DEXAMETHASONE SODIUM SUCCINATE
     Dates: start: 20210209, end: 20210209
  2201. DEXAMETHASONE SODIUM SUCCINATE [Concomitant]
     Active Substance: DEXAMETHASONE SODIUM SUCCINATE
     Dates: start: 20210323, end: 20210323
  2202. DEXAMETHASONE SODIUM SUCCINATE [Concomitant]
     Active Substance: DEXAMETHASONE SODIUM SUCCINATE
     Dates: start: 20210323, end: 20210323
  2203. DEXAMETHASONE SODIUM SUCCINATE [Concomitant]
     Active Substance: DEXAMETHASONE SODIUM SUCCINATE
     Dates: start: 20210119, end: 20210119
  2204. DEXAMETHASONE SODIUM SUCCINATE [Concomitant]
     Active Substance: DEXAMETHASONE SODIUM SUCCINATE
     Dates: start: 20210302, end: 20210302
  2205. DEXAMETHASONE SODIUM SUCCINATE [Concomitant]
     Active Substance: DEXAMETHASONE SODIUM SUCCINATE
     Dates: start: 20210209, end: 20210209
  2206. DEXAMETHASONE SODIUM SUCCINATE [Concomitant]
     Active Substance: DEXAMETHASONE SODIUM SUCCINATE
     Indication: Product used for unknown indication
     Dates: start: 20210209, end: 20210209
  2207. DEXAMETHASONE SODIUM SUCCINATE [Concomitant]
     Active Substance: DEXAMETHASONE SODIUM SUCCINATE
     Dates: start: 20210323, end: 20210323
  2208. DEXAMETHASONE SODIUM SUCCINATE [Concomitant]
     Active Substance: DEXAMETHASONE SODIUM SUCCINATE
     Dates: start: 20210119, end: 20210119
  2209. DEXAMETHASONE SODIUM SUCCINATE [Concomitant]
     Active Substance: DEXAMETHASONE SODIUM SUCCINATE
     Dates: start: 20210119, end: 20210119
  2210. DEXAMETHASONE SODIUM SUCCINATE [Concomitant]
     Active Substance: DEXAMETHASONE SODIUM SUCCINATE
     Dates: start: 20210209, end: 20210209
  2211. DEXAMETHASONE SODIUM SUCCINATE [Concomitant]
     Active Substance: DEXAMETHASONE SODIUM SUCCINATE
     Dates: start: 20210119, end: 20210119
  2212. DEXAMETHASONE SODIUM SUCCINATE [Concomitant]
     Active Substance: DEXAMETHASONE SODIUM SUCCINATE
     Dates: start: 20210119, end: 20210119
  2213. DEXAMETHASONE SODIUM SUCCINATE [Concomitant]
     Active Substance: DEXAMETHASONE SODIUM SUCCINATE
     Dates: start: 20210323, end: 20210323
  2214. DEXAMETHASONE SODIUM SUCCINATE [Concomitant]
     Active Substance: DEXAMETHASONE SODIUM SUCCINATE
     Dates: start: 20210119, end: 20210119
  2215. DEXAMETHASONE SODIUM SUCCINATE [Concomitant]
     Active Substance: DEXAMETHASONE SODIUM SUCCINATE
     Dates: start: 20210302, end: 20210302
  2216. DEXAMETHASONE SODIUM SUCCINATE [Concomitant]
     Active Substance: DEXAMETHASONE SODIUM SUCCINATE
     Dates: start: 20210302, end: 20210302
  2217. DEXAMETHASONE SODIUM SUCCINATE [Concomitant]
     Active Substance: DEXAMETHASONE SODIUM SUCCINATE
     Dates: start: 20210302, end: 20210302
  2218. DEXAMETHASONE SODIUM SUCCINATE [Concomitant]
     Active Substance: DEXAMETHASONE SODIUM SUCCINATE
     Dates: start: 20210302, end: 20210302
  2219. DEXAMETHASONE SODIUM SUCCINATE [Concomitant]
     Active Substance: DEXAMETHASONE SODIUM SUCCINATE
     Dates: start: 20210302, end: 20210302
  2220. DEXAMETHASONE SODIUM SUCCINATE [Concomitant]
     Active Substance: DEXAMETHASONE SODIUM SUCCINATE
     Dates: start: 20210302, end: 20210302
  2221. DEXAMETHASONE SODIUM SUCCINATE [Concomitant]
     Active Substance: DEXAMETHASONE SODIUM SUCCINATE
     Dates: start: 20210209, end: 20210209
  2222. DEXAMETHASONE SODIUM SUCCINATE [Concomitant]
     Active Substance: DEXAMETHASONE SODIUM SUCCINATE
     Dates: start: 20210209, end: 20210209
  2223. DEXAMETHASONE SODIUM SUCCINATE [Concomitant]
     Active Substance: DEXAMETHASONE SODIUM SUCCINATE
     Dates: start: 20210323, end: 20210323
  2224. DEXAMETHASONE SODIUM SUCCINATE [Concomitant]
     Active Substance: DEXAMETHASONE SODIUM SUCCINATE
     Dates: start: 20210323, end: 20210323
  2225. DEXAMETHASONE SODIUM SUCCINATE [Concomitant]
     Active Substance: DEXAMETHASONE SODIUM SUCCINATE
     Dates: start: 20210302, end: 20210302
  2226. DEXAMETHASONE SODIUM SUCCINATE [Concomitant]
     Active Substance: DEXAMETHASONE SODIUM SUCCINATE
     Dates: start: 20210302, end: 20210302
  2227. DEXAMETHASONE SODIUM SUCCINATE [Concomitant]
     Active Substance: DEXAMETHASONE SODIUM SUCCINATE
     Dates: start: 20210323, end: 20210323
  2228. DEXAMETHASONE SODIUM SUCCINATE [Concomitant]
     Active Substance: DEXAMETHASONE SODIUM SUCCINATE
     Dates: start: 20210323, end: 20210323
  2229. DEXAMETHASONE SODIUM SUCCINATE [Concomitant]
     Active Substance: DEXAMETHASONE SODIUM SUCCINATE
     Dates: start: 20210323, end: 20210323
  2230. DEXAMETHASONE SODIUM SUCCINATE [Concomitant]
     Active Substance: DEXAMETHASONE SODIUM SUCCINATE
     Dates: start: 20210323, end: 20210323
  2231. DEXAMETHASONE SODIUM SUCCINATE [Concomitant]
     Active Substance: DEXAMETHASONE SODIUM SUCCINATE
     Dates: start: 20210209, end: 20210209
  2232. DEXAMETHASONE SODIUM SUCCINATE [Concomitant]
     Active Substance: DEXAMETHASONE SODIUM SUCCINATE
     Dates: start: 20210209, end: 20210209
  2233. DEXAMETHASONE SODIUM SUCCINATE [Concomitant]
     Active Substance: DEXAMETHASONE SODIUM SUCCINATE
     Dates: start: 20210119, end: 20210119
  2234. DEXAMETHASONE SODIUM SUCCINATE [Concomitant]
     Active Substance: DEXAMETHASONE SODIUM SUCCINATE
     Dates: start: 20210119, end: 20210119
  2235. DEXAMETHASONE SODIUM SUCCINATE [Concomitant]
     Active Substance: DEXAMETHASONE SODIUM SUCCINATE
     Dates: start: 20210302, end: 20210302
  2236. DEXAMETHASONE SODIUM SUCCINATE [Concomitant]
     Active Substance: DEXAMETHASONE SODIUM SUCCINATE
     Dates: start: 20210302, end: 20210302
  2237. DEXAMETHASONE SODIUM SUCCINATE [Concomitant]
     Active Substance: DEXAMETHASONE SODIUM SUCCINATE
     Dates: start: 20210302, end: 20210302
  2238. DEXAMETHASONE SODIUM SUCCINATE [Concomitant]
     Active Substance: DEXAMETHASONE SODIUM SUCCINATE
     Dates: start: 20210302, end: 20210302
  2239. DEXAMETHASONE SODIUM SUCCINATE [Concomitant]
     Active Substance: DEXAMETHASONE SODIUM SUCCINATE
     Dates: start: 20210209, end: 20210209
  2240. DEXAMETHASONE SODIUM SUCCINATE [Concomitant]
     Active Substance: DEXAMETHASONE SODIUM SUCCINATE
     Dates: start: 20210209, end: 20210209
  2241. DEXAMETHASONE SODIUM SUCCINATE [Concomitant]
     Active Substance: DEXAMETHASONE SODIUM SUCCINATE
     Dates: start: 20210323, end: 20210323
  2242. DEXAMETHASONE SODIUM SUCCINATE [Concomitant]
     Active Substance: DEXAMETHASONE SODIUM SUCCINATE
     Dates: start: 20210323, end: 20210323
  2243. DEXAMETHASONE SODIUM SUCCINATE [Concomitant]
     Active Substance: DEXAMETHASONE SODIUM SUCCINATE
     Dates: start: 20210119, end: 20210119
  2244. DEXAMETHASONE SODIUM SUCCINATE [Concomitant]
     Active Substance: DEXAMETHASONE SODIUM SUCCINATE
     Dates: start: 20210119, end: 20210119
  2245. DEXAMETHASONE SODIUM SUCCINATE [Concomitant]
     Active Substance: DEXAMETHASONE SODIUM SUCCINATE
     Dates: start: 20210323, end: 20210323
  2246. DEXAMETHASONE SODIUM SUCCINATE [Concomitant]
     Active Substance: DEXAMETHASONE SODIUM SUCCINATE
     Dates: start: 20210323, end: 20210323
  2247. DEXAMETHASONE SODIUM SUCCINATE [Concomitant]
     Active Substance: DEXAMETHASONE SODIUM SUCCINATE
     Dates: start: 20210323, end: 20210323
  2248. DEXAMETHASONE SODIUM SUCCINATE [Concomitant]
     Active Substance: DEXAMETHASONE SODIUM SUCCINATE
     Dates: start: 20210323, end: 20210323
  2249. DEXAMETHASONE SODIUM SUCCINATE [Concomitant]
     Active Substance: DEXAMETHASONE SODIUM SUCCINATE
     Dates: start: 20210209, end: 20210209
  2250. DEXAMETHASONE SODIUM SUCCINATE [Concomitant]
     Active Substance: DEXAMETHASONE SODIUM SUCCINATE
     Dates: start: 20210209, end: 20210209
  2251. DEXAMETHASONE SODIUM SUCCINATE [Concomitant]
     Active Substance: DEXAMETHASONE SODIUM SUCCINATE
     Dates: start: 20210119, end: 20210119
  2252. DEXAMETHASONE SODIUM SUCCINATE [Concomitant]
     Active Substance: DEXAMETHASONE SODIUM SUCCINATE
     Dates: start: 20210119, end: 20210119
  2253. DEXAMETHASONE SODIUM SUCCINATE [Concomitant]
     Active Substance: DEXAMETHASONE SODIUM SUCCINATE
     Dates: start: 20210323, end: 20210323
  2254. DEXAMETHASONE SODIUM SUCCINATE [Concomitant]
     Active Substance: DEXAMETHASONE SODIUM SUCCINATE
     Dates: start: 20210323, end: 20210323
  2255. DEXAMETHASONE SODIUM SUCCINATE [Concomitant]
     Active Substance: DEXAMETHASONE SODIUM SUCCINATE
     Dates: start: 20210209, end: 20210209
  2256. DEXAMETHASONE SODIUM SUCCINATE [Concomitant]
     Active Substance: DEXAMETHASONE SODIUM SUCCINATE
     Indication: Product used for unknown indication
     Dates: start: 20210209, end: 20210209
  2257. DEXAMETHASONE SODIUM SUCCINATE [Concomitant]
     Active Substance: DEXAMETHASONE SODIUM SUCCINATE
     Dates: start: 20210119, end: 20210119
  2258. DEXAMETHASONE SODIUM SUCCINATE [Concomitant]
     Active Substance: DEXAMETHASONE SODIUM SUCCINATE
     Dates: start: 20210119, end: 20210119
  2259. DEXAMETHASONE SODIUM SUCCINATE [Concomitant]
     Active Substance: DEXAMETHASONE SODIUM SUCCINATE
     Dates: start: 20210119, end: 20210119
  2260. DEXAMETHASONE SODIUM SUCCINATE [Concomitant]
     Active Substance: DEXAMETHASONE SODIUM SUCCINATE
     Dates: start: 20210119, end: 20210119
  2261. DEXAMETHASONE SODIUM SUCCINATE [Concomitant]
     Active Substance: DEXAMETHASONE SODIUM SUCCINATE
     Dates: start: 20210209, end: 20210209
  2262. DEXAMETHASONE SODIUM SUCCINATE [Concomitant]
     Active Substance: DEXAMETHASONE SODIUM SUCCINATE
     Dates: start: 20210209, end: 20210209
  2263. DEXAMETHASONE SODIUM SUCCINATE [Concomitant]
     Active Substance: DEXAMETHASONE SODIUM SUCCINATE
     Dates: start: 20210302, end: 20210302
  2264. DEXAMETHASONE SODIUM SUCCINATE [Concomitant]
     Active Substance: DEXAMETHASONE SODIUM SUCCINATE
     Dates: start: 20210302, end: 20210302
  2265. DEXAMETHASONE SODIUM SUCCINATE [Concomitant]
     Active Substance: DEXAMETHASONE SODIUM SUCCINATE
     Dates: start: 20210323, end: 20210323
  2266. DEXAMETHASONE SODIUM SUCCINATE [Concomitant]
     Active Substance: DEXAMETHASONE SODIUM SUCCINATE
     Dates: start: 20210323, end: 20210323
  2267. DEXAMETHASONE SODIUM SUCCINATE [Concomitant]
     Active Substance: DEXAMETHASONE SODIUM SUCCINATE
     Dates: start: 20210302, end: 20210302
  2268. DEXAMETHASONE SODIUM SUCCINATE [Concomitant]
     Active Substance: DEXAMETHASONE SODIUM SUCCINATE
     Dates: start: 20210302, end: 20210302
  2269. DEXAMETHASONE SODIUM SUCCINATE [Concomitant]
     Active Substance: DEXAMETHASONE SODIUM SUCCINATE
     Dates: start: 20210209, end: 20210209
  2270. DEXAMETHASONE SODIUM SUCCINATE [Concomitant]
     Active Substance: DEXAMETHASONE SODIUM SUCCINATE
     Dates: start: 20210209, end: 20210209
  2271. DEXAMETHASONE SODIUM SUCCINATE [Concomitant]
     Active Substance: DEXAMETHASONE SODIUM SUCCINATE
     Dates: start: 20210119, end: 20210119
  2272. DEXAMETHASONE SODIUM SUCCINATE [Concomitant]
     Active Substance: DEXAMETHASONE SODIUM SUCCINATE
     Dates: start: 20210119, end: 20210119
  2273. DEXAMETHASONE SODIUM SUCCINATE [Concomitant]
     Active Substance: DEXAMETHASONE SODIUM SUCCINATE
     Dates: start: 20210323, end: 20210323
  2274. DEXAMETHASONE SODIUM SUCCINATE [Concomitant]
     Active Substance: DEXAMETHASONE SODIUM SUCCINATE
     Dates: start: 20210323, end: 20210323
  2275. DEXAMETHASONE SODIUM SUCCINATE [Concomitant]
     Active Substance: DEXAMETHASONE SODIUM SUCCINATE
     Dates: start: 20210323, end: 20210323
  2276. DEXAMETHASONE SODIUM SUCCINATE [Concomitant]
     Active Substance: DEXAMETHASONE SODIUM SUCCINATE
     Dates: start: 20210323, end: 20210323
  2277. DEXAMETHASONE SODIUM SUCCINATE [Concomitant]
     Active Substance: DEXAMETHASONE SODIUM SUCCINATE
     Dates: start: 20210209, end: 20210209
  2278. DEXAMETHASONE SODIUM SUCCINATE [Concomitant]
     Active Substance: DEXAMETHASONE SODIUM SUCCINATE
     Dates: start: 20210209, end: 20210209
  2279. DEXAMETHASONE SODIUM SUCCINATE [Concomitant]
     Active Substance: DEXAMETHASONE SODIUM SUCCINATE
     Dates: start: 20210323, end: 20210323
  2280. DEXAMETHASONE SODIUM SUCCINATE [Concomitant]
     Active Substance: DEXAMETHASONE SODIUM SUCCINATE
     Dates: start: 20210323, end: 20210323
  2281. DEXAMETHASONE SODIUM SUCCINATE [Concomitant]
     Active Substance: DEXAMETHASONE SODIUM SUCCINATE
     Dates: start: 20210302, end: 20210302
  2282. DEXAMETHASONE SODIUM SUCCINATE [Concomitant]
     Active Substance: DEXAMETHASONE SODIUM SUCCINATE
     Dates: start: 20210302, end: 20210302
  2283. DEXAMETHASONE SODIUM SUCCINATE [Concomitant]
     Active Substance: DEXAMETHASONE SODIUM SUCCINATE
     Dates: start: 20210119, end: 20210119
  2284. DEXAMETHASONE SODIUM SUCCINATE [Concomitant]
     Active Substance: DEXAMETHASONE SODIUM SUCCINATE
     Dates: start: 20210119, end: 20210119
  2285. DEXAMETHASONE SODIUM SUCCINATE [Concomitant]
     Active Substance: DEXAMETHASONE SODIUM SUCCINATE
     Dates: start: 20210323, end: 20210323
  2286. DEXAMETHASONE SODIUM SUCCINATE [Concomitant]
     Active Substance: DEXAMETHASONE SODIUM SUCCINATE
     Dates: start: 20210323, end: 20210323
  2287. DEXAMETHASONE SODIUM SUCCINATE [Concomitant]
     Active Substance: DEXAMETHASONE SODIUM SUCCINATE
     Dates: start: 20210323, end: 20210323
  2288. DEXAMETHASONE SODIUM SUCCINATE [Concomitant]
     Active Substance: DEXAMETHASONE SODIUM SUCCINATE
     Dates: start: 20210323, end: 20210323
  2289. DEXAMETHASONE SODIUM SUCCINATE [Concomitant]
     Active Substance: DEXAMETHASONE SODIUM SUCCINATE
     Dates: start: 20210209, end: 20210209
  2290. DEXAMETHASONE SODIUM SUCCINATE [Concomitant]
     Active Substance: DEXAMETHASONE SODIUM SUCCINATE
     Dates: start: 20210209, end: 20210209
  2291. DEXAMETHASONE SODIUM SUCCINATE [Concomitant]
     Active Substance: DEXAMETHASONE SODIUM SUCCINATE
     Dates: start: 20210302, end: 20210302
  2292. DEXAMETHASONE SODIUM SUCCINATE [Concomitant]
     Active Substance: DEXAMETHASONE SODIUM SUCCINATE
     Dates: start: 20210302, end: 20210302
  2293. DEXAMETHASONE SODIUM SUCCINATE [Concomitant]
     Active Substance: DEXAMETHASONE SODIUM SUCCINATE
     Dates: start: 20210119, end: 20210119
  2294. DEXAMETHASONE SODIUM SUCCINATE [Concomitant]
     Active Substance: DEXAMETHASONE SODIUM SUCCINATE
     Dates: start: 20210119, end: 20210119
  2295. DEXAMETHASONE SODIUM SUCCINATE [Concomitant]
     Active Substance: DEXAMETHASONE SODIUM SUCCINATE
     Dates: start: 20210323, end: 20210323
  2296. DEXAMETHASONE SODIUM SUCCINATE [Concomitant]
     Active Substance: DEXAMETHASONE SODIUM SUCCINATE
     Dates: start: 20210323, end: 20210323
  2297. DEXAMETHASONE SODIUM SUCCINATE [Concomitant]
     Active Substance: DEXAMETHASONE SODIUM SUCCINATE
     Dates: start: 20210302, end: 20210302
  2298. DEXAMETHASONE SODIUM SUCCINATE [Concomitant]
     Active Substance: DEXAMETHASONE SODIUM SUCCINATE
     Dates: start: 20210302, end: 20210302
  2299. DEXAMETHASONE SODIUM SUCCINATE [Concomitant]
     Active Substance: DEXAMETHASONE SODIUM SUCCINATE
     Dates: start: 20210302, end: 20210302
  2300. DEXAMETHASONE SODIUM SUCCINATE [Concomitant]
     Active Substance: DEXAMETHASONE SODIUM SUCCINATE
     Dates: start: 20210302, end: 20210302
  2301. DEXAMETHASONE SODIUM SUCCINATE [Concomitant]
     Active Substance: DEXAMETHASONE SODIUM SUCCINATE
     Dates: start: 20210209, end: 20210209
  2302. DEXAMETHASONE SODIUM SUCCINATE [Concomitant]
     Active Substance: DEXAMETHASONE SODIUM SUCCINATE
     Dates: start: 20210209, end: 20210209
  2303. DEXAMETHASONE SODIUM SUCCINATE [Concomitant]
     Active Substance: DEXAMETHASONE SODIUM SUCCINATE
     Dates: start: 20210323, end: 20210323
  2304. DEXAMETHASONE SODIUM SUCCINATE [Concomitant]
     Active Substance: DEXAMETHASONE SODIUM SUCCINATE
     Dates: start: 20210323, end: 20210323
  2305. DEXAMETHASONE SODIUM SUCCINATE [Concomitant]
     Active Substance: DEXAMETHASONE SODIUM SUCCINATE
     Dates: start: 20210302, end: 20210302
  2306. DEXAMETHASONE SODIUM SUCCINATE [Concomitant]
     Active Substance: DEXAMETHASONE SODIUM SUCCINATE
     Indication: Product used for unknown indication
     Dates: start: 20210302, end: 20210302
  2307. DEXAMETHASONE SODIUM SUCCINATE [Concomitant]
     Active Substance: DEXAMETHASONE SODIUM SUCCINATE
     Dates: start: 20210119, end: 20210119
  2308. DEXAMETHASONE SODIUM SUCCINATE [Concomitant]
     Active Substance: DEXAMETHASONE SODIUM SUCCINATE
     Dates: start: 20210119, end: 20210119
  2309. DEXAMETHASONE SODIUM SUCCINATE [Concomitant]
     Active Substance: DEXAMETHASONE SODIUM SUCCINATE
     Dates: start: 20210209, end: 20210209
  2310. DEXAMETHASONE SODIUM SUCCINATE [Concomitant]
     Active Substance: DEXAMETHASONE SODIUM SUCCINATE
     Dates: start: 20210209, end: 20210209
  2311. DEXAMETHASONE SODIUM SUCCINATE [Concomitant]
     Active Substance: DEXAMETHASONE SODIUM SUCCINATE
     Route: 042
     Dates: start: 20210209, end: 20210209
  2312. DEXAMETHASONE SODIUM SUCCINATE [Concomitant]
     Active Substance: DEXAMETHASONE SODIUM SUCCINATE
     Route: 042
     Dates: start: 20210209, end: 20210209
  2313. DEXAMETHASONE SODIUM SUCCINATE [Concomitant]
     Active Substance: DEXAMETHASONE SODIUM SUCCINATE
     Route: 042
     Dates: start: 20210323, end: 20210323
  2314. DEXAMETHASONE SODIUM SUCCINATE [Concomitant]
     Active Substance: DEXAMETHASONE SODIUM SUCCINATE
     Route: 042
     Dates: start: 20210119, end: 20210119
  2315. DEXAMETHASONE SODIUM SUCCINATE [Concomitant]
     Active Substance: DEXAMETHASONE SODIUM SUCCINATE
     Route: 042
     Dates: start: 20210302, end: 20210302
  2316. DEXAMETHASONE SODIUM SUCCINATE [Concomitant]
     Active Substance: DEXAMETHASONE SODIUM SUCCINATE
     Route: 042
     Dates: start: 20210209, end: 20210209
  2317. DEXAMETHASONE SODIUM SUCCINATE [Concomitant]
     Active Substance: DEXAMETHASONE SODIUM SUCCINATE
     Route: 042
     Dates: start: 20210302, end: 20210302
  2318. DEXAMETHASONE SODIUM SUCCINATE [Concomitant]
     Active Substance: DEXAMETHASONE SODIUM SUCCINATE
     Route: 042
     Dates: start: 20210119, end: 20210119
  2319. DEXAMETHASONE SODIUM SUCCINATE [Concomitant]
     Active Substance: DEXAMETHASONE SODIUM SUCCINATE
     Route: 042
     Dates: start: 20210323, end: 20210323
  2320. CHLORPHENAMINE [CHLORPHENAMINE MALEATE] [Concomitant]
     Indication: Rash maculo-papular
     Route: 065
     Dates: start: 20201215, end: 20201215
  2321. CHLORPHENAMINE [CHLORPHENAMINE MALEATE] [Concomitant]
     Indication: Prophylaxis
     Route: 065
     Dates: start: 20210309, end: 20210309
  2322. CHLORPHENAMINE [CHLORPHENAMINE MALEATE] [Concomitant]
     Route: 065
     Dates: start: 20201215, end: 20201215
  2323. CHLORPHENAMINE [CHLORPHENAMINE MALEATE] [Concomitant]
     Route: 065
     Dates: start: 20201124, end: 20201124
  2324. CHLORPHENAMINE [CHLORPHENAMINE MALEATE] [Concomitant]
     Route: 065
     Dates: start: 20210302, end: 20210302
  2325. CHLORPHENAMINE [CHLORPHENAMINE MALEATE] [Concomitant]
     Route: 065
     Dates: start: 20210119, end: 20210119
  2326. CHLORPHENAMINE [CHLORPHENAMINE MALEATE] [Concomitant]
     Route: 065
     Dates: start: 20201217
  2327. CHLORPHENAMINE [CHLORPHENAMINE MALEATE] [Concomitant]
     Route: 042
     Dates: start: 20210323, end: 20210323
  2328. CHLORPHENAMINE [CHLORPHENAMINE MALEATE] [Concomitant]
     Route: 065
     Dates: start: 20210126, end: 20210126
  2329. CHLORPHENAMINE [CHLORPHENAMINE MALEATE] [Concomitant]
     Route: 065
     Dates: start: 20210216, end: 20210216
  2330. CHLORPHENAMINE [CHLORPHENAMINE MALEATE] [Concomitant]
     Route: 065
     Dates: start: 20210209, end: 20210209
  2331. CHLORPHENAMINE [CHLORPHENAMINE MALEATE] [Concomitant]
     Dates: start: 20201124, end: 20201124
  2332. CHLORPHENAMINE [CHLORPHENAMINE MALEATE] [Concomitant]
     Dates: start: 20210323, end: 20210323
  2333. CHLORPHENAMINE [CHLORPHENAMINE MALEATE] [Concomitant]
     Dates: start: 20210216, end: 20210216
  2334. CHLORPHENAMINE [CHLORPHENAMINE MALEATE] [Concomitant]
     Dates: start: 20201217
  2335. CHLORPHENAMINE [CHLORPHENAMINE MALEATE] [Concomitant]
     Dates: start: 20201217
  2336. CHLORPHENAMINE [CHLORPHENAMINE MALEATE] [Concomitant]
     Dates: start: 20210216, end: 20210216
  2337. CHLORPHENAMINE [CHLORPHENAMINE MALEATE] [Concomitant]
     Dates: start: 20210216, end: 20210216
  2338. CHLORPHENAMINE [CHLORPHENAMINE MALEATE] [Concomitant]
     Dates: start: 20201217
  2339. CHLORPHENAMINE [CHLORPHENAMINE MALEATE] [Concomitant]
     Dates: start: 20201217
  2340. CHLORPHENAMINE [CHLORPHENAMINE MALEATE] [Concomitant]
     Dates: start: 20201217
  2341. CHLORPHENAMINE [CHLORPHENAMINE MALEATE] [Concomitant]
     Dates: start: 20201217
  2342. CHLORPHENAMINE [CHLORPHENAMINE MALEATE] [Concomitant]
     Dates: start: 20201217
  2343. CHLORPHENAMINE [CHLORPHENAMINE MALEATE] [Concomitant]
     Dates: start: 20210309, end: 20210309
  2344. CHLORPHENAMINE [CHLORPHENAMINE MALEATE] [Concomitant]
     Dates: start: 20210119, end: 20210119
  2345. CHLORPHENAMINE [CHLORPHENAMINE MALEATE] [Concomitant]
     Dates: start: 20210309, end: 20210309
  2346. CHLORPHENAMINE [CHLORPHENAMINE MALEATE] [Concomitant]
     Dates: start: 20210126, end: 20210126
  2347. CHLORPHENAMINE [CHLORPHENAMINE MALEATE] [Concomitant]
     Dates: start: 20210216, end: 20210216
  2348. CHLORPHENAMINE [CHLORPHENAMINE MALEATE] [Concomitant]
     Dates: start: 20201217
  2349. CHLORPHENAMINE [CHLORPHENAMINE MALEATE] [Concomitant]
     Dates: start: 20210303, end: 20210303
  2350. CHLORPHENAMINE [CHLORPHENAMINE MALEATE] [Concomitant]
     Dates: start: 20210126, end: 20210126
  2351. CHLORPHENAMINE [CHLORPHENAMINE MALEATE] [Concomitant]
     Dates: start: 20210126, end: 20210126
  2352. CHLORPHENAMINE [CHLORPHENAMINE MALEATE] [Concomitant]
     Dates: start: 20210302, end: 20210302
  2353. CHLORPHENAMINE [CHLORPHENAMINE MALEATE] [Concomitant]
     Dates: start: 20210302, end: 20210302
  2354. CHLORPHENAMINE [CHLORPHENAMINE MALEATE] [Concomitant]
     Dates: start: 20210119, end: 20210119
  2355. CHLORPHENAMINE [CHLORPHENAMINE MALEATE] [Concomitant]
     Dates: start: 20210119, end: 20210119
  2356. CHLORPHENAMINE [CHLORPHENAMINE MALEATE] [Concomitant]
     Dates: start: 20210209, end: 20210209
  2357. CHLORPHENAMINE [CHLORPHENAMINE MALEATE] [Concomitant]
     Dates: start: 20210209, end: 20210209
  2358. CHLORPHENAMINE [CHLORPHENAMINE MALEATE] [Concomitant]
     Dates: start: 20210309, end: 20210309
  2359. CHLORPHENAMINE [CHLORPHENAMINE MALEATE] [Concomitant]
     Dates: start: 20210309, end: 20210309
  2360. CHLORPHENAMINE [CHLORPHENAMINE MALEATE] [Concomitant]
     Dates: start: 20201215, end: 20201215
  2361. CHLORPHENAMINE [CHLORPHENAMINE MALEATE] [Concomitant]
     Dates: start: 20201215, end: 20201215
  2362. CHLORPHENAMINE [CHLORPHENAMINE MALEATE] [Concomitant]
     Dates: start: 20210323, end: 20210323
  2363. CHLORPHENAMINE [CHLORPHENAMINE MALEATE] [Concomitant]
     Dates: start: 20210323, end: 20210323
  2364. CHLORPHENAMINE [CHLORPHENAMINE MALEATE] [Concomitant]
     Dates: start: 20210216, end: 20210216
  2365. CHLORPHENAMINE [CHLORPHENAMINE MALEATE] [Concomitant]
     Dates: start: 20210216, end: 20210216
  2366. CHLORPHENAMINE [CHLORPHENAMINE MALEATE] [Concomitant]
     Dates: start: 20201124, end: 20201124
  2367. CHLORPHENAMINE [CHLORPHENAMINE MALEATE] [Concomitant]
     Dates: start: 20201124, end: 20201124
  2368. CHLORPHENAMINE [CHLORPHENAMINE MALEATE] [Concomitant]
     Dates: start: 20201217, end: 20201217
  2369. CHLORPHENAMINE [CHLORPHENAMINE MALEATE] [Concomitant]
     Dates: start: 20201217
  2370. CHLORPHENAMINE [CHLORPHENAMINE MALEATE] [Concomitant]
     Indication: Rash maculo-papular
     Dates: start: 20201124, end: 20201124
  2371. CHLORPHENAMINE [CHLORPHENAMINE MALEATE] [Concomitant]
     Indication: Prophylaxis
     Dates: start: 20210302, end: 20210302
  2372. CHLORPHENAMINE [CHLORPHENAMINE MALEATE] [Concomitant]
     Dates: start: 20201217
  2373. CHLORPHENAMINE [CHLORPHENAMINE MALEATE] [Concomitant]
     Dates: start: 20210209, end: 20210209
  2374. CHLORPHENAMINE [CHLORPHENAMINE MALEATE] [Concomitant]
     Dates: start: 20210119, end: 20210119
  2375. CHLORPHENAMINE [CHLORPHENAMINE MALEATE] [Concomitant]
     Dates: start: 20210126, end: 20210126
  2376. CHLORPHENAMINE [CHLORPHENAMINE MALEATE] [Concomitant]
     Dates: start: 20210309, end: 20210309
  2377. CHLORPHENAMINE [CHLORPHENAMINE MALEATE] [Concomitant]
     Dates: start: 20201215, end: 20201215
  2378. CHLORPHENAMINE [CHLORPHENAMINE MALEATE] [Concomitant]
     Dates: start: 20210216, end: 20210216
  2379. CHLORPHENAMINE [CHLORPHENAMINE MALEATE] [Concomitant]
     Dates: start: 20210323, end: 20210323
  2380. CHLORPHENAMINE [CHLORPHENAMINE MALEATE] [Concomitant]
     Dates: start: 20210309, end: 20210309
  2381. CHLORPHENAMINE [CHLORPHENAMINE MALEATE] [Concomitant]
     Dates: start: 20210309, end: 20210309
  2382. CHLORPHENAMINE [CHLORPHENAMINE MALEATE] [Concomitant]
     Dates: start: 20210216, end: 20210216
  2383. CHLORPHENAMINE [CHLORPHENAMINE MALEATE] [Concomitant]
     Dates: start: 20210216, end: 20210216
  2384. CHLORPHENAMINE [CHLORPHENAMINE MALEATE] [Concomitant]
     Dates: start: 20201124, end: 20201124
  2385. CHLORPHENAMINE [CHLORPHENAMINE MALEATE] [Concomitant]
     Dates: start: 20201124, end: 20201124
  2386. CHLORPHENAMINE [CHLORPHENAMINE MALEATE] [Concomitant]
     Dates: start: 20210302, end: 20210302
  2387. CHLORPHENAMINE [CHLORPHENAMINE MALEATE] [Concomitant]
     Dates: start: 20210302, end: 20210302
  2388. CHLORPHENAMINE [CHLORPHENAMINE MALEATE] [Concomitant]
     Dates: start: 20210126, end: 20210126
  2389. CHLORPHENAMINE [CHLORPHENAMINE MALEATE] [Concomitant]
     Dates: start: 20210126, end: 20210126
  2390. CHLORPHENAMINE [CHLORPHENAMINE MALEATE] [Concomitant]
     Dates: start: 20210119, end: 20210119
  2391. CHLORPHENAMINE [CHLORPHENAMINE MALEATE] [Concomitant]
     Dates: start: 20210119, end: 20210119
  2392. CHLORPHENAMINE [CHLORPHENAMINE MALEATE] [Concomitant]
     Dates: start: 20201217
  2393. CHLORPHENAMINE [CHLORPHENAMINE MALEATE] [Concomitant]
     Dates: start: 20201217
  2394. CHLORPHENAMINE [CHLORPHENAMINE MALEATE] [Concomitant]
     Dates: start: 20210323, end: 20210323
  2395. CHLORPHENAMINE [CHLORPHENAMINE MALEATE] [Concomitant]
     Dates: start: 20210323, end: 20210323
  2396. CHLORPHENAMINE [CHLORPHENAMINE MALEATE] [Concomitant]
     Dates: start: 20210209, end: 20210209
  2397. CHLORPHENAMINE [CHLORPHENAMINE MALEATE] [Concomitant]
     Dates: start: 20210209, end: 20210209
  2398. CHLORPHENAMINE [CHLORPHENAMINE MALEATE] [Concomitant]
     Dates: start: 20201215, end: 20201215
  2399. CHLORPHENAMINE [CHLORPHENAMINE MALEATE] [Concomitant]
     Dates: start: 20201215, end: 20201215
  2400. CHLORPHENAMINE [CHLORPHENAMINE MALEATE] [Concomitant]
     Dates: start: 20210119, end: 20210119
  2401. CHLORPHENAMINE [CHLORPHENAMINE MALEATE] [Concomitant]
     Dates: start: 20210119, end: 20210119
  2402. CHLORPHENAMINE [CHLORPHENAMINE MALEATE] [Concomitant]
     Dates: start: 20210216, end: 20210216
  2403. CHLORPHENAMINE [CHLORPHENAMINE MALEATE] [Concomitant]
     Dates: start: 20210216, end: 20210216
  2404. CHLORPHENAMINE [CHLORPHENAMINE MALEATE] [Concomitant]
     Dates: start: 20201217
  2405. CHLORPHENAMINE [CHLORPHENAMINE MALEATE] [Concomitant]
     Dates: start: 20201217
  2406. CHLORPHENAMINE [CHLORPHENAMINE MALEATE] [Concomitant]
     Dates: start: 20210302, end: 20210302
  2407. CHLORPHENAMINE [CHLORPHENAMINE MALEATE] [Concomitant]
     Dates: start: 20210302, end: 20210302
  2408. CHLORPHENAMINE [CHLORPHENAMINE MALEATE] [Concomitant]
     Dates: start: 20201215, end: 20201215
  2409. CHLORPHENAMINE [CHLORPHENAMINE MALEATE] [Concomitant]
     Dates: start: 20201215, end: 20201215
  2410. CHLORPHENAMINE [CHLORPHENAMINE MALEATE] [Concomitant]
     Dates: start: 20201124, end: 20201124
  2411. CHLORPHENAMINE [CHLORPHENAMINE MALEATE] [Concomitant]
     Dates: start: 20201124, end: 20201124
  2412. CHLORPHENAMINE [CHLORPHENAMINE MALEATE] [Concomitant]
     Dates: start: 20210323, end: 20210323
  2413. CHLORPHENAMINE [CHLORPHENAMINE MALEATE] [Concomitant]
     Dates: start: 20210323, end: 20210323
  2414. CHLORPHENAMINE [CHLORPHENAMINE MALEATE] [Concomitant]
     Dates: start: 20210309, end: 20210309
  2415. CHLORPHENAMINE [CHLORPHENAMINE MALEATE] [Concomitant]
     Dates: start: 20210309, end: 20210309
  2416. CHLORPHENAMINE [CHLORPHENAMINE MALEATE] [Concomitant]
     Dates: start: 20210209, end: 20210209
  2417. CHLORPHENAMINE [CHLORPHENAMINE MALEATE] [Concomitant]
     Dates: start: 20210209, end: 20210209
  2418. CHLORPHENAMINE [CHLORPHENAMINE MALEATE] [Concomitant]
     Dates: start: 20210126, end: 20210126
  2419. CHLORPHENAMINE [CHLORPHENAMINE MALEATE] [Concomitant]
     Dates: start: 20210126, end: 20210126
  2420. CHLORPHENAMINE [CHLORPHENAMINE MALEATE] [Concomitant]
     Indication: Rash maculo-papular
     Dates: start: 20210206, end: 20210206
  2421. CHLORPHENAMINE [CHLORPHENAMINE MALEATE] [Concomitant]
     Indication: Prophylaxis
     Dates: start: 20210206, end: 20210206
  2422. CHLORPHENAMINE [CHLORPHENAMINE MALEATE] [Concomitant]
  2423. CHLORPHENAMINE [CHLORPHENAMINE MALEATE] [Concomitant]
  2424. CHLORPHENAMINE [CHLORPHENAMINE MALEATE] [Concomitant]
     Dates: start: 20201217
  2425. CHLORPHENAMINE [CHLORPHENAMINE MALEATE] [Concomitant]
  2426. CHLORPHENAMINE [CHLORPHENAMINE MALEATE] [Concomitant]
  2427. CHLORPHENAMINE [CHLORPHENAMINE MALEATE] [Concomitant]
     Dates: start: 20201124, end: 20201124
  2428. CHLORPHENAMINE [CHLORPHENAMINE MALEATE] [Concomitant]
     Dates: start: 20201124, end: 20201124
  2429. CODEINE PHOSPHATE [Concomitant]
     Active Substance: CODEINE PHOSPHATE
     Indication: Pain
     Route: 065
     Dates: start: 20201123
  2430. CODEINE PHOSPHATE [Concomitant]
     Active Substance: CODEINE PHOSPHATE
     Route: 065
     Dates: start: 20201224, end: 20201224
  2431. CODEINE PHOSPHATE [Concomitant]
     Active Substance: CODEINE PHOSPHATE
     Indication: Pain
     Dates: start: 20201123
  2432. CODEINE PHOSPHATE [Concomitant]
     Active Substance: CODEINE PHOSPHATE
     Dates: start: 20201224, end: 20201224
  2433. CODEINE PHOSPHATE [Concomitant]
     Active Substance: CODEINE PHOSPHATE
     Dates: start: 20201123
  2434. CODEINE PHOSPHATE [Concomitant]
     Active Substance: CODEINE PHOSPHATE
     Dates: start: 20201123
  2435. CODEINE PHOSPHATE [Concomitant]
     Active Substance: CODEINE PHOSPHATE
     Dates: start: 20201224, end: 20201224
  2436. CODEINE PHOSPHATE [Concomitant]
     Active Substance: CODEINE PHOSPHATE
     Dates: start: 20201224, end: 20201224
  2437. CODEINE PHOSPHATE [Concomitant]
     Active Substance: CODEINE PHOSPHATE
     Dates: start: 20201123
  2438. CODEINE PHOSPHATE [Concomitant]
     Active Substance: CODEINE PHOSPHATE
     Dates: start: 20201224, end: 20201224
  2439. CODEINE PHOSPHATE [Concomitant]
     Active Substance: CODEINE PHOSPHATE
     Dates: start: 20201123
  2440. CODEINE PHOSPHATE [Concomitant]
     Active Substance: CODEINE PHOSPHATE
     Dates: start: 20201224, end: 20201224
  2441. CODEINE PHOSPHATE [Concomitant]
     Active Substance: CODEINE PHOSPHATE
     Dates: start: 20201224, end: 20201224
  2442. CODEINE PHOSPHATE [Concomitant]
     Active Substance: CODEINE PHOSPHATE
     Dates: start: 20201224, end: 20201224
  2443. CODEINE PHOSPHATE [Concomitant]
     Active Substance: CODEINE PHOSPHATE
     Dates: start: 20201224, end: 20201224
  2444. CODEINE PHOSPHATE [Concomitant]
     Active Substance: CODEINE PHOSPHATE
     Dates: start: 20201224, end: 20201224
  2445. CODEINE PHOSPHATE [Concomitant]
     Active Substance: CODEINE PHOSPHATE
     Dates: start: 20201224, end: 20201224
  2446. CODEINE PHOSPHATE [Concomitant]
     Active Substance: CODEINE PHOSPHATE
     Dates: start: 20201224, end: 20201224
  2447. CODEINE PHOSPHATE [Concomitant]
     Active Substance: CODEINE PHOSPHATE
     Dates: start: 20201224, end: 20201224
  2448. CODEINE PHOSPHATE [Concomitant]
     Active Substance: CODEINE PHOSPHATE
     Dates: start: 20201224, end: 20201224
  2449. CODEINE PHOSPHATE [Concomitant]
     Active Substance: CODEINE PHOSPHATE
     Dates: start: 20201224, end: 20201224
  2450. CODEINE PHOSPHATE [Concomitant]
     Active Substance: CODEINE PHOSPHATE
     Dates: start: 20201224, end: 20201224
  2451. CODEINE PHOSPHATE [Concomitant]
     Active Substance: CODEINE PHOSPHATE
     Dates: start: 20201224, end: 20201224
  2452. CODEINE PHOSPHATE [Concomitant]
     Active Substance: CODEINE PHOSPHATE
     Dates: start: 20201123
  2453. CODEINE PHOSPHATE [Concomitant]
     Active Substance: CODEINE PHOSPHATE
     Dates: start: 20201123
  2454. CODEINE PHOSPHATE [Concomitant]
     Active Substance: CODEINE PHOSPHATE
     Dates: start: 20201224, end: 20201224
  2455. CODEINE PHOSPHATE [Concomitant]
     Active Substance: CODEINE PHOSPHATE
     Dates: start: 20201123
  2456. CODEINE PHOSPHATE [Concomitant]
     Active Substance: CODEINE PHOSPHATE
     Dates: start: 20201123
  2457. OMEPRAZOLE MAGNESIUM [Concomitant]
     Active Substance: OMEPRAZOLE MAGNESIUM
     Indication: Gastrointestinal disorder prophylaxis
     Route: 065
  2458. OMEPRAZOLE MAGNESIUM [Concomitant]
     Active Substance: OMEPRAZOLE MAGNESIUM
     Route: 065
     Dates: start: 20201118
  2459. OMEPRAZOLE SODIUM [Concomitant]
     Active Substance: OMEPRAZOLE SODIUM
     Indication: Gastrointestinal disorder prophylaxis
     Dates: start: 20201118
  2460. OMEPRAZOLE SODIUM [Concomitant]
     Active Substance: OMEPRAZOLE SODIUM
     Dates: start: 20201118
  2461. OMEPRAZOLE SODIUM [Concomitant]
     Active Substance: OMEPRAZOLE SODIUM
  2462. OMEPRAZOLE SODIUM [Concomitant]
     Active Substance: OMEPRAZOLE SODIUM
  2463. OMEPRAZOLE SODIUM [Concomitant]
     Active Substance: OMEPRAZOLE SODIUM
     Dates: start: 20201118
  2464. OMEPRAZOLE SODIUM [Concomitant]
     Active Substance: OMEPRAZOLE SODIUM
  2465. OMEPRAZOLE SODIUM [Concomitant]
     Active Substance: OMEPRAZOLE SODIUM
  2466. OMEPRAZOLE SODIUM [Concomitant]
     Active Substance: OMEPRAZOLE SODIUM
  2467. OMEPRAZOLE SODIUM [Concomitant]
     Active Substance: OMEPRAZOLE SODIUM
  2468. OMEPRAZOLE SODIUM [Concomitant]
     Active Substance: OMEPRAZOLE SODIUM
  2469. OMEPRAZOLE SODIUM [Concomitant]
     Active Substance: OMEPRAZOLE SODIUM
  2470. OMEPRAZOLE SODIUM [Concomitant]
     Active Substance: OMEPRAZOLE SODIUM
  2471. OMEPRAZOLE SODIUM [Concomitant]
     Active Substance: OMEPRAZOLE SODIUM
  2472. OMEPRAZOLE SODIUM [Concomitant]
     Active Substance: OMEPRAZOLE SODIUM
  2473. OMEPRAZOLE SODIUM [Concomitant]
     Active Substance: OMEPRAZOLE SODIUM
  2474. OMEPRAZOLE SODIUM [Concomitant]
     Active Substance: OMEPRAZOLE SODIUM
  2475. OMEPRAZOLE SODIUM [Concomitant]
     Active Substance: OMEPRAZOLE SODIUM
  2476. OMEPRAZOLE SODIUM [Concomitant]
     Active Substance: OMEPRAZOLE SODIUM
  2477. OMEPRAZOLE SODIUM [Concomitant]
     Active Substance: OMEPRAZOLE SODIUM
  2478. OMEPRAZOLE SODIUM [Concomitant]
     Active Substance: OMEPRAZOLE SODIUM
  2479. OMEPRAZOLE SODIUM [Concomitant]
     Active Substance: OMEPRAZOLE SODIUM
  2480. OMEPRAZOLE SODIUM [Concomitant]
     Active Substance: OMEPRAZOLE SODIUM
  2481. OMEPRAZOLE SODIUM [Concomitant]
     Active Substance: OMEPRAZOLE SODIUM
  2482. OMEPRAZOLE SODIUM [Concomitant]
     Active Substance: OMEPRAZOLE SODIUM
  2483. OMEPRAZOLE SODIUM [Concomitant]
     Active Substance: OMEPRAZOLE SODIUM
  2484. OMEPRAZOLE SODIUM [Concomitant]
     Active Substance: OMEPRAZOLE SODIUM
  2485. OMEPRAZOLE SODIUM [Concomitant]
     Active Substance: OMEPRAZOLE SODIUM
  2486. OMEPRAZOLE SODIUM [Concomitant]
     Active Substance: OMEPRAZOLE SODIUM
  2487. OMEPRAZOLE SODIUM [Concomitant]
     Active Substance: OMEPRAZOLE SODIUM
  2488. OMEPRAZOLE SODIUM [Concomitant]
     Active Substance: OMEPRAZOLE SODIUM
  2489. OMEPRAZOLE SODIUM [Concomitant]
     Active Substance: OMEPRAZOLE SODIUM
  2490. OMEPRAZOLE SODIUM [Concomitant]
     Active Substance: OMEPRAZOLE SODIUM
  2491. OMEPRAZOLE SODIUM [Concomitant]
     Active Substance: OMEPRAZOLE SODIUM
  2492. OMEPRAZOLE SODIUM [Concomitant]
     Active Substance: OMEPRAZOLE SODIUM
  2493. OMEPRAZOLE SODIUM [Concomitant]
     Active Substance: OMEPRAZOLE SODIUM
  2494. OMEPRAZOLE SODIUM [Concomitant]
     Active Substance: OMEPRAZOLE SODIUM
  2495. OMEPRAZOLE SODIUM [Concomitant]
     Active Substance: OMEPRAZOLE SODIUM
  2496. OMEPRAZOLE SODIUM [Concomitant]
     Active Substance: OMEPRAZOLE SODIUM
  2497. OMEPRAZOLE SODIUM [Concomitant]
     Active Substance: OMEPRAZOLE SODIUM
  2498. OMEPRAZOLE SODIUM [Concomitant]
     Active Substance: OMEPRAZOLE SODIUM
     Dates: start: 20201118
  2499. ALLOPURINOL SODIUM [Concomitant]
     Active Substance: ALLOPURINOL SODIUM
     Indication: Prophylaxis
     Route: 065
     Dates: start: 20201118
  2500. ALLOPURINOL SODIUM [Concomitant]
     Active Substance: ALLOPURINOL SODIUM
     Dates: start: 20201118
  2501. ALLOPURINOL SODIUM [Concomitant]
     Active Substance: ALLOPURINOL SODIUM
     Dates: start: 20201118
  2502. ALLOPURINOL SODIUM [Concomitant]
     Active Substance: ALLOPURINOL SODIUM
     Dates: start: 20201118
  2503. ALLOPURINOL SODIUM [Concomitant]
     Active Substance: ALLOPURINOL SODIUM
     Dates: start: 20201118
  2504. ALLOPURINOL SODIUM [Concomitant]
     Active Substance: ALLOPURINOL SODIUM
     Route: 065
     Dates: start: 20201118
  2505. ALLOPURINOL SODIUM [Concomitant]
     Active Substance: ALLOPURINOL SODIUM
     Dates: start: 20201118
  2506. ALLOPURINOL SODIUM [Concomitant]
     Active Substance: ALLOPURINOL SODIUM
     Dates: start: 20201118
  2507. ALLOPURINOL SODIUM [Concomitant]
     Active Substance: ALLOPURINOL SODIUM
     Dates: start: 20201118
  2508. ALLOPURINOL SODIUM [Concomitant]
     Active Substance: ALLOPURINOL SODIUM
     Dates: start: 20201118
  2509. ALLOPURINOL SODIUM [Concomitant]
     Active Substance: ALLOPURINOL SODIUM
     Dates: start: 20201118
  2510. ALLOPURINOL SODIUM [Concomitant]
     Active Substance: ALLOPURINOL SODIUM
     Dates: start: 20201118
  2511. ALLOPURINOL SODIUM [Concomitant]
     Active Substance: ALLOPURINOL SODIUM
     Dates: start: 20201118
  2512. ALLOPURINOL SODIUM [Concomitant]
     Active Substance: ALLOPURINOL SODIUM
     Dates: start: 20201118
  2513. ALLOPURINOL SODIUM [Concomitant]
     Active Substance: ALLOPURINOL SODIUM
     Dates: start: 20201118
  2514. ALLOPURINOL SODIUM [Concomitant]
     Active Substance: ALLOPURINOL SODIUM
     Dates: start: 20201118
  2515. ALLOPURINOL SODIUM [Concomitant]
     Active Substance: ALLOPURINOL SODIUM
     Dates: start: 20201118
  2516. ALLOPURINOL SODIUM [Concomitant]
     Active Substance: ALLOPURINOL SODIUM
     Dates: start: 20201118
  2517. ALLOPURINOL SODIUM [Concomitant]
     Active Substance: ALLOPURINOL SODIUM
     Dates: start: 20201118
  2518. ALLOPURINOL SODIUM [Concomitant]
     Active Substance: ALLOPURINOL SODIUM
     Dates: start: 20201118
  2519. ALLOPURINOL SODIUM [Concomitant]
     Active Substance: ALLOPURINOL SODIUM
     Dates: start: 20201118
  2520. ALLOPURINOL SODIUM [Concomitant]
     Active Substance: ALLOPURINOL SODIUM
     Dates: start: 20201118
  2521. ALLOPURINOL SODIUM [Concomitant]
     Active Substance: ALLOPURINOL SODIUM
     Dates: start: 20201118
  2522. ALLOPURINOL SODIUM [Concomitant]
     Active Substance: ALLOPURINOL SODIUM
     Dates: start: 20201118
  2523. ALLOPURINOL SODIUM [Concomitant]
     Active Substance: ALLOPURINOL SODIUM
     Dates: start: 20201118
  2524. ALLOPURINOL SODIUM [Concomitant]
     Active Substance: ALLOPURINOL SODIUM
     Dates: start: 20201118
  2525. ALLOPURINOL SODIUM [Concomitant]
     Active Substance: ALLOPURINOL SODIUM
     Dates: start: 20201118
  2526. ALLOPURINOL SODIUM [Concomitant]
     Active Substance: ALLOPURINOL SODIUM
     Dates: start: 20201118
  2527. ALLOPURINOL SODIUM [Concomitant]
     Active Substance: ALLOPURINOL SODIUM
     Dates: start: 20201118
  2528. ALLOPURINOL SODIUM [Concomitant]
     Active Substance: ALLOPURINOL SODIUM
     Dates: start: 20201118
  2529. ALLOPURINOL SODIUM [Concomitant]
     Active Substance: ALLOPURINOL SODIUM
     Dates: start: 20201118
  2530. ALLOPURINOL SODIUM [Concomitant]
     Active Substance: ALLOPURINOL SODIUM
     Dates: start: 20201118
  2531. ALLOPURINOL SODIUM [Concomitant]
     Active Substance: ALLOPURINOL SODIUM
     Dates: start: 20201118
  2532. ALLOPURINOL SODIUM [Concomitant]
     Active Substance: ALLOPURINOL SODIUM
     Dates: start: 20201118
  2533. ALLOPURINOL SODIUM [Concomitant]
     Active Substance: ALLOPURINOL SODIUM
     Dates: start: 20201118
  2534. ALLOPURINOL SODIUM [Concomitant]
     Active Substance: ALLOPURINOL SODIUM
     Dates: start: 20201118
  2535. ALLOPURINOL SODIUM [Concomitant]
     Active Substance: ALLOPURINOL SODIUM
     Dates: start: 20201118
  2536. ALLOPURINOL SODIUM [Concomitant]
     Active Substance: ALLOPURINOL SODIUM
     Dates: start: 20201118
  2537. ALLOPURINOL SODIUM [Concomitant]
     Active Substance: ALLOPURINOL SODIUM
     Dates: start: 20201118
  2538. ALLOPURINOL SODIUM [Concomitant]
     Active Substance: ALLOPURINOL SODIUM
     Dates: start: 20201118
  2539. ALLOPURINOL SODIUM [Concomitant]
     Active Substance: ALLOPURINOL SODIUM
     Dates: start: 20201118
  2540. ALLOPURINOL SODIUM [Concomitant]
     Active Substance: ALLOPURINOL SODIUM
     Dates: start: 20201118
  2541. ALLOPURINOL SODIUM [Concomitant]
     Active Substance: ALLOPURINOL SODIUM
     Dates: start: 20201118
  2542. ALLOPURINOL SODIUM [Concomitant]
     Active Substance: ALLOPURINOL SODIUM
     Dates: start: 20201118
  2543. ALLOPURINOL SODIUM [Concomitant]
     Active Substance: ALLOPURINOL SODIUM
     Dates: start: 20201118
  2544. ALLOPURINOL SODIUM [Concomitant]
     Active Substance: ALLOPURINOL SODIUM
     Dates: start: 20201118
  2545. ALLOPURINOL SODIUM [Concomitant]
     Active Substance: ALLOPURINOL SODIUM
     Dates: start: 20201118
  2546. ALLOPURINOL SODIUM [Concomitant]
     Active Substance: ALLOPURINOL SODIUM
     Dates: start: 20201118
  2547. ALLOPURINOL SODIUM [Concomitant]
     Active Substance: ALLOPURINOL SODIUM
     Dates: start: 20201118
  2548. ALLOPURINOL SODIUM [Concomitant]
     Active Substance: ALLOPURINOL SODIUM
     Dates: start: 20201118
  2549. ALLOPURINOL SODIUM [Concomitant]
     Active Substance: ALLOPURINOL SODIUM
     Indication: Prophylaxis
     Dates: start: 20201118
  2550. ALLOPURINOL SODIUM [Concomitant]
     Active Substance: ALLOPURINOL SODIUM
     Dates: start: 20201118
  2551. ALLOPURINOL SODIUM [Concomitant]
     Active Substance: ALLOPURINOL SODIUM
     Dates: start: 20201118
  2552. ALLOPURINOL SODIUM [Concomitant]
     Active Substance: ALLOPURINOL SODIUM
     Dates: start: 20201118
  2553. ALLOPURINOL SODIUM [Concomitant]
     Active Substance: ALLOPURINOL SODIUM
     Dates: start: 20201118
  2554. ALLOPURINOL SODIUM [Concomitant]
     Active Substance: ALLOPURINOL SODIUM
     Dates: start: 20201118
  2555. ALLOPURINOL SODIUM [Concomitant]
     Active Substance: ALLOPURINOL SODIUM
     Dates: start: 20201118
  2556. ALLOPURINOL SODIUM [Concomitant]
     Active Substance: ALLOPURINOL SODIUM
     Dates: start: 20201118
  2557. ALLOPURINOL SODIUM [Concomitant]
     Active Substance: ALLOPURINOL SODIUM
     Dates: start: 20201118
  2558. ALLOPURINOL SODIUM [Concomitant]
     Active Substance: ALLOPURINOL SODIUM
     Dates: start: 20201118
  2559. ALLOPURINOL SODIUM [Concomitant]
     Active Substance: ALLOPURINOL SODIUM
     Dates: start: 20201118
  2560. ALLOPURINOL SODIUM [Concomitant]
     Active Substance: ALLOPURINOL SODIUM
     Dates: start: 20201118
  2561. ALLOPURINOL SODIUM [Concomitant]
     Active Substance: ALLOPURINOL SODIUM
     Dates: start: 20201118
  2562. ALLOPURINOL SODIUM [Concomitant]
     Active Substance: ALLOPURINOL SODIUM
     Dates: start: 20201118
  2563. ALLOPURINOL SODIUM [Concomitant]
     Active Substance: ALLOPURINOL SODIUM
     Dates: start: 20201118
  2564. ALLOPURINOL SODIUM [Concomitant]
     Active Substance: ALLOPURINOL SODIUM
     Dates: start: 20201118
  2565. ALLOPURINOL SODIUM [Concomitant]
     Active Substance: ALLOPURINOL SODIUM
     Dates: start: 20201118
  2566. ALLOPURINOL SODIUM [Concomitant]
     Active Substance: ALLOPURINOL SODIUM
     Dates: start: 20201118
  2567. ALLOPURINOL SODIUM [Concomitant]
     Active Substance: ALLOPURINOL SODIUM
     Dates: start: 20201118
  2568. ALLOPURINOL SODIUM [Concomitant]
     Active Substance: ALLOPURINOL SODIUM
     Dates: start: 20201118
  2569. ALLOPURINOL SODIUM [Concomitant]
     Active Substance: ALLOPURINOL SODIUM
     Dates: start: 20201118
  2570. ALLOPURINOL SODIUM [Concomitant]
     Active Substance: ALLOPURINOL SODIUM
     Dates: start: 20201118
  2571. ALLOPURINOL SODIUM [Concomitant]
     Active Substance: ALLOPURINOL SODIUM
     Dates: start: 20201118
  2572. ALLOPURINOL SODIUM [Concomitant]
     Active Substance: ALLOPURINOL SODIUM
     Dates: start: 20201118
  2573. ALLOPURINOL SODIUM [Concomitant]
     Active Substance: ALLOPURINOL SODIUM
     Dates: start: 20201118
  2574. ALLOPURINOL SODIUM [Concomitant]
     Active Substance: ALLOPURINOL SODIUM
     Dates: start: 20201118
  2575. ALLOPURINOL SODIUM [Concomitant]
     Active Substance: ALLOPURINOL SODIUM
     Dates: start: 20201118
  2576. ALLOPURINOL SODIUM [Concomitant]
     Active Substance: ALLOPURINOL SODIUM
     Dates: start: 20201118
  2577. ALLOPURINOL SODIUM [Concomitant]
     Active Substance: ALLOPURINOL SODIUM
     Dates: start: 20201118
  2578. ALLOPURINOL SODIUM [Concomitant]
     Active Substance: ALLOPURINOL SODIUM
     Dates: start: 20201118
  2579. ALLOPURINOL SODIUM [Concomitant]
     Active Substance: ALLOPURINOL SODIUM
     Dates: start: 20201118
  2580. ALLOPURINOL SODIUM [Concomitant]
     Active Substance: ALLOPURINOL SODIUM
     Dates: start: 20201118
  2581. ALLOPURINOL SODIUM [Concomitant]
     Active Substance: ALLOPURINOL SODIUM
     Dates: start: 20201118
  2582. ALLOPURINOL SODIUM [Concomitant]
     Active Substance: ALLOPURINOL SODIUM
     Dates: start: 20201118
  2583. ALLOPURINOL SODIUM [Concomitant]
     Active Substance: ALLOPURINOL SODIUM
     Dates: start: 20201118
  2584. DEXAMETHASONE PHOSPHATE [Concomitant]
     Active Substance: DEXAMETHASONE PHOSPHATE
     Indication: Product used for unknown indication
     Route: 042
     Dates: start: 20210302, end: 20210302
  2585. DEXAMETHASONE PHOSPHATE [Concomitant]
     Active Substance: DEXAMETHASONE PHOSPHATE
     Route: 065
     Dates: start: 20210323, end: 20210323
  2586. DEXAMETHASONE PHOSPHATE [Concomitant]
     Active Substance: DEXAMETHASONE PHOSPHATE
     Route: 065
     Dates: start: 20210209, end: 20210209
  2587. DEXAMETHASONE PHOSPHATE [Concomitant]
     Active Substance: DEXAMETHASONE PHOSPHATE
     Route: 065
     Dates: start: 20210119, end: 20210119
  2588. DEXAMETHASONE PHOSPHATE [Concomitant]
     Active Substance: DEXAMETHASONE PHOSPHATE
     Route: 042
     Dates: start: 20210119, end: 20210119
  2589. DEXAMETHASONE PHOSPHATE [Concomitant]
     Active Substance: DEXAMETHASONE PHOSPHATE
     Route: 065
     Dates: start: 20210302, end: 20210302
  2590. DEXAMETHASONE PHOSPHATE [Concomitant]
     Active Substance: DEXAMETHASONE PHOSPHATE
     Route: 042
     Dates: start: 20210323, end: 20210323
  2591. DEXAMETHASONE PHOSPHATE [Concomitant]
     Active Substance: DEXAMETHASONE PHOSPHATE
     Route: 065
     Dates: start: 20210302, end: 20210302
  2592. DEXAMETHASONE PHOSPHATE [Concomitant]
     Active Substance: DEXAMETHASONE PHOSPHATE
     Route: 042
     Dates: start: 20210209, end: 20210209
  2593. COVID-19 VACCINE [Concomitant]
     Indication: Product used for unknown indication
     Route: 065
  2594. ACETAMINOPHEN [Concomitant]
     Active Substance: ACETAMINOPHEN
     Indication: Prophylaxis
     Route: 065
     Dates: start: 20210309, end: 20210309

REACTIONS (7)
  - Death [Fatal]
  - Neutropenia [Recovered/Resolved]
  - Product use in unapproved indication [Unknown]
  - Off label use [Unknown]
  - Product use issue [Unknown]
  - Overdose [Unknown]
  - Underdose [Unknown]

NARRATIVE: CASE EVENT DATE: 20201124
